FAERS Safety Report 18933570 (Version 23)
Quarter: 2024Q1

REPORT INFORMATION
  Report Type: Other
  Country: CA (occurrence: CA)
  Receive Date: 20210224
  Receipt Date: 20240307
  Transmission Date: 20240409
  Serious: Yes (Death, Life-Threatening, Hospitalization, Disabling, Other)
  Sender: FDA-Public Use
  Company Number: CA-GLENMARK PHARMACEUTICALS-2021GMK052211

PATIENT

DRUGS (1414)
  1. GABAPENTIN [Suspect]
     Active Substance: GABAPENTIN
     Indication: Neuralgia
     Dosage: 100 MILLIGRAM, 1 EVERY 1 DAYS
     Route: 048
  2. GABAPENTIN [Suspect]
     Active Substance: GABAPENTIN
     Indication: Intentional product misuse
     Dosage: UNK
     Route: 065
  3. GABAPENTIN [Suspect]
     Active Substance: GABAPENTIN
     Indication: Bacterial infection
     Dosage: UNK
     Route: 065
  4. GABAPENTIN [Suspect]
     Active Substance: GABAPENTIN
     Indication: Off label use
     Dosage: UNK
     Route: 065
  5. GABAPENTIN [Suspect]
     Active Substance: GABAPENTIN
     Dosage: 100 MILLIGRAM, 1 EVERY 1 DAYS
     Route: 048
  6. GABAPENTIN [Suspect]
     Active Substance: GABAPENTIN
     Dosage: 100 MILLIGRAM
     Route: 048
  7. GABAPENTIN [Suspect]
     Active Substance: GABAPENTIN
     Dosage: 100 MILLIGRAM, 1 EVERY 1 DAYS
     Route: 048
  8. GABAPENTIN [Suspect]
     Active Substance: GABAPENTIN
     Dosage: 1000 MILLIGRAM, 1 EVERY 1 DAYS
     Route: 048
  9. GABAPENTIN [Suspect]
     Active Substance: GABAPENTIN
     Dosage: UNK
     Route: 048
  10. GABAPENTIN [Suspect]
     Active Substance: GABAPENTIN
     Dosage: UNK, 1 EVERY 1 DAY
     Route: 048
  11. GABAPENTIN [Suspect]
     Active Substance: GABAPENTIN
     Dosage: 10 MILLIGRAM, 1 EVERY 1 DAY
     Route: 048
  12. GABAPENTIN [Suspect]
     Active Substance: GABAPENTIN
     Dosage: UNK
     Route: 048
  13. GABAPENTIN [Suspect]
     Active Substance: GABAPENTIN
     Dosage: UNK
     Route: 048
  14. DEXTROSE [Suspect]
     Active Substance: DEXTROSE\DEXTROSE MONOHYDRATE
     Indication: Nutritional supplementation
     Dosage: 12.5 GRAM, PRN (FORMULATION REPORTED: SOLUTION INTRAVENOUS)
     Route: 042
  15. DEXTROSE [Suspect]
     Active Substance: DEXTROSE\DEXTROSE MONOHYDRATE
     Dosage: 12.5 MILLIGRAM
     Route: 042
  16. DEXTROSE [Suspect]
     Active Substance: DEXTROSE\DEXTROSE MONOHYDRATE
     Dosage: 12.5 GRAM 1 EVERY 1 DAYS
     Route: 042
  17. DEXTROSE [Suspect]
     Active Substance: DEXTROSE\DEXTROSE MONOHYDRATE
     Dosage: 12.5 MILLIGRAM, PRN
     Route: 042
  18. DEXTROSE [Suspect]
     Active Substance: DEXTROSE\DEXTROSE MONOHYDRATE
     Dosage: 12.5 GRAM, PRN
     Route: 042
  19. ACETAMINOPHEN [Suspect]
     Active Substance: ACETAMINOPHEN
     Indication: Analgesic therapy
     Dosage: 650 MILLIGRAM, 1 EVERY 1 DAYS
     Route: 048
  20. ACETAMINOPHEN [Suspect]
     Active Substance: ACETAMINOPHEN
     Indication: Off label use
     Dosage: 650 MILLIGRAM, 1 EVERY 1 DAYS
     Route: 048
  21. ACETAMINOPHEN [Suspect]
     Active Substance: ACETAMINOPHEN
     Indication: Intentional product misuse
     Dosage: 650 MILLIGRAM, QD
     Route: 048
  22. ACETAMINOPHEN [Suspect]
     Active Substance: ACETAMINOPHEN
     Dosage: UNK
     Route: 065
  23. ACETAMINOPHEN [Suspect]
     Active Substance: ACETAMINOPHEN
     Dosage: UNK
     Route: 065
  24. ACETAMINOPHEN [Suspect]
     Active Substance: ACETAMINOPHEN
     Dosage: 650 MILLIGRAM
     Route: 048
  25. ACETAMINOPHEN [Suspect]
     Active Substance: ACETAMINOPHEN
     Dosage: 650 MILLIGRAM
     Route: 048
  26. ACETAMINOPHEN [Suspect]
     Active Substance: ACETAMINOPHEN
     Dosage: 650 MILLIGRAM
     Route: 048
  27. ACETAMINOPHEN [Suspect]
     Active Substance: ACETAMINOPHEN
     Dosage: 650 MILLIGRAM
     Route: 048
  28. ACETAMINOPHEN [Suspect]
     Active Substance: ACETAMINOPHEN
     Dosage: 600 MILLIGRAM
     Route: 048
  29. ACETAMINOPHEN [Suspect]
     Active Substance: ACETAMINOPHEN
     Dosage: 5 MILLIGRAM, QD
     Route: 042
  30. ACETAMINOPHEN [Suspect]
     Active Substance: ACETAMINOPHEN
     Dosage: UNK, QD
     Route: 048
  31. ACETAMINOPHEN [Suspect]
     Active Substance: ACETAMINOPHEN
     Dosage: UNK
     Route: 048
  32. ACETAMINOPHEN [Suspect]
     Active Substance: ACETAMINOPHEN
     Dosage: 650 MILLIGRAM, 1 EVERY 1 DAYS
     Route: 048
  33. ACETAMINOPHEN [Suspect]
     Active Substance: ACETAMINOPHEN
     Dosage: 650 MILLIGRAM, 1 EVERY 1 DAYS
     Route: 048
  34. ACETAMINOPHEN [Suspect]
     Active Substance: ACETAMINOPHEN
     Dosage: 650 MILLIGRAM, 1 EVERY 1 DAYS
     Route: 065
  35. ACETAMINOPHEN [Suspect]
     Active Substance: ACETAMINOPHEN
     Dosage: 5 MILLIGRAM, 1 EVERY 1 DAYS
     Route: 042
  36. ACETAMINOPHEN [Suspect]
     Active Substance: ACETAMINOPHEN
     Dosage: 5 MILLIGRAM, 1 EVERY 1 DAYS
     Route: 042
  37. ALLOPURINOL [Suspect]
     Active Substance: ALLOPURINOL
     Indication: Blood uric acid increased
     Dosage: 100 MILLIGRAM, 1 EVERY 1 DAYS (FORMULATION: TABLET)
     Route: 048
  38. ALLOPURINOL [Suspect]
     Active Substance: ALLOPURINOL
     Indication: Off label use
     Dosage: 1 DOSAGE FORM, 1 EVERY 1 DAYS (FORMULATION: UNKNOWN)
     Route: 048
  39. ALLOPURINOL [Suspect]
     Active Substance: ALLOPURINOL
     Indication: Intentional product misuse
     Dosage: 1 DOSAGE FORM, OD (FORMULATION: UNKNOWN)
     Route: 048
  40. ALLOPURINOL [Suspect]
     Active Substance: ALLOPURINOL
     Dosage: 1 DOSAGE FORM, OD (FORMULATION: UNKNOWN)
     Route: 048
  41. ALLOPURINOL [Suspect]
     Active Substance: ALLOPURINOL
     Dosage: 1 DOSAGE FORM, OD (FORMULATION: UNKNOWN)
     Route: 048
  42. ALLOPURINOL [Suspect]
     Active Substance: ALLOPURINOL
     Dosage: 100 MILLIGRAM, 1 EVERY 1 DAYS (FORMULATION: TABLET)
     Route: 048
  43. ALLOPURINOL [Suspect]
     Active Substance: ALLOPURINOL
     Dosage: UNK
     Route: 065
  44. ALLOPURINOL [Suspect]
     Active Substance: ALLOPURINOL
     Dosage: UNK
     Route: 065
  45. ALLOPURINOL [Suspect]
     Active Substance: ALLOPURINOL
     Dosage: UNK
     Route: 065
  46. ALLOPURINOL [Suspect]
     Active Substance: ALLOPURINOL
     Dosage: 100 MILLIGRAM
     Route: 048
  47. ALLOPURINOL [Suspect]
     Active Substance: ALLOPURINOL
     Dosage: 100 MILLIGRAM, 1 EVERY 1 DAYS
     Route: 048
  48. ALLOPURINOL [Suspect]
     Active Substance: ALLOPURINOL
     Dosage: 100 MILLIGRAM, 1 EVERY 1 DAYS (FORMULATION: TABLET)
     Route: 048
  49. ALLOPURINOL [Suspect]
     Active Substance: ALLOPURINOL
     Dosage: 1 DOSAGE FORM
     Route: 048
  50. ALLOPURINOL [Suspect]
     Active Substance: ALLOPURINOL
     Dosage: 1 DOSAGE FORM
     Route: 048
  51. ALLOPURINOL [Suspect]
     Active Substance: ALLOPURINOL
     Dosage: 1 DOSAGE FORM
     Route: 048
  52. ALLOPURINOL [Suspect]
     Active Substance: ALLOPURINOL
     Dosage: 1 DOSAGE FORM
     Route: 048
  53. ALLOPURINOL [Suspect]
     Active Substance: ALLOPURINOL
     Dosage: UNK, 1 EVERY 1 DAYS
     Route: 048
  54. ALLOPURINOL [Suspect]
     Active Substance: ALLOPURINOL
     Dosage: UNK
     Route: 048
  55. ALLOPURINOL [Suspect]
     Active Substance: ALLOPURINOL
     Dosage: UNK
     Route: 065
  56. ALLOPURINOL [Suspect]
     Active Substance: ALLOPURINOL
     Dosage: 1 DOSAGE FORM, 1 EVERY 1 DAYS
     Route: 048
  57. ALLOPURINOL [Suspect]
     Active Substance: ALLOPURINOL
     Dosage: 1 DOSAGE FORM, 1 EVERY 1 DAYS
     Route: 048
  58. ALLOPURINOL [Suspect]
     Active Substance: ALLOPURINOL
     Dosage: 100 MICROGRAM, 1 EVERY 1 DAYS
     Route: 065
  59. ALLOPURINOL [Suspect]
     Active Substance: ALLOPURINOL
     Dosage: 100 MICROGRAM
     Route: 065
  60. ALLOPURINOL [Suspect]
     Active Substance: ALLOPURINOL
     Dosage: 1 DOSAGE FORM, 1 EVERY 1 DAYS
     Route: 048
  61. ALLOPURINOL [Suspect]
     Active Substance: ALLOPURINOL
     Dosage: 1 DOSAGE FORM, 1 EVERY 1 DAYS
     Route: 048
  62. AMIODARONE [Suspect]
     Active Substance: AMIODARONE
     Indication: Ventricular fibrillation
     Dosage: 150 MILLIGRAM, 1 EVERY 1 DAYS
     Route: 042
  63. AMIODARONE [Suspect]
     Active Substance: AMIODARONE
     Indication: Off label use
     Dosage: UNK
     Route: 042
  64. AMIODARONE [Suspect]
     Active Substance: AMIODARONE
     Indication: Intentional product misuse
     Dosage: UNK UNK, 1 EVERY 1 DAYS
     Route: 042
  65. AMIODARONE [Suspect]
     Active Substance: AMIODARONE
     Indication: Drug therapy
     Dosage: UNK UNK, OD
     Route: 042
  66. AMIODARONE [Suspect]
     Active Substance: AMIODARONE
     Dosage: UNK UNK, OD
     Route: 042
  67. AMIODARONE [Suspect]
     Active Substance: AMIODARONE
     Dosage: 150 MILLIGRAM, OD
     Route: 042
  68. AMIODARONE [Suspect]
     Active Substance: AMIODARONE
     Dosage: 150 MILLIGRAM, OD
     Route: 042
  69. AMIODARONE [Suspect]
     Active Substance: AMIODARONE
     Dosage: 150 MILLIGRAM, OD
     Route: 042
  70. AMIODARONE [Suspect]
     Active Substance: AMIODARONE
     Dosage: 150 MILLIGRAM, OD
     Route: 042
  71. AMIODARONE [Suspect]
     Active Substance: AMIODARONE
     Dosage: 150 MILLIGRAM, OD
     Route: 042
  72. AMIODARONE [Suspect]
     Active Substance: AMIODARONE
     Dosage: 150 MILLIGRAM, OD
     Route: 042
  73. AMIODARONE [Suspect]
     Active Substance: AMIODARONE
     Dosage: 150 MILLIGRAM, OD
     Route: 042
  74. AMIODARONE [Suspect]
     Active Substance: AMIODARONE
     Dosage: 150 MILLIGRAM, OD
     Route: 042
  75. AMIODARONE [Suspect]
     Active Substance: AMIODARONE
     Dosage: 150 MILLIGRAM, OD
     Route: 042
  76. AMIODARONE [Suspect]
     Active Substance: AMIODARONE
     Dosage: 150 UNK
     Route: 042
  77. AMIODARONE [Suspect]
     Active Substance: AMIODARONE
     Dosage: UNK
     Route: 065
  78. AMIODARONE [Suspect]
     Active Substance: AMIODARONE
     Dosage: UNK
     Route: 065
  79. AMIODARONE [Suspect]
     Active Substance: AMIODARONE
     Dosage: UNK
     Route: 065
  80. AMIODARONE [Suspect]
     Active Substance: AMIODARONE
     Dosage: UNK UNK, 1 EVERY 1 DAYS
     Route: 042
  81. ANTICOAGULANT SODIUM CITRATE [Suspect]
     Active Substance: SODIUM CITRATE
     Indication: Thrombosis
     Dosage: 2.5 MILLILITER, PRN (AS REQUIRED)
     Route: 065
  82. ANTICOAGULANT SODIUM CITRATE [Suspect]
     Active Substance: SODIUM CITRATE
     Dosage: 2.5 MILLILITER
     Route: 065
  83. ANTICOAGULANT SODIUM CITRATE [Suspect]
     Active Substance: SODIUM CITRATE
     Dosage: 2.5 MILLILITER, (1 EVERY 1 DAYS)
     Route: 065
  84. ANTICOAGULANT SODIUM CITRATE [Suspect]
     Active Substance: SODIUM CITRATE
     Dosage: UNK
     Route: 065
  85. HERBALS [Suspect]
     Active Substance: HERBALS
     Indication: Nutritional supplementation
     Dosage: UNK
     Route: 065
  86. ARANESP [Suspect]
     Active Substance: DARBEPOETIN ALFA
     Indication: Anaemia
     Dosage: 10 MICROGRAM, 1 EVERY 2 WEEKS (FORMULATION: SOLUTION INTRAVENOUS)
     Route: 042
  87. ARANESP [Suspect]
     Active Substance: DARBEPOETIN ALFA
     Dosage: 0.71 MICROGRAM 1 EVERY 2 WEEKS (FORMULATION UNKNOWN)
     Route: 042
  88. ARANESP [Suspect]
     Active Substance: DARBEPOETIN ALFA
     Dosage: 10 MICROGRAM, 2 EVERY 1 WEEKS (FORMULATION: SOLUTION INTRAVENOUS)
     Route: 042
  89. ARANESP [Suspect]
     Active Substance: DARBEPOETIN ALFA
     Dosage: 1.42 MICROGRAM 1 EVERY 1 WEEK
     Route: 042
  90. ARANESP [Suspect]
     Active Substance: DARBEPOETIN ALFA
     Dosage: UNK
     Route: 065
  91. ARANESP [Suspect]
     Active Substance: DARBEPOETIN ALFA
     Dosage: 10 MILLIGRAM (CYCLICAL)
     Route: 042
  92. ARANESP [Suspect]
     Active Substance: DARBEPOETIN ALFA
     Dosage: 20 MILLIGRAM 1 EVERY 1 WEEKS
     Route: 042
  93. ARANESP [Suspect]
     Active Substance: DARBEPOETIN ALFA
     Dosage: 0.71 MICROGRAM 2 EVERY 1 WEEKS
     Route: 042
  94. ARANESP [Suspect]
     Active Substance: DARBEPOETIN ALFA
     Dosage: 10 MICROGRAM
     Route: 042
  95. ARANESP [Suspect]
     Active Substance: DARBEPOETIN ALFA
     Dosage: 0.71 MICROGRAM, OD
     Route: 042
  96. ARANESP [Suspect]
     Active Substance: DARBEPOETIN ALFA
     Dosage: 0.71 MICROGRAM
     Route: 042
  97. ARANESP [Suspect]
     Active Substance: DARBEPOETIN ALFA
     Dosage: 10 MICROGRAM
     Route: 042
  98. ARANESP [Suspect]
     Active Substance: DARBEPOETIN ALFA
     Dosage: UNK
     Route: 065
  99. ARANESP [Suspect]
     Active Substance: DARBEPOETIN ALFA
     Dosage: 10 MILLIGRAM 1 EVERY 2 WEEKS
     Route: 042
  100. ARANESP [Suspect]
     Active Substance: DARBEPOETIN ALFA
     Dosage: 10 MICROGRAM 1 EVERY 2 WEEKS
     Route: 042
  101. ARANESP [Suspect]
     Active Substance: DARBEPOETIN ALFA
     Dosage: 0.714 MICROGRAM 1 EVERY 2 WEEKS
     Route: 042
  102. ARANESP [Suspect]
     Active Substance: DARBEPOETIN ALFA
     Dosage: 0.71 MICROGRAM, QW
     Route: 042
  103. ARANESP [Suspect]
     Active Substance: DARBEPOETIN ALFA
     Dosage: 0.71 MICROGRAM, QW
     Route: 042
  104. ARANESP [Suspect]
     Active Substance: DARBEPOETIN ALFA
     Dosage: 0.71 MICROGRAM, QW
     Route: 042
  105. ARANESP [Suspect]
     Active Substance: DARBEPOETIN ALFA
     Dosage: UNK
     Route: 065
  106. ARANESP [Suspect]
     Active Substance: DARBEPOETIN ALFA
     Dosage: 0.714 MICROGRAM 1 EVERY 2 WEEKS
     Route: 042
  107. ARANESP [Suspect]
     Active Substance: DARBEPOETIN ALFA
     Dosage: UNK
     Route: 065
  108. ARANESP [Suspect]
     Active Substance: DARBEPOETIN ALFA
     Dosage: 0.75 MICROGRAM
     Route: 042
  109. ARANESP [Suspect]
     Active Substance: DARBEPOETIN ALFA
     Dosage: 10 MILLIGRAM
     Route: 042
  110. ARANESP [Suspect]
     Active Substance: DARBEPOETIN ALFA
     Dosage: 0.71 MICROGRAM 1 EVERY 2 WEEKS
     Route: 017
  111. ARANESP [Suspect]
     Active Substance: DARBEPOETIN ALFA
     Dosage: 10 MILLIGRAM
     Route: 065
  112. ARANESP [Suspect]
     Active Substance: DARBEPOETIN ALFA
     Dosage: 0.71 MICROGRAM
     Route: 065
  113. ARANESP [Suspect]
     Active Substance: DARBEPOETIN ALFA
     Dosage: 10 MILLIGRAM
     Route: 065
  114. ARANESP [Suspect]
     Active Substance: DARBEPOETIN ALFA
     Dosage: 0.71 MICROGRAM
     Route: 065
  115. ARANESP [Suspect]
     Active Substance: DARBEPOETIN ALFA
     Dosage: 10 MICROGRAM
     Route: 042
  116. ARANESP [Suspect]
     Active Substance: DARBEPOETIN ALFA
     Dosage: 10 MILLIGRAM
     Route: 065
  117. ARANESP [Suspect]
     Active Substance: DARBEPOETIN ALFA
     Dosage: 1.42 MICROGRAM 1 EVERY 1 WEEK
     Route: 042
  118. ARANESP [Suspect]
     Active Substance: DARBEPOETIN ALFA
     Dosage: 1.42 MICROGRAM 1 EVERY 1 WEEK
     Route: 042
  119. ARANESP [Suspect]
     Active Substance: DARBEPOETIN ALFA
     Dosage: 1.42 MICROGRAM 1 EVERY 1 WEEK
     Route: 042
  120. ARANESP [Suspect]
     Active Substance: DARBEPOETIN ALFA
     Dosage: 10 MILLIGRAM
     Route: 065
  121. ARANESP [Suspect]
     Active Substance: DARBEPOETIN ALFA
     Dosage: 0.71 MICROGRAM
     Route: 065
  122. ARANESP [Suspect]
     Active Substance: DARBEPOETIN ALFA
     Dosage: 10 MILLIGRAM, 1 EVERY 2 WEEKS
     Route: 042
  123. ARANESP [Suspect]
     Active Substance: DARBEPOETIN ALFA
     Dosage: 1.42 MICROGRAM 1 EVERY 1 WEEK
     Route: 042
  124. ARANESP [Suspect]
     Active Substance: DARBEPOETIN ALFA
     Dosage: 10 MICROGRAM
     Route: 042
  125. ARANESP [Suspect]
     Active Substance: DARBEPOETIN ALFA
     Dosage: 1.42 MICROGRAM
     Route: 042
  126. ARANESP [Suspect]
     Active Substance: DARBEPOETIN ALFA
     Dosage: 1.42 MICROGRAM
     Route: 042
  127. ARANESP [Suspect]
     Active Substance: DARBEPOETIN ALFA
     Dosage: UNK (1 EVERY 2 WEEKS)
     Route: 042
  128. ARANESP [Suspect]
     Active Substance: DARBEPOETIN ALFA
     Dosage: 10 MICROGRAM, 1 EVERY 1 WEEKS
     Route: 042
  129. ARANESP [Suspect]
     Active Substance: DARBEPOETIN ALFA
     Dosage: 10 MILLIGRAM, 1 EVERY 1 WEEKS
     Route: 042
  130. ARANESP [Suspect]
     Active Substance: DARBEPOETIN ALFA
     Dosage: 1.42 MICROGRAM 1 EVERY 2 WEEKS
     Route: 042
  131. ARANESP [Suspect]
     Active Substance: DARBEPOETIN ALFA
     Dosage: 20 MILLIGRAM, 1 EVERY 1 WEEKS
     Route: 042
  132. ARANESP [Suspect]
     Active Substance: DARBEPOETIN ALFA
     Dosage: 0.71 MICROGRAM, 1 EVERY 1 DAYS
     Route: 065
  133. ARANESP [Suspect]
     Active Substance: DARBEPOETIN ALFA
     Dosage: 10 MILLIGRAM, 2 EVERY 1 WEEKS
     Route: 042
  134. BETA CAROTENE [Suspect]
     Active Substance: BETA CAROTENE
     Indication: Nutritional supplementation
     Dosage: 12.5 GRAM, PRN
     Route: 042
  135. BETA CAROTENE [Suspect]
     Active Substance: BETA CAROTENE
     Dosage: 12.5 GRAM (FORMULATION:SOLUTION FOR INJECTION)
     Route: 042
  136. BETA CAROTENE [Suspect]
     Active Substance: BETA CAROTENE
     Dosage: 12.5 MILLIGRAM
     Route: 042
  137. BETA CAROTENE [Suspect]
     Active Substance: BETA CAROTENE
     Dosage: 12.5 MILLIGRAM
     Route: 065
  138. BETAMETHASONE [Suspect]
     Active Substance: BETAMETHASONE\BETAMETHASONE DIPROPIONATE
     Indication: Swelling
     Dosage: UNK, PRN
     Route: 061
  139. BETAMETHASONE [Suspect]
     Active Substance: BETAMETHASONE\BETAMETHASONE DIPROPIONATE
     Indication: Off label use
     Dosage: UNK, PRN
     Route: 065
  140. BETAMETHASONE [Suspect]
     Active Substance: BETAMETHASONE\BETAMETHASONE DIPROPIONATE
     Dosage: UNK
     Route: 061
  141. BETAMETHASONE [Suspect]
     Active Substance: BETAMETHASONE\BETAMETHASONE DIPROPIONATE
     Dosage: UNK
     Route: 061
  142. BETAMETHASONE [Suspect]
     Active Substance: BETAMETHASONE\BETAMETHASONE DIPROPIONATE
     Dosage: UNK
     Route: 065
  143. BETAMETHASONE [Suspect]
     Active Substance: BETAMETHASONE\BETAMETHASONE DIPROPIONATE
     Dosage: UNK
     Route: 065
  144. BETAMETHASONE [Suspect]
     Active Substance: BETAMETHASONE\BETAMETHASONE DIPROPIONATE
     Dosage: UNK
     Route: 065
  145. BETAMETHASONE [Suspect]
     Active Substance: BETAMETHASONE\BETAMETHASONE DIPROPIONATE
     Dosage: 10 MILLIGRAM
     Route: 061
  146. BETAMETHASONE [Suspect]
     Active Substance: BETAMETHASONE\BETAMETHASONE DIPROPIONATE
     Dosage: 1 DOSAGE FORM
     Route: 061
  147. BETAMETHASONE [Suspect]
     Active Substance: BETAMETHASONE\BETAMETHASONE DIPROPIONATE
     Dosage: UNK
     Route: 065
  148. BETAMETHASONE [Suspect]
     Active Substance: BETAMETHASONE\BETAMETHASONE DIPROPIONATE
     Dosage: 10 DOSAGE FORM
     Route: 061
  149. BETAMETHASONE [Suspect]
     Active Substance: BETAMETHASONE\BETAMETHASONE DIPROPIONATE
     Dosage: 1 DOSAGE FORM
     Route: 065
  150. BETAMETHASONE [Suspect]
     Active Substance: BETAMETHASONE\BETAMETHASONE DIPROPIONATE
     Dosage: UNK
     Route: 061
  151. BETAMETHASONE [Suspect]
     Active Substance: BETAMETHASONE\BETAMETHASONE DIPROPIONATE
     Dosage: UNK
     Route: 061
  152. BETAMETHASONE [Suspect]
     Active Substance: BETAMETHASONE\BETAMETHASONE DIPROPIONATE
     Dosage: UNK
     Route: 061
  153. BETAMETHASONE [Suspect]
     Active Substance: BETAMETHASONE\BETAMETHASONE DIPROPIONATE
     Dosage: 1 EVERY 1 DAYS
     Route: 061
  154. BETAMETHASONE [Suspect]
     Active Substance: BETAMETHASONE\BETAMETHASONE DIPROPIONATE
     Dosage: 10 MILLIGRAM
     Route: 061
  155. BETAMETHASONE [Suspect]
     Active Substance: BETAMETHASONE\BETAMETHASONE DIPROPIONATE
     Dosage: 1 EVERY 1 DAYS
     Route: 061
  156. BETAMETHASONE [Suspect]
     Active Substance: BETAMETHASONE\BETAMETHASONE DIPROPIONATE
     Dosage: 1 EVERY 1 DAYS
     Route: 061
  157. BETAMETHASONE [Suspect]
     Active Substance: BETAMETHASONE\BETAMETHASONE DIPROPIONATE
     Dosage: 10 MILLIGRAM
     Route: 061
  158. BETAMETHASONE [Suspect]
     Active Substance: BETAMETHASONE\BETAMETHASONE DIPROPIONATE
     Dosage: 10 MILLIGRAM, PRN
     Route: 061
  159. BETAMETHASONE [Suspect]
     Active Substance: BETAMETHASONE\BETAMETHASONE DIPROPIONATE
     Dosage: UNK, PRN
     Route: 061
  160. BETAMETHASONE [Suspect]
     Active Substance: BETAMETHASONE\BETAMETHASONE DIPROPIONATE
     Dosage: UNK, PRN
     Route: 061
  161. DIETARY SUPPLEMENT\HERBALS\MINERALS\VITAMINS [Suspect]
     Active Substance: DIETARY SUPPLEMENT\HERBALS\MINERALS\VITAMINS
     Indication: Vitamin supplementation
     Dosage: 5 MILLIGRAM
     Route: 042
  162. DIETARY SUPPLEMENT\HERBALS\MINERALS\VITAMINS [Suspect]
     Active Substance: DIETARY SUPPLEMENT\HERBALS\MINERALS\VITAMINS
     Indication: Off label use
  163. BISACODYL [Suspect]
     Active Substance: BISACODYL
     Indication: Constipation
     Dosage: 10 MILLIGRAM, PRN
     Route: 054
  164. BISACODYL [Suspect]
     Active Substance: BISACODYL
     Indication: Ventricular fibrillation
     Dosage: 10 MILLIGRAM, PRN
     Route: 054
  165. BISACODYL [Suspect]
     Active Substance: BISACODYL
     Indication: Drug therapy
     Dosage: 10 MILLIGRAM
     Route: 065
  166. BISACODYL [Suspect]
     Active Substance: BISACODYL
     Dosage: UNK
     Route: 065
  167. BISACODYL [Suspect]
     Active Substance: BISACODYL
     Dosage: 10 MILLIGRAM 1 EVERY 1 DAY
     Route: 054
  168. BISACODYL [Suspect]
     Active Substance: BISACODYL
     Dosage: 10 MILLIGRAM
     Route: 042
  169. BISACODYL [Suspect]
     Active Substance: BISACODYL
     Dosage: 10 MILLIGRAM
     Route: 054
  170. BISACODYL [Suspect]
     Active Substance: BISACODYL
     Dosage: 10 MILLIGRAM 1 EVERY 1 DAY
     Route: 054
  171. BISACODYL [Suspect]
     Active Substance: BISACODYL
     Dosage: 10 MILLIGRAM 1 EVERY 1 DAY
     Route: 054
  172. BISACODYL [Suspect]
     Active Substance: BISACODYL
     Dosage: UNK
     Route: 065
  173. BISACODYL [Suspect]
     Active Substance: BISACODYL
     Dosage: UNK
     Route: 065
  174. CALCITRIOL [Suspect]
     Active Substance: CALCITRIOL
     Indication: Vitamin D
     Dosage: 0.25 MICROGRAM, 1 EVERY 1 DAYS
     Route: 048
  175. CALCITRIOL [Suspect]
     Active Substance: CALCITRIOL
     Indication: Hypovitaminosis
     Dosage: 0.25 MICROGRAM, PRN
     Route: 048
  176. CALCITRIOL [Suspect]
     Active Substance: CALCITRIOL
     Dosage: UNK
     Route: 065
  177. CALCITRIOL [Suspect]
     Active Substance: CALCITRIOL
     Dosage: UNK
     Route: 065
  178. CALCITRIOL [Suspect]
     Active Substance: CALCITRIOL
     Dosage: UNK
     Route: 065
  179. CALCITRIOL [Suspect]
     Active Substance: CALCITRIOL
     Dosage: 0.25 MICROGRAM, 1 EVERY 1 DAYS
     Route: 048
  180. CALCITRIOL [Suspect]
     Active Substance: CALCITRIOL
     Dosage: 0.25 MICROGRAM, OD
     Route: 048
  181. CALCITRIOL [Suspect]
     Active Substance: CALCITRIOL
     Dosage: 0.25 MICROGRAM, OD
     Route: 048
  182. CALCITRIOL [Suspect]
     Active Substance: CALCITRIOL
     Dosage: 0.25 MICROGRAM, OD
     Route: 048
  183. CALCITRIOL [Suspect]
     Active Substance: CALCITRIOL
     Dosage: 500 MILLIGRAM, TID
     Route: 048
  184. CALCITRIOL [Suspect]
     Active Substance: CALCITRIOL
     Dosage: 0.25 MILLIGRAM,1 EVERY 1 DAYS
     Route: 065
  185. CALCITRIOL [Suspect]
     Active Substance: CALCITRIOL
     Dosage: 0.25 MILLIGRAM,1 EVERY 1 DAYS
     Route: 048
  186. CALCITRIOL [Suspect]
     Active Substance: CALCITRIOL
     Dosage: UNK, 1 EVERY 1 DAYS
     Route: 065
  187. CALCITRIOL [Suspect]
     Active Substance: CALCITRIOL
     Dosage: 500 MILLIGRAM, 1 EVERY 8 HOURS
     Route: 048
  188. CALCITRIOL [Suspect]
     Active Substance: CALCITRIOL
     Dosage: 500 MILLIGRAM, 1 EVERY 8 HOURS
     Route: 048
  189. CEFTRIAXONE [Suspect]
     Active Substance: CEFTRIAXONE\CEFTRIAXONE SODIUM
     Indication: Bacterial infection
     Dosage: 2 GRAM, 1 EVERY 1 DAYS
     Route: 042
  190. CEFTRIAXONE [Suspect]
     Active Substance: CEFTRIAXONE\CEFTRIAXONE SODIUM
     Dosage: UNK, 1 EVERY 1 DAYS
     Route: 042
  191. CEFTRIAXONE [Suspect]
     Active Substance: CEFTRIAXONE\CEFTRIAXONE SODIUM
     Dosage: 2 GRAM, 1 EVERY 1 DAYS
     Route: 065
  192. CEFTRIAXONE [Suspect]
     Active Substance: CEFTRIAXONE\CEFTRIAXONE SODIUM
     Dosage: 2 GRAM
     Route: 065
  193. DALTEPARIN SODIUM [Suspect]
     Active Substance: DALTEPARIN SODIUM
     Indication: Pulmonary embolism
     Dosage: UNK
     Route: 065
  194. DALTEPARIN SODIUM [Suspect]
     Active Substance: DALTEPARIN SODIUM
     Dosage: UNK
     Route: 065
  195. DALTEPARIN SODIUM [Suspect]
     Active Substance: DALTEPARIN SODIUM
     Dosage: UNK
     Route: 065
  196. DALTEPARIN SODIUM [Suspect]
     Active Substance: DALTEPARIN SODIUM
     Dosage: UNK
     Route: 065
  197. DALTEPARIN SODIUM [Suspect]
     Active Substance: DALTEPARIN SODIUM
     Dosage: UNK
     Route: 065
  198. DALTEPARIN SODIUM [Suspect]
     Active Substance: DALTEPARIN SODIUM
     Dosage: UNK
     Route: 065
  199. DALTEPARIN SODIUM [Suspect]
     Active Substance: DALTEPARIN SODIUM
     Dosage: UNK
     Route: 065
  200. DALTEPARIN SODIUM [Suspect]
     Active Substance: DALTEPARIN SODIUM
     Dosage: 2.5 MILLILITRE
     Route: 065
  201. DALTEPARIN SODIUM [Suspect]
     Active Substance: DALTEPARIN SODIUM
     Dosage: 2.5 MILLILITER
     Route: 065
  202. DALTEPARIN SODIUM [Suspect]
     Active Substance: DALTEPARIN SODIUM
     Dosage: 2.5 MILLILITER
     Route: 065
  203. DALTEPARIN SODIUM [Suspect]
     Active Substance: DALTEPARIN SODIUM
     Dosage: UNK
     Route: 048
  204. DALTEPARIN SODIUM [Suspect]
     Active Substance: DALTEPARIN SODIUM
     Dosage: UNK
     Route: 065
  205. DALTEPARIN SODIUM [Suspect]
     Active Substance: DALTEPARIN SODIUM
     Dosage: UNK
     Route: 065
  206. DALTEPARIN SODIUM [Suspect]
     Active Substance: DALTEPARIN SODIUM
     Dosage: UNK
     Route: 065
  207. DALTEPARIN SODIUM [Suspect]
     Active Substance: DALTEPARIN SODIUM
     Dosage: UNK
     Route: 065
  208. DALTEPARIN SODIUM [Suspect]
     Active Substance: DALTEPARIN SODIUM
     Dosage: UNK
     Route: 065
  209. DALTEPARIN SODIUM [Suspect]
     Active Substance: DALTEPARIN SODIUM
     Dosage: 12.5 MILLIGRAM
     Route: 042
  210. DOBUTAMINE [Suspect]
     Active Substance: DOBUTAMINE HYDROCHLORIDE
     Indication: Cardiogenic shock
     Dosage: UNK
     Route: 042
  211. DOBUTAMINE [Suspect]
     Active Substance: DOBUTAMINE HYDROCHLORIDE
     Indication: Off label use
     Dosage: UNK
     Route: 065
  212. DOBUTAMINE [Suspect]
     Active Substance: DOBUTAMINE HYDROCHLORIDE
     Dosage: UNK
     Route: 042
  213. DOBUTAMINE [Suspect]
     Active Substance: DOBUTAMINE HYDROCHLORIDE
     Dosage: UNK
     Route: 065
  214. DOBUTAMINE [Suspect]
     Active Substance: DOBUTAMINE HYDROCHLORIDE
     Dosage: UNK
     Route: 065
  215. DOBUTAMINE [Suspect]
     Active Substance: DOBUTAMINE HYDROCHLORIDE
     Dosage: UNK
     Route: 065
  216. DOBUTAMINE [Suspect]
     Active Substance: DOBUTAMINE HYDROCHLORIDE
     Dosage: UNK
     Route: 042
  217. DOBUTAMINE [Suspect]
     Active Substance: DOBUTAMINE HYDROCHLORIDE
     Dosage: UNK
     Route: 042
  218. DOBUTAMINE [Suspect]
     Active Substance: DOBUTAMINE HYDROCHLORIDE
     Dosage: UNK
     Route: 042
  219. DOBUTAMINE [Suspect]
     Active Substance: DOBUTAMINE HYDROCHLORIDE
     Dosage: UNK
     Route: 065
  220. DOBUTAMINE [Suspect]
     Active Substance: DOBUTAMINE HYDROCHLORIDE
     Dosage: UNK, QD
     Route: 065
  221. DOBUTAMINE [Suspect]
     Active Substance: DOBUTAMINE HYDROCHLORIDE
     Dosage: UNK
     Route: 065
  222. DOBUTAMINE [Suspect]
     Active Substance: DOBUTAMINE HYDROCHLORIDE
     Dosage: UNK
     Route: 065
  223. DOBUTAMINE [Suspect]
     Active Substance: DOBUTAMINE HYDROCHLORIDE
     Dosage: UNK
     Route: 065
  224. DOBUTAMINE [Suspect]
     Active Substance: DOBUTAMINE HYDROCHLORIDE
     Dosage: UNK
     Route: 065
  225. DOBUTAMINE [Suspect]
     Active Substance: DOBUTAMINE HYDROCHLORIDE
     Dosage: UNK
     Route: 065
  226. DOBUTAMINE [Suspect]
     Active Substance: DOBUTAMINE HYDROCHLORIDE
     Dosage: UNK
     Route: 065
  227. DOBUTAMINE [Suspect]
     Active Substance: DOBUTAMINE HYDROCHLORIDE
     Dosage: UNK
     Route: 065
  228. DOBUTAMINE [Suspect]
     Active Substance: DOBUTAMINE HYDROCHLORIDE
     Dosage: UNK
     Route: 065
  229. DOBUTAMINE [Suspect]
     Active Substance: DOBUTAMINE HYDROCHLORIDE
     Dosage: UNK
     Route: 065
  230. DOBUTAMINE [Suspect]
     Active Substance: DOBUTAMINE HYDROCHLORIDE
     Dosage: UNK
     Route: 065
  231. DOBUTAMINE [Suspect]
     Active Substance: DOBUTAMINE HYDROCHLORIDE
     Dosage: UNK
     Route: 065
  232. DOBUTAMINE [Suspect]
     Active Substance: DOBUTAMINE HYDROCHLORIDE
     Dosage: UNK
     Route: 065
  233. DOBUTAMINE [Suspect]
     Active Substance: DOBUTAMINE HYDROCHLORIDE
     Dosage: UNK
     Route: 065
  234. BREO ELLIPTA [Suspect]
     Active Substance: FLUTICASONE FUROATE\VILANTEROL TRIFENATATE
     Indication: Dyspnoea
     Dosage: 1 INTERNATIONAL UNIT
     Route: 048
  235. BREO ELLIPTA [Suspect]
     Active Substance: FLUTICASONE FUROATE\VILANTEROL TRIFENATATE
     Indication: Nutritional supplementation
     Dosage: UNK
  236. BREO ELLIPTA [Suspect]
     Active Substance: FLUTICASONE FUROATE\VILANTEROL TRIFENATATE
     Dosage: UNK
  237. BREO ELLIPTA [Suspect]
     Active Substance: FLUTICASONE FUROATE\VILANTEROL TRIFENATATE
     Dosage: UNK
  238. BREO ELLIPTA [Suspect]
     Active Substance: FLUTICASONE FUROATE\VILANTEROL TRIFENATATE
     Dosage: UNK
  239. BREO ELLIPTA [Suspect]
     Active Substance: FLUTICASONE FUROATE\VILANTEROL TRIFENATATE
     Dosage: UNK
  240. BREO ELLIPTA [Suspect]
     Active Substance: FLUTICASONE FUROATE\VILANTEROL TRIFENATATE
     Dosage: UNK
  241. BREO ELLIPTA [Suspect]
     Active Substance: FLUTICASONE FUROATE\VILANTEROL TRIFENATATE
     Dosage: UNK
  242. BREO ELLIPTA [Suspect]
     Active Substance: FLUTICASONE FUROATE\VILANTEROL TRIFENATATE
     Dosage: UNK
     Route: 058
  243. BREO ELLIPTA [Suspect]
     Active Substance: FLUTICASONE FUROATE\VILANTEROL TRIFENATATE
     Dosage: 1 INTERNATIONAL UNIT, 1 EVERY 1 DAY
     Route: 048
  244. BREO ELLIPTA [Suspect]
     Active Substance: FLUTICASONE FUROATE\VILANTEROL TRIFENATATE
     Dosage: 1 INTERNATIONAL UNIT, 1 EVERY 1 DAY
     Route: 065
  245. HEPARIN SODIUM AND SODIUM CHLORIDE [Suspect]
     Active Substance: HEPARIN SODIUM
     Indication: Anticoagulant therapy
     Dosage: 250 MILLILITER, PRN (FORMULATION: SOLUTION INTRAVENOUS)
     Route: 042
  246. HEPARIN SODIUM AND SODIUM CHLORIDE [Suspect]
     Active Substance: HEPARIN SODIUM
     Dosage: 50 MILLILITER, PRN
     Route: 042
  247. HEPARIN SODIUM AND SODIUM CHLORIDE [Suspect]
     Active Substance: HEPARIN SODIUM
     Dosage: 250 MILLILITER
     Route: 042
  248. HEPARIN SODIUM AND SODIUM CHLORIDE [Suspect]
     Active Substance: HEPARIN SODIUM
     Indication: Anticoagulant therapy
     Dosage: 50 MILLILITER, PRN
     Route: 042
  249. HEPARIN SODIUM AND SODIUM CHLORIDE [Suspect]
     Active Substance: HEPARIN SODIUM
     Dosage: 250.0 MILLILITER, PRN
     Route: 042
  250. HEPARIN SODIUM AND SODIUM CHLORIDE [Suspect]
     Active Substance: HEPARIN SODIUM
     Dosage: 250 MILLILITER
     Route: 042
  251. HEPARIN SODIUM AND SODIUM CHLORIDE [Suspect]
     Active Substance: HEPARIN SODIUM
     Dosage: 50 MILLILITER, PRN
     Route: 042
  252. HYDROMORPHONE [Suspect]
     Active Substance: HYDROMORPHONE
     Indication: Analgesic therapy
     Dosage: 1 MILLIGRAM, 1 EVER 4 HOURS
     Route: 058
  253. HYDROMORPHONE [Suspect]
     Active Substance: HYDROMORPHONE
     Indication: Off label use
     Dosage: 6 MILLIGRAM, 1 EVERY 6 HOURS
     Route: 058
  254. HYDROMORPHONE [Suspect]
     Active Substance: HYDROMORPHONE
     Indication: Intentional product misuse
     Dosage: 24 MILLIGRAM
     Route: 058
  255. HYDROMORPHONE [Suspect]
     Active Substance: HYDROMORPHONE
     Dosage: 24 MILLIGRAM, QID
     Route: 058
  256. HYDROMORPHONE [Suspect]
     Active Substance: HYDROMORPHONE
     Dosage: 1 MILLIGRAM
     Route: 058
  257. HYDROMORPHONE [Suspect]
     Active Substance: HYDROMORPHONE
     Dosage: 1 MILLIGRAM, QD
     Route: 058
  258. HYDROMORPHONE [Suspect]
     Active Substance: HYDROMORPHONE
     Dosage: 17 MILLIGRAM, OD
     Route: 065
  259. HYDROMORPHONE [Suspect]
     Active Substance: HYDROMORPHONE
     Dosage: UNK
     Route: 065
  260. HYDROMORPHONE [Suspect]
     Active Substance: HYDROMORPHONE
     Dosage: 96 MILLIGRAM, OD
     Route: 065
  261. HYDROMORPHONE [Suspect]
     Active Substance: HYDROMORPHONE
     Dosage: 6 MILLIGRAM, 1 EVERY 4 HOURS
     Route: 058
  262. HYDROMORPHONE [Suspect]
     Active Substance: HYDROMORPHONE
     Dosage: 6 MILLIGRAM, 1 EVERY 1 DAY
     Route: 058
  263. INSULIN ASPART [Suspect]
     Active Substance: INSULIN ASPART
     Indication: Diabetes mellitus
     Dosage: UNK
     Route: 058
  264. INSULIN ASPART [Suspect]
     Active Substance: INSULIN ASPART
     Dosage: UNK
     Route: 065
  265. INSULIN ASPART [Suspect]
     Active Substance: INSULIN ASPART
     Dosage: UNK
     Route: 048
  266. INSULIN ASPART [Suspect]
     Active Substance: INSULIN ASPART
     Dosage: UNK
     Route: 058
  267. INSULIN ASPART [Suspect]
     Active Substance: INSULIN ASPART
     Dosage: UNK
     Route: 058
  268. INSULIN ASPART [Suspect]
     Active Substance: INSULIN ASPART
     Dosage: UNK
     Route: 065
  269. INSULIN ASPART [Suspect]
     Active Substance: INSULIN ASPART
     Dosage: UNK
     Route: 065
  270. INSULIN ASPART [Suspect]
     Active Substance: INSULIN ASPART
     Dosage: UNK
     Route: 048
  271. INSULIN DEGLUDEC [Suspect]
     Active Substance: INSULIN DEGLUDEC
     Indication: Diabetes mellitus
     Dosage: UNK, 1 EVERY 1 DAYS
     Route: 058
  272. INSULIN DEGLUDEC [Suspect]
     Active Substance: INSULIN DEGLUDEC
     Dosage: UNK
     Route: 058
  273. INSULIN DEGLUDEC [Suspect]
     Active Substance: INSULIN DEGLUDEC
     Dosage: UNK
     Route: 065
  274. INSULIN DEGLUDEC [Suspect]
     Active Substance: INSULIN DEGLUDEC
     Dosage: UNK
     Route: 065
  275. INSULIN DEGLUDEC [Suspect]
     Active Substance: INSULIN DEGLUDEC
     Dosage: UNK
     Route: 065
  276. INSULIN DEGLUDEC [Suspect]
     Active Substance: INSULIN DEGLUDEC
     Dosage: 1 DOSAGE FORM, QD (FORMULATION: INJECTION)
     Route: 058
  277. INSULIN DEGLUDEC [Suspect]
     Active Substance: INSULIN DEGLUDEC
     Dosage: UNK
     Route: 065
  278. INSULIN DEGLUDEC [Suspect]
     Active Substance: INSULIN DEGLUDEC
     Dosage: UNK
     Route: 058
  279. IPRATROPIUM [Suspect]
     Active Substance: IPRATROPIUM
     Indication: Dyspnoea
     Dosage: UNK (1 EVERY 6 HOURS)
  280. IPRATROPIUM [Suspect]
     Active Substance: IPRATROPIUM
     Indication: Sleep disorder therapy
     Dosage: UNK, (1 EVERY 1 DAYS
     Route: 050
  281. IPRATROPIUM [Suspect]
     Active Substance: IPRATROPIUM
     Indication: Intentional product misuse
     Dosage: UNK, (1 EVERY 1 DAYS)
     Route: 050
  282. IPRATROPIUM [Suspect]
     Active Substance: IPRATROPIUM
     Dosage: UNK, 1 EVERY 1 DAY
     Route: 065
  283. IPRATROPIUM [Suspect]
     Active Substance: IPRATROPIUM
     Dosage: 1 DOSAGE FORM, OD
  284. IPRATROPIUM [Suspect]
     Active Substance: IPRATROPIUM
     Dosage: UNK, (4 EVERY 1 DAYS)
     Route: 045
  285. IPRATROPIUM [Suspect]
     Active Substance: IPRATROPIUM
     Dosage: UNK (1 EVERY 6 HOURS)
     Route: 045
  286. IPRATROPIUM [Suspect]
     Active Substance: IPRATROPIUM
     Dosage: UNK, QD
     Route: 045
  287. IPRATROPIUM [Suspect]
     Active Substance: IPRATROPIUM
     Dosage: UNK
     Route: 065
  288. IPRATROPIUM [Suspect]
     Active Substance: IPRATROPIUM
     Dosage: UNK, (1 EVERY 1 DAYS)
     Route: 065
  289. IPRATROPIUM [Suspect]
     Active Substance: IPRATROPIUM
     Dosage: UNK, (1 EVERY 1 DAYS)
  290. IPRATROPIUM [Suspect]
     Active Substance: IPRATROPIUM
     Dosage: UNK
     Route: 065
  291. IPRATROPIUM [Suspect]
     Active Substance: IPRATROPIUM
     Dosage: UNK
     Route: 048
  292. IPRATROPIUM [Suspect]
     Active Substance: IPRATROPIUM
     Dosage: 1 DOSAGE FORM, 1 EVERY 4 DAYS
  293. IPRATROPIUM [Suspect]
     Active Substance: IPRATROPIUM
     Dosage: 1 DOSAGE FORM, 1 EVERY 6 HOURS
  294. IPRATROPIUM [Suspect]
     Active Substance: IPRATROPIUM
     Dosage: UNK, 1 EVERY 1 DAY
     Route: 065
  295. IPRATROPIUM [Suspect]
     Active Substance: IPRATROPIUM
     Dosage: UNK, 4 EVERY 1 DAY
     Route: 065
  296. IPRATROPIUM [Suspect]
     Active Substance: IPRATROPIUM
     Dosage: UNK, 1 EVERY 1 DAY
     Route: 065
  297. IPRATROPIUM [Suspect]
     Active Substance: IPRATROPIUM
     Dosage: UNK, 4 EVERY 1 DAY
     Route: 065
  298. IPRATROPIUM [Suspect]
     Active Substance: IPRATROPIUM
     Dosage: UNK, 4 EVERY 1 DAY
     Route: 065
  299. IPRATROPIUM [Suspect]
     Active Substance: IPRATROPIUM
     Dosage: UNK, 1 EVERY 1 DAY
     Route: 065
  300. IPRATROPIUM [Suspect]
     Active Substance: IPRATROPIUM
     Dosage: UNK, 1 EVERY 1 DAY
     Route: 065
  301. IPRATROPIUM [Suspect]
     Active Substance: IPRATROPIUM
     Dosage: UNK, 3 EVERY 1 DAY
     Route: 065
  302. IPRATROPIUM [Suspect]
     Active Substance: IPRATROPIUM
     Dosage: 1 DOSAGE FORM, 1 EVERY 1 DAYS
     Route: 065
  303. IPRATROPIUM [Suspect]
     Active Substance: IPRATROPIUM
     Dosage: UNK
  304. IPRATROPIUM [Suspect]
     Active Substance: IPRATROPIUM
     Dosage: UNK
     Route: 050
  305. IPRATROPIUM [Suspect]
     Active Substance: IPRATROPIUM
     Dosage: 1 DOSAGE FORM, 1 EVERY 1 DAYS
  306. LANSOPRAZOLE [Suspect]
     Active Substance: LANSOPRAZOLE
     Indication: Antacid therapy
     Dosage: 30 MILLIGRAM, 1 EVERY 1 DAYS
     Route: 048
  307. LANSOPRAZOLE [Suspect]
     Active Substance: LANSOPRAZOLE
     Indication: Off label use
     Dosage: 30 MILLIGRAM, 1 EVERY 1 DAYS
     Route: 048
  308. LANSOPRAZOLE [Suspect]
     Active Substance: LANSOPRAZOLE
     Indication: Intentional product misuse
     Dosage: 30 MILLIGRAM, OD
     Route: 048
  309. LANSOPRAZOLE [Suspect]
     Active Substance: LANSOPRAZOLE
     Dosage: 30 MILLIGRAM, OD
     Route: 048
  310. LANSOPRAZOLE [Suspect]
     Active Substance: LANSOPRAZOLE
     Dosage: 30 MILLIGRAM, OD
     Route: 048
  311. LANSOPRAZOLE [Suspect]
     Active Substance: LANSOPRAZOLE
     Dosage: 30 MILLIGRAM, OD
     Route: 048
  312. LANSOPRAZOLE [Suspect]
     Active Substance: LANSOPRAZOLE
     Dosage: UNK
     Route: 065
  313. LANSOPRAZOLE [Suspect]
     Active Substance: LANSOPRAZOLE
     Dosage: UNK
     Route: 065
  314. POLYETHYLENE GLYCOL 3350 [Suspect]
     Active Substance: POLYETHYLENE GLYCOL 3350
     Indication: Constipation
     Dosage: 17 GRAM, 1 EVERY 1 DAYS
     Route: 048
  315. POLYETHYLENE GLYCOL 3350 [Suspect]
     Active Substance: POLYETHYLENE GLYCOL 3350
     Indication: Off label use
     Dosage: 17 GRAM, OD
     Route: 048
  316. POLYETHYLENE GLYCOL 3350 [Suspect]
     Active Substance: POLYETHYLENE GLYCOL 3350
     Dosage: 17 MILLIGRAM, 1 EVERY 1 DAYS
     Route: 048
  317. POLYETHYLENE GLYCOL 3350 [Suspect]
     Active Substance: POLYETHYLENE GLYCOL 3350
     Dosage: 17 MILLIGRAM
     Route: 048
  318. POLYETHYLENE GLYCOL 3350 [Suspect]
     Active Substance: POLYETHYLENE GLYCOL 3350
     Dosage: UNK
     Route: 048
  319. POLYETHYLENE GLYCOL 3350 [Suspect]
     Active Substance: POLYETHYLENE GLYCOL 3350
     Dosage: 17 MILLIGRAM, 1 EVERY 1 DAYS
     Route: 048
  320. POLYETHYLENE GLYCOL 3350 [Suspect]
     Active Substance: POLYETHYLENE GLYCOL 3350
     Dosage: UNK
     Route: 065
  321. POLYETHYLENE GLYCOL 3350 [Suspect]
     Active Substance: POLYETHYLENE GLYCOL 3350
     Dosage: 3 MILLIGRAM, QW
     Route: 065
  322. POLYETHYLENE GLYCOL 3350 [Suspect]
     Active Substance: POLYETHYLENE GLYCOL 3350
     Dosage: 3 MILLIGRAM, QW
     Route: 048
  323. SIMVASTATIN [Suspect]
     Active Substance: SIMVASTATIN
     Indication: Vitamin supplementation
     Dosage: 40 MILLIGRAM, OD
     Route: 048
  324. SIMVASTATIN [Suspect]
     Active Substance: SIMVASTATIN
     Indication: Blood cholesterol increased
  325. POLYETHYLENE GLYCOL 3350\POTASSIUM CHLORIDE\SODIUM BICARBONATE\SODIUM [Suspect]
     Active Substance: POLYETHYLENE GLYCOL 3350\POTASSIUM CHLORIDE\SODIUM BICARBONATE\SODIUM CHLORIDE\SODIUM SULFATE
     Indication: Constipation
     Dosage: 17 GRAM, 1 EVERY 1 DAYS
     Route: 048
  326. POLYETHYLENE GLYCOL 3350\POTASSIUM CHLORIDE\SODIUM BICARBONATE\SODIUM [Suspect]
     Active Substance: POLYETHYLENE GLYCOL 3350\POTASSIUM CHLORIDE\SODIUM BICARBONATE\SODIUM CHLORIDE\SODIUM SULFATE
     Dosage: UNK
     Route: 065
  327. MELATONIN [Suspect]
     Active Substance: MELATONIN
     Indication: Sleep disorder therapy
     Dosage: 3 MILLIGRAM, OD
     Route: 048
  328. MELATONIN [Suspect]
     Active Substance: MELATONIN
     Indication: Intentional product misuse
     Dosage: UNK
     Route: 048
  329. MELATONIN [Suspect]
     Active Substance: MELATONIN
     Indication: Off label use
     Dosage: 3 MILLIGRAM
     Route: 048
  330. MELATONIN [Suspect]
     Active Substance: MELATONIN
     Dosage: 3 MILLIGRAM, OD
     Route: 048
  331. MELATONIN [Suspect]
     Active Substance: MELATONIN
     Dosage: UNK
     Route: 065
  332. MELATONIN [Suspect]
     Active Substance: MELATONIN
     Dosage: UNK
     Route: 065
  333. METRONIDAZOLE [Suspect]
     Active Substance: METRONIDAZOLE
     Indication: Bacterial infection
     Dosage: 500 MILLIGRAM, 1 EVERY 8 HOURS
     Route: 048
  334. METRONIDAZOLE [Suspect]
     Active Substance: METRONIDAZOLE
     Indication: Off label use
     Dosage: 500 MILLIGRAM, 1 EVERY 8 HOURS
     Route: 048
  335. METRONIDAZOLE [Suspect]
     Active Substance: METRONIDAZOLE
     Indication: Intentional product misuse
     Dosage: 500 MILLIGRAM, OD
     Route: 048
  336. METRONIDAZOLE [Suspect]
     Active Substance: METRONIDAZOLE
     Dosage: 1500 MILLIGRAM, OD
     Route: 048
  337. METRONIDAZOLE [Suspect]
     Active Substance: METRONIDAZOLE
     Dosage: UNK
     Route: 065
  338. METRONIDAZOLE [Suspect]
     Active Substance: METRONIDAZOLE
     Dosage: UNK
     Route: 065
  339. NOREPINEPHRINE [Suspect]
     Active Substance: NOREPINEPHRINE\NOREPINEPHRINE BITARTRATE
     Indication: Stress
     Dosage: UNK
     Route: 042
  340. NOREPINEPHRINE [Suspect]
     Active Substance: NOREPINEPHRINE\NOREPINEPHRINE BITARTRATE
     Indication: Off label use
     Dosage: 1 DOSAGE FORM, OD
     Route: 048
  341. NOREPINEPHRINE [Suspect]
     Active Substance: NOREPINEPHRINE\NOREPINEPHRINE BITARTRATE
     Dosage: UNK
     Route: 065
  342. NOREPINEPHRINE [Suspect]
     Active Substance: NOREPINEPHRINE\NOREPINEPHRINE BITARTRATE
     Dosage: UNK
     Route: 065
  343. NOREPINEPHRINE [Suspect]
     Active Substance: NOREPINEPHRINE\NOREPINEPHRINE BITARTRATE
     Dosage: UNK
     Route: 065
  344. NOREPINEPHRINE [Suspect]
     Active Substance: NOREPINEPHRINE\NOREPINEPHRINE BITARTRATE
     Dosage: UNK
     Route: 065
  345. NOREPINEPHRINE [Suspect]
     Active Substance: NOREPINEPHRINE\NOREPINEPHRINE BITARTRATE
     Dosage: UNK
     Route: 065
  346. NOREPINEPHRINE [Suspect]
     Active Substance: NOREPINEPHRINE\NOREPINEPHRINE BITARTRATE
     Dosage: UNK (FORMULATION NOT SPECIFIED)
     Route: 042
  347. NOREPINEPHRINE [Suspect]
     Active Substance: NOREPINEPHRINE\NOREPINEPHRINE BITARTRATE
     Dosage: 1 DOSAGE FORM, OD
     Route: 048
  348. NOREPINEPHRINE [Suspect]
     Active Substance: NOREPINEPHRINE\NOREPINEPHRINE BITARTRATE
     Dosage: 300 MILLIGRAM, QD
     Route: 048
  349. NOREPINEPHRINE [Suspect]
     Active Substance: NOREPINEPHRINE\NOREPINEPHRINE BITARTRATE
     Dosage: 1 DOSAGE FORM, OD
     Route: 065
  350. NOREPINEPHRINE [Suspect]
     Active Substance: NOREPINEPHRINE\NOREPINEPHRINE BITARTRATE
     Dosage: 1 MILLIGRAM
     Route: 048
  351. NOREPINEPHRINE [Suspect]
     Active Substance: NOREPINEPHRINE\NOREPINEPHRINE BITARTRATE
     Dosage: UNK
     Route: 048
  352. NOREPINEPHRINE [Suspect]
     Active Substance: NOREPINEPHRINE\NOREPINEPHRINE BITARTRATE
     Dosage: UNK
     Route: 042
  353. ONDANSETRON [Suspect]
     Active Substance: ONDANSETRON
     Indication: Vomiting
     Dosage: 4 MILLIGRAM, 1 EVERY 8 HOURS
     Route: 042
  354. ONDANSETRON [Suspect]
     Active Substance: ONDANSETRON
     Indication: Nausea
     Dosage: 40 MILLIGRAM, 1 EVERY 8 HOURS
     Route: 042
  355. ONDANSETRON [Suspect]
     Active Substance: ONDANSETRON
     Indication: Off label use
     Dosage: 12 MILLIGRAM, 1 EVERY 8 HOURS
     Route: 042
  356. ONDANSETRON [Suspect]
     Active Substance: ONDANSETRON
     Dosage: 4 MILLIGRAM, OD
     Route: 042
  357. ONDANSETRON [Suspect]
     Active Substance: ONDANSETRON
     Dosage: 36 MILLIGRAM, 1 EVERY 8 HOURS
     Route: 042
  358. ONDANSETRON [Suspect]
     Active Substance: ONDANSETRON
     Dosage: 36 MILLIGRAM, 1 EVERY 8 HOURS
     Route: 042
  359. ONDANSETRON [Suspect]
     Active Substance: ONDANSETRON
     Dosage: 24 MILLIGRAM, 1 EVERY 8 HOURS
     Route: 042
  360. ONDANSETRON [Suspect]
     Active Substance: ONDANSETRON
     Dosage: 1 DOSAGE FORM
     Route: 065
  361. ONDANSETRON [Suspect]
     Active Substance: ONDANSETRON
     Dosage: 41.14 MILLIGRAM
     Route: 042
  362. ONDANSETRON [Suspect]
     Active Substance: ONDANSETRON
     Dosage: 12 MILLIGRAM, 1 EVERY 8 HOURS
     Route: 042
  363. ONDANSETRON [Suspect]
     Active Substance: ONDANSETRON
     Dosage: 4 MILLIGRAM, OD
     Route: 042
  364. ONDANSETRON [Suspect]
     Active Substance: ONDANSETRON
     Dosage: 8 MILLIGRAM, 1 EVERY 8 HOURS
     Route: 042
  365. ONDANSETRON [Suspect]
     Active Substance: ONDANSETRON
     Dosage: 40 MILLIGRAM, 1 EVERY 8 HOURS
     Route: 042
  366. ONDANSETRON [Suspect]
     Active Substance: ONDANSETRON
     Dosage: UNK
     Route: 065
  367. ONDANSETRON [Suspect]
     Active Substance: ONDANSETRON
     Dosage: UNK
     Route: 042
  368. ONDANSETRON [Suspect]
     Active Substance: ONDANSETRON
     Dosage: 60 MILLIGRAM, OD
     Route: 042
  369. ONDANSETRON [Suspect]
     Active Substance: ONDANSETRON
     Dosage: 41.14 MILLIGRAM, 1 EVERY 8 HOUR
     Route: 065
  370. ONDANSETRON [Suspect]
     Active Substance: ONDANSETRON
     Dosage: 12 MILLIGRAM, QD
     Route: 065
  371. ONDANSETRON [Suspect]
     Active Substance: ONDANSETRON
     Dosage: 1 DOSAGE FORM, QD
     Route: 065
  372. ONDANSETRON [Suspect]
     Active Substance: ONDANSETRON
     Dosage: 41.14 MILLIGRAM, 1 EVERY 8 HOUR
     Route: 065
  373. ONDANSETRON [Suspect]
     Active Substance: ONDANSETRON
     Dosage: 12 MILLIGRAM, 1 EVERY 8 HOURS
     Route: 065
  374. ONDANSETRON [Suspect]
     Active Substance: ONDANSETRON
     Dosage: UNK
     Route: 042
  375. ONDANSETRON [Suspect]
     Active Substance: ONDANSETRON
     Dosage: 12 MILLIGRAM, TID, 3 EVERY 1 DAYS
     Route: 065
  376. ONDANSETRON [Suspect]
     Active Substance: ONDANSETRON
     Dosage: 12 MILLIGRAM, 1 EVERY 8 HOURS
     Route: 065
  377. ONDANSETRON [Suspect]
     Active Substance: ONDANSETRON
     Dosage: 24.0 MILLIGRAM 1 EVERY 8 HOURS
     Route: 065
  378. ONDANSETRON [Suspect]
     Active Substance: ONDANSETRON
     Dosage: 12 MILLIGRAM, 1 EVERY 8 HOURS
     Route: 065
  379. ONDANSETRON [Suspect]
     Active Substance: ONDANSETRON
     Dosage: 24.0 MILLIGRAM 1 EVERY 8 HOURS
     Route: 065
  380. ONDANSETRON [Suspect]
     Active Substance: ONDANSETRON
     Dosage: 4 MILLIGRAM, OD
     Route: 042
  381. ONDANSETRON [Suspect]
     Active Substance: ONDANSETRON
     Dosage: 1 DOSAGE FORM, 1 EVERY 6 HOURS
     Route: 065
  382. ONDANSETRON [Suspect]
     Active Substance: ONDANSETRON
     Dosage: 1 DOSAGE FORM
     Route: 042
  383. ONDANSETRON [Suspect]
     Active Substance: ONDANSETRON
     Dosage: 1 DOSAGE FORM, 1 EVERY 1 DAYS
     Route: 048
  384. ONDANSETRON [Suspect]
     Active Substance: ONDANSETRON
     Dosage: 14.14 MILLIGRAM, 1 EVERY 8 HOURS
     Route: 042
  385. ONDANSETRON [Suspect]
     Active Substance: ONDANSETRON
     Dosage: 1 DOSAGE FORM, 1 EVERY 8 HOURS
     Route: 065
  386. ONDANSETRON [Suspect]
     Active Substance: ONDANSETRON
     Dosage: 12 MILLIGRAM, 1 EVERY 1 DAYS
     Route: 042
  387. ONDANSETRON [Suspect]
     Active Substance: ONDANSETRON
     Dosage: 12 MILLIGRAM
     Route: 042
  388. ONDANSETRON [Suspect]
     Active Substance: ONDANSETRON
     Dosage: 4 MILLIGRAM
     Route: 042
  389. ONDANSETRON [Suspect]
     Active Substance: ONDANSETRON
     Dosage: 1 DOSAGE FORM
     Route: 042
  390. ONDANSETRON [Suspect]
     Active Substance: ONDANSETRON
     Dosage: 40 MILLIGRAM,1 EVERY 1 DAYS
     Route: 065
  391. ONDANSETRON [Suspect]
     Active Substance: ONDANSETRON
     Dosage: 36 MILLIGRAM,1 EVERY 1 DAYS
     Route: 042
  392. ONDANSETRON [Suspect]
     Active Substance: ONDANSETRON
     Dosage: 14.14 MILLIGRAM
     Route: 042
  393. ONDANSETRON [Suspect]
     Active Substance: ONDANSETRON
     Dosage: 24 MILLIGRAM,3 EVERY 1 DAYS
     Route: 065
  394. ONDANSETRON [Suspect]
     Active Substance: ONDANSETRON
     Dosage: 108 MILLIGRAM,3 EVERY 1 DAYS
     Route: 065
  395. ONDANSETRON [Suspect]
     Active Substance: ONDANSETRON
     Dosage: 108 MILLIGRAM,3 EVERY 1 DAYS
     Route: 065
  396. ONDANSETRON [Suspect]
     Active Substance: ONDANSETRON
     Dosage: 1 DOSAGE FORM, 1 EVERY 1 DAYS
     Route: 065
  397. ONDANSETRON [Suspect]
     Active Substance: ONDANSETRON
     Dosage: 120 MILLIGRAM, 3 EVERY 1 DAYS
     Route: 065
  398. ONDANSETRON [Suspect]
     Active Substance: ONDANSETRON
     Dosage: 1 DOSAGE FORM, 1 EVERY 6 HOUR
     Route: 042
  399. ONDANSETRON [Suspect]
     Active Substance: ONDANSETRON
     Dosage: 4 MILLIGRAM, 3 EVERY 1 DAYS
     Route: 042
  400. ONDANSETRON [Suspect]
     Active Substance: ONDANSETRON
     Dosage: 41.14 MILLIGRAM
     Route: 042
  401. ONDANSETRON [Suspect]
     Active Substance: ONDANSETRON
     Dosage: 41.14 MILLIGRAM
     Route: 042
  402. ONDANSETRON [Suspect]
     Active Substance: ONDANSETRON
     Dosage: UNK
     Route: 042
  403. PHYTONADIONE [Suspect]
     Active Substance: PHYTONADIONE
     Indication: Vitamin supplementation
     Dosage: 5 MILLIGRAM, PRN
     Route: 042
  404. PHYTONADIONE [Suspect]
     Active Substance: PHYTONADIONE
     Dosage: 5 MILLIGRAM
     Route: 017
  405. PHYTONADIONE [Suspect]
     Active Substance: PHYTONADIONE
     Dosage: 5 MILLIGRAM, OD
     Route: 017
  406. PHYTONADIONE [Suspect]
     Active Substance: PHYTONADIONE
     Dosage: 5 MILLIGRAM, OD
     Route: 042
  407. PHYTONADIONE [Suspect]
     Active Substance: PHYTONADIONE
     Dosage: 5 MILLIGRAM
     Route: 042
  408. PYRIDOXINE HYDROCHLORIDE [Suspect]
     Active Substance: PYRIDOXINE HYDROCHLORIDE
     Indication: Vitamin supplementation
     Dosage: UNK, 4 EVERY 1 DAY
     Route: 048
  409. PYRIDOXINE HYDROCHLORIDE [Suspect]
     Active Substance: PYRIDOXINE HYDROCHLORIDE
     Indication: Constipation
     Dosage: 10 MILLIGRAM
     Route: 048
  410. PYRIDOXINE HYDROCHLORIDE [Suspect]
     Active Substance: PYRIDOXINE HYDROCHLORIDE
     Indication: Analgesic therapy
     Dosage: UNK
     Route: 048
  411. PYRIDOXINE HYDROCHLORIDE [Suspect]
     Active Substance: PYRIDOXINE HYDROCHLORIDE
     Dosage: UNK, 1 EVERY 1 DAYS
     Route: 048
  412. PYRIDOXINE HYDROCHLORIDE [Suspect]
     Active Substance: PYRIDOXINE HYDROCHLORIDE
     Dosage: UNK
     Route: 065
  413. PYRIDOXINE HYDROCHLORIDE [Suspect]
     Active Substance: PYRIDOXINE HYDROCHLORIDE
     Dosage: UNK
     Route: 048
  414. PYRIDOXINE HYDROCHLORIDE [Suspect]
     Active Substance: PYRIDOXINE HYDROCHLORIDE
     Dosage: UNK
     Route: 048
  415. PYRIDOXINE HYDROCHLORIDE [Suspect]
     Active Substance: PYRIDOXINE HYDROCHLORIDE
     Dosage: UNK, 4 EVERY 1 DAYS
     Route: 048
  416. PYRIDOXINE HYDROCHLORIDE [Suspect]
     Active Substance: PYRIDOXINE HYDROCHLORIDE
     Dosage: UNK
     Route: 065
  417. PYRIDOXINE HYDROCHLORIDE [Suspect]
     Active Substance: PYRIDOXINE HYDROCHLORIDE
     Dosage: UNK
     Route: 048
  418. PYRIDOXINE HYDROCHLORIDE [Suspect]
     Active Substance: PYRIDOXINE HYDROCHLORIDE
     Dosage: UNK
     Route: 048
  419. PYRIDOXINE HYDROCHLORIDE [Suspect]
     Active Substance: PYRIDOXINE HYDROCHLORIDE
     Dosage: UNK
     Route: 065
  420. PYRIDOXINE HYDROCHLORIDE [Suspect]
     Active Substance: PYRIDOXINE HYDROCHLORIDE
     Dosage: 10 MILLIGRAM, 4 EVERY 1 DAYS
     Route: 048
  421. PYRIDOXINE HYDROCHLORIDE [Suspect]
     Active Substance: PYRIDOXINE HYDROCHLORIDE
     Dosage: 1.0 IU/KG, 1 EVERY 1 DAYS
     Route: 048
  422. PYRIDOXINE HYDROCHLORIDE [Suspect]
     Active Substance: PYRIDOXINE HYDROCHLORIDE
     Dosage: 10 MILLIGRAM
     Route: 048
  423. PYRIDOXINE HYDROCHLORIDE [Suspect]
     Active Substance: PYRIDOXINE HYDROCHLORIDE
     Dosage: 4 IU INTERNATIONAL UNIT(S)
     Route: 048
  424. PYRIDOXINE HYDROCHLORIDE [Suspect]
     Active Substance: PYRIDOXINE HYDROCHLORIDE
     Dosage: 10 MILLIGRAM
     Route: 048
  425. PYRIDOXINE HYDROCHLORIDE [Suspect]
     Active Substance: PYRIDOXINE HYDROCHLORIDE
     Dosage: UNK, 1 EVERY 1 DAYS
     Route: 048
  426. PYRIDOXINE HYDROCHLORIDE [Suspect]
     Active Substance: PYRIDOXINE HYDROCHLORIDE
     Dosage: 1 IU INTERNATIONAL UNIT(S)
     Route: 048
  427. ALBUTEROL [Suspect]
     Active Substance: ALBUTEROL
     Indication: Chronic obstructive pulmonary disease
     Dosage: UNK UNK, QID
  428. ALBUTEROL [Suspect]
     Active Substance: ALBUTEROL
     Indication: Off label use
     Dosage: UNK, 1 EVERY 1 DAYS
     Route: 065
  429. ALBUTEROL [Suspect]
     Active Substance: ALBUTEROL
     Indication: Intentional product misuse
     Dosage: UNK,  1 EVERY 6 HOURS
     Route: 048
  430. ALBUTEROL [Suspect]
     Active Substance: ALBUTEROL
     Dosage: UNK, 4 EVERY 1 DAYS
     Route: 065
  431. ALBUTEROL [Suspect]
     Active Substance: ALBUTEROL
     Dosage: UNK, 1 EVERY 6 HOURS
     Route: 050
  432. ALBUTEROL [Suspect]
     Active Substance: ALBUTEROL
     Dosage: 1 DOSAGE FORM, QID, 4 EVERY 1 DAYS
     Route: 050
  433. ALBUTEROL [Suspect]
     Active Substance: ALBUTEROL
     Dosage: UNK, BID, 4 EVERY 1 DAYS
     Route: 050
  434. ALBUTEROL [Suspect]
     Active Substance: ALBUTEROL
     Dosage: UNK
     Route: 065
  435. ALBUTEROL [Suspect]
     Active Substance: ALBUTEROL
     Dosage: 1 DOSAGE FORM, QID
  436. ALBUTEROL [Suspect]
     Active Substance: ALBUTEROL
     Dosage: 1 DOSAGE FORM, QID
  437. ALBUTEROL [Suspect]
     Active Substance: ALBUTEROL
     Dosage: UNK, 4 EVERY 1 DAYS
     Route: 045
  438. ALBUTEROL [Suspect]
     Active Substance: ALBUTEROL
     Dosage: 4 DOSAGE FORM
  439. ALBUTEROL [Suspect]
     Active Substance: ALBUTEROL
     Dosage: 1 DOSAGE FORM 1 EVERY 6 HOURS
  440. ALBUTEROL [Suspect]
     Active Substance: ALBUTEROL
     Dosage: UNK, 1 EVERY 6 HOURS
  441. ALBUTEROL [Suspect]
     Active Substance: ALBUTEROL
     Dosage: 4 DOSAGE FORM, OD
  442. ALBUTEROL [Suspect]
     Active Substance: ALBUTEROL
     Dosage: UNK, QID (1 EVERY 6 HOURS)
     Route: 050
  443. ALBUTEROL [Suspect]
     Active Substance: ALBUTEROL
     Dosage: UNK, 1 EVERY 1 DAYS
     Route: 065
  444. ALBUTEROL [Suspect]
     Active Substance: ALBUTEROL
     Dosage: UNK, 1 EVERY 1 DAYS
     Route: 065
  445. ALBUTEROL [Suspect]
     Active Substance: ALBUTEROL
     Dosage: UNK, 4 EVERY 1 DAYS
     Route: 065
  446. ALBUTEROL [Suspect]
     Active Substance: ALBUTEROL
     Dosage: UNK, 1 EVERY 1 DAYS
     Route: 065
  447. ALBUTEROL [Suspect]
     Active Substance: ALBUTEROL
     Dosage: UNK, 4 EVERY 1 DAYS
     Route: 065
  448. ALBUTEROL [Suspect]
     Active Substance: ALBUTEROL
     Dosage: UNK, 1 EVERY 1 DAYS
     Route: 065
  449. ALBUTEROL [Suspect]
     Active Substance: ALBUTEROL
     Dosage: UNK, 4 EVERY 1 DAYS
     Route: 065
  450. ALBUTEROL [Suspect]
     Active Substance: ALBUTEROL
     Dosage: UNK, 4 EVERY 1 DAYS
     Route: 065
  451. SIMVASTATIN [Suspect]
     Active Substance: SIMVASTATIN
     Indication: Off label use
     Dosage: 40 MILLIGRAM, 1 EVERY 1 DAYS
     Route: 048
  452. SIMVASTATIN [Suspect]
     Active Substance: SIMVASTATIN
     Indication: Vitamin supplementation
     Dosage: UNK
     Route: 065
  453. SIMVASTATIN [Suspect]
     Active Substance: SIMVASTATIN
     Indication: Blood cholesterol increased
     Dosage: UNK
     Route: 065
  454. SIMVASTATIN [Suspect]
     Active Substance: SIMVASTATIN
     Indication: Intentional product misuse
     Dosage: UNK
     Route: 065
  455. SIMVASTATIN [Suspect]
     Active Substance: SIMVASTATIN
     Dosage: UNK (FORMULATION: FILM-COATED TABLET)
     Route: 048
  456. SIMVASTATIN [Suspect]
     Active Substance: SIMVASTATIN
     Dosage: 40 MILLIGRAM, 1 EVERY 1 DAYS
     Route: 048
  457. SIMVASTATIN [Suspect]
     Active Substance: SIMVASTATIN
     Dosage: 40 MILLIGRAM
     Route: 048
  458. SIMVASTATIN [Suspect]
     Active Substance: SIMVASTATIN
     Dosage: 40 MILLIGRAM
     Route: 048
  459. SIMVASTATIN [Suspect]
     Active Substance: SIMVASTATIN
     Dosage: UNK
     Route: 048
  460. SIMVASTATIN [Suspect]
     Active Substance: SIMVASTATIN
     Dosage: UNK
     Route: 048
  461. SODIUM FERRIC GLUCONATE COMPLEX [Suspect]
     Active Substance: SODIUM FERRIC GLUCONATE COMPLEX
     Indication: Iron deficiency
     Dosage: 125 MILLIGRAM, 1 EVERY 4 WEEKS
     Route: 042
  462. SODIUM FERRIC GLUCONATE COMPLEX [Suspect]
     Active Substance: SODIUM FERRIC GLUCONATE COMPLEX
     Dosage: 4.64 MILLIGRAM, 1 EVERY 4 WEEKS
     Route: 042
  463. SODIUM FERRIC GLUCONATE COMPLEX [Suspect]
     Active Substance: SODIUM FERRIC GLUCONATE COMPLEX
     Dosage: 1.25 MILLIGRAM, 1 EVERY 4 WEEKS
     Route: 042
  464. SODIUM FERRIC GLUCONATE COMPLEX [Suspect]
     Active Substance: SODIUM FERRIC GLUCONATE COMPLEX
     Dosage: 4.64 MILLIGRAM, 4 EVERY 1 WEEKS
     Route: 042
  465. SODIUM FERRIC GLUCONATE COMPLEX [Suspect]
     Active Substance: SODIUM FERRIC GLUCONATE COMPLEX
     Dosage: UNK
     Route: 065
  466. SODIUM FERRIC GLUCONATE COMPLEX [Suspect]
     Active Substance: SODIUM FERRIC GLUCONATE COMPLEX
     Dosage: 17.85 MILLIGRAM, 1 EVERY 1 WEEKS
     Route: 042
  467. SODIUM FERRIC GLUCONATE COMPLEX [Suspect]
     Active Substance: SODIUM FERRIC GLUCONATE COMPLEX
     Dosage: 125 MILLIGRAM 1 EVERY 1 MONTHS
     Route: 042
  468. SODIUM FERRIC GLUCONATE COMPLEX [Suspect]
     Active Substance: SODIUM FERRIC GLUCONATE COMPLEX
     Dosage: 4.64 MILLIGRAM, 1 EVERY 4 WEEKS
     Route: 042
  469. SODIUM FERRIC GLUCONATE COMPLEX [Suspect]
     Active Substance: SODIUM FERRIC GLUCONATE COMPLEX
     Dosage: 125 MILLIGRAM 1 EVERY 1 MONTHS
     Route: 042
  470. SODIUM FERRIC GLUCONATE COMPLEX [Suspect]
     Active Substance: SODIUM FERRIC GLUCONATE COMPLEX
     Dosage: 4.64 MILLIGRAM 1 EVERY  4 MONTHS
     Route: 042
  471. UMECLIDINIUM BROMIDE\VILANTEROL TRIFENATATE [Suspect]
     Active Substance: UMECLIDINIUM BROMIDE\VILANTEROL TRIFENATATE
     Indication: Dyspnoea
     Dosage: 1 INTERNATIONAL UNIT, OD
     Route: 048
  472. UMECLIDINIUM BROMIDE\VILANTEROL TRIFENATATE [Suspect]
     Active Substance: UMECLIDINIUM BROMIDE\VILANTEROL TRIFENATATE
     Dosage: 1 INTERNATIONAL UNIT
     Route: 048
  473. UMECLIDINIUM BROMIDE\VILANTEROL TRIFENATATE [Suspect]
     Active Substance: UMECLIDINIUM BROMIDE\VILANTEROL TRIFENATATE
     Dosage: 1 INTERNATIONAL UNIT, OD
     Route: 048
  474. UMECLIDINIUM BROMIDE\VILANTEROL TRIFENATATE [Suspect]
     Active Substance: UMECLIDINIUM BROMIDE\VILANTEROL TRIFENATATE
     Dosage: 1 INTERNATIONAL UNIT, OD
     Route: 048
  475. UMECLIDINIUM BROMIDE\VILANTEROL TRIFENATATE [Suspect]
     Active Substance: UMECLIDINIUM BROMIDE\VILANTEROL TRIFENATATE
     Dosage: UNK
     Route: 065
  476. UMECLIDINIUM BROMIDE\VILANTEROL TRIFENATATE [Suspect]
     Active Substance: UMECLIDINIUM BROMIDE\VILANTEROL TRIFENATATE
     Dosage: 1 INTERNATIONAL UNIT, 1 EVERY 1 DAYS
     Route: 065
  477. VASOPRESSIN [Suspect]
     Active Substance: VASOPRESSIN
     Indication: Drug therapy
     Dosage: UNK
     Route: 042
  478. VASOPRESSIN [Suspect]
     Active Substance: VASOPRESSIN
     Dosage: UNK
     Route: 042
  479. VASOPRESSIN [Suspect]
     Active Substance: VASOPRESSIN
     Dosage: UNK
     Route: 065
  480. VASOPRESSIN [Suspect]
     Active Substance: VASOPRESSIN
     Dosage: UNK
     Route: 017
  481. VASOPRESSIN [Suspect]
     Active Substance: VASOPRESSIN
     Dosage: UNK
     Route: 065
  482. VASOPRESSIN [Suspect]
     Active Substance: VASOPRESSIN
     Dosage: UNK
     Route: 042
  483. VASOPRESSIN [Suspect]
     Active Substance: VASOPRESSIN
     Dosage: UNK
     Route: 042
  484. VASOPRESSIN [Suspect]
     Active Substance: VASOPRESSIN
     Dosage: UNK
     Route: 042
  485. VASOPRESSIN [Suspect]
     Active Substance: VASOPRESSIN
     Dosage: UNK
     Route: 042
  486. VASOPRESSIN [Suspect]
     Active Substance: VASOPRESSIN
     Dosage: UNK
     Route: 042
  487. VASOPRESSIN [Suspect]
     Active Substance: VASOPRESSIN
     Dosage: 250 MILLILITER, 1 EVERY 1 DAYS
     Route: 042
  488. VASOPRESSIN [Suspect]
     Active Substance: VASOPRESSIN
     Dosage: 50 MILLILITER, 1 EVERY 1 DAYS
     Route: 042
  489. VASOPRESSIN [Suspect]
     Active Substance: VASOPRESSIN
     Dosage: 50 MILLILITER, 1 EVERY 1 DAYS
     Route: 042
  490. VASOPRESSIN [Suspect]
     Active Substance: VASOPRESSIN
     Dosage: UNK
     Route: 042
  491. VASOPRESSIN [Suspect]
     Active Substance: VASOPRESSIN
     Dosage: UNK
     Route: 042
  492. VASOPRESSIN [Suspect]
     Active Substance: VASOPRESSIN
     Dosage: UNK
     Route: 042
  493. VASOPRESSIN [Suspect]
     Active Substance: VASOPRESSIN
     Dosage: UNK
     Route: 042
  494. VASOPRESSIN [Suspect]
     Active Substance: VASOPRESSIN
     Dosage: UNK
     Route: 042
  495. VASOPRESSIN [Suspect]
     Active Substance: VASOPRESSIN
     Dosage: UNK
     Route: 042
  496. VASOPRESSIN [Suspect]
     Active Substance: VASOPRESSIN
     Dosage: UNK
     Route: 042
  497. VASOPRESSIN [Suspect]
     Active Substance: VASOPRESSIN
     Dosage: UNK
     Route: 042
  498. VASOPRESSIN [Suspect]
     Active Substance: VASOPRESSIN
     Dosage: UNK
     Route: 042
  499. VASOPRESSIN [Suspect]
     Active Substance: VASOPRESSIN
     Dosage: 1 INTERNATIONAL UNIT, QD
     Route: 048
  500. WARFARIN [Suspect]
     Active Substance: WARFARIN
     Indication: Thrombosis
     Dosage: 2 MILLIGRAM
     Route: 048
  501. WARFARIN [Suspect]
     Active Substance: WARFARIN
     Indication: Off label use
     Dosage: 2 GRAM, 1 EVERY 1 DAYS
     Route: 048
  502. WARFARIN [Suspect]
     Active Substance: WARFARIN
     Indication: Intentional product misuse
     Dosage: 2 GRAM, 1 EVERY 1 DAYS
     Route: 048
  503. WARFARIN [Suspect]
     Active Substance: WARFARIN
     Dosage: 2 MILLIGRAM, 1 EVERY 1 DAY
     Route: 048
  504. WARFARIN [Suspect]
     Active Substance: WARFARIN
     Dosage: 2 MILLILITER
     Route: 048
  505. WARFARIN [Suspect]
     Active Substance: WARFARIN
     Dosage: 2 MILLILITER, 1 EVERY 1 DAYS
     Route: 048
  506. WARFARIN [Suspect]
     Active Substance: WARFARIN
     Dosage: UNK
     Route: 048
  507. WARFARIN [Suspect]
     Active Substance: WARFARIN
     Dosage: 2 MILLIGRAM, 1 EVERY 1 DAY
     Route: 048
  508. WARFARIN [Suspect]
     Active Substance: WARFARIN
     Dosage: 2 MILLIGRAM, 1 EVERY 1 DAY
     Route: 048
  509. WARFARIN [Suspect]
     Active Substance: WARFARIN
     Dosage: UNK
     Route: 048
  510. WARFARIN [Suspect]
     Active Substance: WARFARIN
     Dosage: 2 MILLILITER, 1 EVERY 1 DAYS
     Route: 048
  511. WARFARIN [Suspect]
     Active Substance: WARFARIN
     Dosage: 2 MILLILITER, 1 EVERY 1 DAYS
     Route: 065
  512. WARFARIN [Suspect]
     Active Substance: WARFARIN
     Dosage: 2 MILLILITER, 1 EVERY 1 DAYS
     Route: 065
  513. WARFARIN [Suspect]
     Active Substance: WARFARIN
     Dosage: 2 GRAM, 1 EVERY 1 DAYS
     Route: 065
  514. WARFARIN [Suspect]
     Active Substance: WARFARIN
     Dosage: 250 MILLILITER
     Route: 042
  515. AMIODARONE HYDROCHLORIDE [Suspect]
     Active Substance: AMIODARONE HYDROCHLORIDE
     Indication: Ventricular fibrillation
     Dosage: 150 MILLIGRAM, 1 EVERY 1 DAYS
     Route: 042
  516. AMIODARONE HYDROCHLORIDE [Suspect]
     Active Substance: AMIODARONE HYDROCHLORIDE
     Indication: Drug therapy
     Dosage: UNK
     Route: 042
  517. AMIODARONE HYDROCHLORIDE [Suspect]
     Active Substance: AMIODARONE HYDROCHLORIDE
     Indication: Off label use
     Dosage: 150 MILLIGRAM, 1 EVERY 1 DAYS
     Route: 042
  518. AMIODARONE HYDROCHLORIDE [Suspect]
     Active Substance: AMIODARONE HYDROCHLORIDE
     Dosage: UNK, OD
     Route: 042
  519. AMIODARONE HYDROCHLORIDE [Suspect]
     Active Substance: AMIODARONE HYDROCHLORIDE
     Dosage: UNK
     Route: 042
  520. AMIODARONE HYDROCHLORIDE [Suspect]
     Active Substance: AMIODARONE HYDROCHLORIDE
     Dosage: UNK
     Route: 042
  521. AMIODARONE HYDROCHLORIDE [Suspect]
     Active Substance: AMIODARONE HYDROCHLORIDE
     Dosage: UNK
     Route: 065
  522. AMIODARONE HYDROCHLORIDE [Suspect]
     Active Substance: AMIODARONE HYDROCHLORIDE
     Dosage: 150 MILLIGRAM, OD
     Route: 042
  523. AMIODARONE HYDROCHLORIDE [Suspect]
     Active Substance: AMIODARONE HYDROCHLORIDE
     Dosage: 150 MILLIGRAM, OD
     Route: 042
  524. AMIODARONE HYDROCHLORIDE [Suspect]
     Active Substance: AMIODARONE HYDROCHLORIDE
     Dosage: 150 MILLIGRAM, OD
     Route: 042
  525. AMIODARONE HYDROCHLORIDE [Suspect]
     Active Substance: AMIODARONE HYDROCHLORIDE
     Dosage: 150 MILLIGRAM, OD
     Route: 042
  526. AMIODARONE HYDROCHLORIDE [Suspect]
     Active Substance: AMIODARONE HYDROCHLORIDE
     Dosage: UNK
     Route: 042
  527. ATROVENT [Suspect]
     Active Substance: IPRATROPIUM BROMIDE
     Indication: Dyspnoea
     Dosage: UNK 1 EVERY 6 HOURS
  528. ATROVENT [Suspect]
     Active Substance: IPRATROPIUM BROMIDE
     Indication: Sleep disorder therapy
     Dosage: UNK, 1 EVERY 1 DAYS
     Route: 050
  529. ATROVENT [Suspect]
     Active Substance: IPRATROPIUM BROMIDE
     Indication: Somnolence
     Dosage: UNK, 1 EVERY 1 DAYS
     Route: 065
  530. ATROVENT [Suspect]
     Active Substance: IPRATROPIUM BROMIDE
     Dosage: 4 DOSAGE FORM, OD
  531. ATROVENT [Suspect]
     Active Substance: IPRATROPIUM BROMIDE
     Dosage: UNK
  532. ATROVENT [Suspect]
     Active Substance: IPRATROPIUM BROMIDE
     Dosage: UNK,1 EVERY 6 HOURS
     Route: 065
  533. ATROVENT [Suspect]
     Active Substance: IPRATROPIUM BROMIDE
     Dosage: 1 DOSAGE FORM, 1 EVERY 6 HOURS
     Route: 050
  534. ATROVENT [Suspect]
     Active Substance: IPRATROPIUM BROMIDE
     Dosage: UNK
     Route: 050
  535. ATROVENT [Suspect]
     Active Substance: IPRATROPIUM BROMIDE
     Dosage: UNK, 1 EVERY 8 HOURS
     Route: 050
  536. ATROVENT [Suspect]
     Active Substance: IPRATROPIUM BROMIDE
     Dosage: UNK, 4 EVERY 1 DAYS
     Route: 050
  537. ATROVENT [Suspect]
     Active Substance: IPRATROPIUM BROMIDE
     Dosage: UNK
     Route: 065
  538. ATROVENT [Suspect]
     Active Substance: IPRATROPIUM BROMIDE
     Dosage: UNK
     Route: 065
  539. ATROVENT [Suspect]
     Active Substance: IPRATROPIUM BROMIDE
     Dosage: UNK UNK, OD
     Route: 065
  540. ATROVENT [Suspect]
     Active Substance: IPRATROPIUM BROMIDE
     Dosage: UNK, OD
  541. ATROVENT [Suspect]
     Active Substance: IPRATROPIUM BROMIDE
     Dosage: 1 DOSAGE FORM, 4 EVERY 1 DAYS
     Route: 065
  542. ATROVENT [Suspect]
     Active Substance: IPRATROPIUM BROMIDE
     Dosage: UNK UNK, TID (3 EVERY 1 DAYS)
     Route: 050
  543. ATROVENT [Suspect]
     Active Substance: IPRATROPIUM BROMIDE
     Dosage: UNK
  544. ATROVENT [Suspect]
     Active Substance: IPRATROPIUM BROMIDE
     Dosage: UNK
     Route: 065
  545. ATROVENT [Suspect]
     Active Substance: IPRATROPIUM BROMIDE
     Dosage: UNK, 1 EVERY 4 HOURS
     Route: 065
  546. ATROVENT [Suspect]
     Active Substance: IPRATROPIUM BROMIDE
     Dosage: UNK, 1 EVERY 1 DAYS
     Route: 065
  547. ATROVENT [Suspect]
     Active Substance: IPRATROPIUM BROMIDE
     Dosage: UNK, 1 EVERY 1 DAYS
  548. ATROVENT [Suspect]
     Active Substance: IPRATROPIUM BROMIDE
     Dosage: UNK, 4 EVERY 1 DAYS
  549. ATROVENT [Suspect]
     Active Substance: IPRATROPIUM BROMIDE
     Dosage: UNK, 4 EVERY 1 DAYS
     Route: 065
  550. ATROVENT [Suspect]
     Active Substance: IPRATROPIUM BROMIDE
     Dosage: UNK, 1 EVERY 4 DAYS
  551. ATROVENT [Suspect]
     Active Substance: IPRATROPIUM BROMIDE
     Dosage: UNK, 4 EVERY 1 DAYS
     Route: 050
  552. ATROVENT [Suspect]
     Active Substance: IPRATROPIUM BROMIDE
     Dosage: UNK,1 EVERY 6 HOURS
  553. ATROVENT [Suspect]
     Active Substance: IPRATROPIUM BROMIDE
     Dosage: UNK,1 EVERY 6 HOURS
  554. ATROVENT [Suspect]
     Active Substance: IPRATROPIUM BROMIDE
     Dosage: UNK
     Route: 050
  555. ATROVENT [Suspect]
     Active Substance: IPRATROPIUM BROMIDE
     Dosage: UNK
     Route: 050
  556. ATROVENT [Suspect]
     Active Substance: IPRATROPIUM BROMIDE
     Dosage: UNK,1 EVERY 6 HOURS
     Route: 065
  557. ATROVENT [Suspect]
     Active Substance: IPRATROPIUM BROMIDE
     Dosage: 1 DOSAGE FORM, 1 EVERY 8 HOURS
     Route: 065
  558. ATROVENT [Suspect]
     Active Substance: IPRATROPIUM BROMIDE
     Dosage: UNK, 1 EVERY 4 DAYS
  559. ATROVENT [Suspect]
     Active Substance: IPRATROPIUM BROMIDE
     Dosage: UNK,1 EVERY 6 HOURS
     Route: 065
  560. ATROVENT [Suspect]
     Active Substance: IPRATROPIUM BROMIDE
     Dosage: UNK, 1 EVERY 1 DAYS
     Route: 065
  561. ATROVENT [Suspect]
     Active Substance: IPRATROPIUM BROMIDE
     Dosage: UNK, 4 EVERY 1 DAYS
     Route: 050
  562. ATROVENT [Suspect]
     Active Substance: IPRATROPIUM BROMIDE
     Dosage: UNK, 1 EVERY 1 DAYS
     Route: 050
  563. ATROVENT [Suspect]
     Active Substance: IPRATROPIUM BROMIDE
     Dosage: 1 DOSAGE FORM, 1 EVERY 1 DAY
  564. ATROVENT [Suspect]
     Active Substance: IPRATROPIUM BROMIDE
     Dosage: 1 DOSAGE FORM, 1 EVERY 8 HOURS
     Route: 050
  565. ATROVENT [Suspect]
     Active Substance: IPRATROPIUM BROMIDE
     Dosage: 1 DOSAGE FORM, 1 EVERY 6 HOURS
     Route: 065
  566. ATROVENT [Suspect]
     Active Substance: IPRATROPIUM BROMIDE
     Dosage: UNK, 1 EVERY 1 DAYS
     Route: 065
  567. ATROVENT [Suspect]
     Active Substance: IPRATROPIUM BROMIDE
     Dosage: UNK, 1 EVERY 1 DAYS
     Route: 065
  568. ATROVENT [Suspect]
     Active Substance: IPRATROPIUM BROMIDE
     Dosage: UNK
     Route: 065
  569. ATROVENT [Suspect]
     Active Substance: IPRATROPIUM BROMIDE
     Dosage: UNK
     Route: 065
  570. ATROVENT [Suspect]
     Active Substance: IPRATROPIUM BROMIDE
     Dosage: UNK, 4 EVERY 1 DAYS
  571. ATROVENT [Suspect]
     Active Substance: IPRATROPIUM BROMIDE
     Dosage: UNK, 1 EVERY 1 DAYS
  572. ATROVENT [Suspect]
     Active Substance: IPRATROPIUM BROMIDE
     Dosage: UNK, 1 EVERY 1 DAYS
     Route: 050
  573. ATROVENT [Suspect]
     Active Substance: IPRATROPIUM BROMIDE
     Dosage: UNK, 4 EVERY 1 DAYS
     Route: 050
  574. ATROVENT [Suspect]
     Active Substance: IPRATROPIUM BROMIDE
     Dosage: UNK, 1 EVERY 1 DAYS
     Route: 065
  575. ATROVENT [Suspect]
     Active Substance: IPRATROPIUM BROMIDE
     Dosage: UNK
     Route: 065
  576. ATROVENT [Suspect]
     Active Substance: IPRATROPIUM BROMIDE
     Dosage: UNK,1 EVERY 8 HOURS
     Route: 065
  577. DISTIGMINE BROMIDE [Suspect]
     Active Substance: DISTIGMINE BROMIDE
     Indication: Dyspnoea
     Dosage: 1 INTERNATIONAL UNIT, OD
     Route: 048
  578. DISTIGMINE BROMIDE [Suspect]
     Active Substance: DISTIGMINE BROMIDE
     Indication: Off label use
     Dosage: 1 INTERNATIONAL UNIT, OD
     Route: 048
  579. DISTIGMINE BROMIDE [Suspect]
     Active Substance: DISTIGMINE BROMIDE
     Dosage: 1 INTERNATIONAL UNIT, OD
     Route: 048
  580. DISTIGMINE BROMIDE [Suspect]
     Active Substance: DISTIGMINE BROMIDE
     Dosage: 1 INTERNATIONAL UNIT, OD
     Route: 048
  581. DISTIGMINE BROMIDE [Suspect]
     Active Substance: DISTIGMINE BROMIDE
     Dosage: UNK
     Route: 065
  582. DISTIGMINE BROMIDE [Suspect]
     Active Substance: DISTIGMINE BROMIDE
     Dosage: 1 INTERNATIONAL UNIT, 1 EVERY 1 DAYS
     Route: 048
  583. DISTIGMINE BROMIDE [Suspect]
     Active Substance: DISTIGMINE BROMIDE
     Dosage: 1 INTERNATIONAL UNIT, 1 EVERY 1 DAYS
     Route: 048
  584. DULCOLAX (BISACODYL) [Suspect]
     Active Substance: BISACODYL
     Indication: Constipation
     Dosage: 10 MILLIGRAM, PRN
     Route: 054
  585. DULCOLAX (BISACODYL) [Suspect]
     Active Substance: BISACODYL
     Dosage: 10 MILLIGRAM
     Route: 054
  586. DULCOLAX (BISACODYL) [Suspect]
     Active Substance: BISACODYL
     Dosage: 10 MILLIGRAM
     Route: 054
  587. DULCOLAX (BISACODYL) [Suspect]
     Active Substance: BISACODYL
     Dosage: 10 MILLIGRAM
     Route: 054
  588. DULCOLAX (BISACODYL) [Suspect]
     Active Substance: BISACODYL
     Dosage: UNK
     Route: 065
  589. DULCOLAX (BISACODYL) [Suspect]
     Active Substance: BISACODYL
     Dosage: 10 MILLIGRAM, QD
     Route: 054
  590. DULCOLAX (BISACODYL) [Suspect]
     Active Substance: BISACODYL
     Dosage: 10 MILLIGRAM (FORMULATION: UNKNOWN)
     Route: 054
  591. DEXTROSE [Suspect]
     Active Substance: DEXTROSE\DEXTROSE MONOHYDRATE
     Indication: Nutritional supplementation
     Dosage: 12.5 MILLIGRAM
     Route: 042
  592. DEXTROSE [Suspect]
     Active Substance: DEXTROSE\DEXTROSE MONOHYDRATE
     Dosage: UNK
     Route: 065
  593. DEXTROSE [Suspect]
     Active Substance: DEXTROSE\DEXTROSE MONOHYDRATE
     Dosage: 12.5 GRAM
     Route: 065
  594. DEXTROSE [Suspect]
     Active Substance: DEXTROSE\DEXTROSE MONOHYDRATE
     Dosage: 12.5 GRAM, QD
     Route: 042
  595. DEXTROSE [Suspect]
     Active Substance: DEXTROSE\DEXTROSE MONOHYDRATE
     Dosage: 12.5 MILLIGRAM, PRN
     Route: 042
  596. DEXTROSE [Suspect]
     Active Substance: DEXTROSE\DEXTROSE MONOHYDRATE
     Dosage: 12.5 MILLIGRAM, 1 EVERY 1 DAYS
     Route: 042
  597. FLUTICASONE FUROATE\VILANTEROL TRIFENATATE [Suspect]
     Active Substance: FLUTICASONE FUROATE\VILANTEROL TRIFENATATE
     Indication: Nutritional supplementation
     Dosage: UNK
     Route: 065
  598. FLUTICASONE FUROATE\VILANTEROL TRIFENATATE [Suspect]
     Active Substance: FLUTICASONE FUROATE\VILANTEROL TRIFENATATE
     Indication: Dyspnoea
     Dosage: 1 INTERNATIONAL UNIT, 1 EVERY 1 DAYS
     Route: 048
  599. FLUTICASONE FUROATE\VILANTEROL TRIFENATATE [Suspect]
     Active Substance: FLUTICASONE FUROATE\VILANTEROL TRIFENATATE
     Indication: Blood phosphorus increased
  600. FLUTICASONE FUROATE\VILANTEROL TRIFENATATE [Suspect]
     Active Substance: FLUTICASONE FUROATE\VILANTEROL TRIFENATATE
     Indication: Off label use
  601. POLYETHYLENE GLYCOLS [Suspect]
     Active Substance: POLYETHYLENE GLYCOLS
     Indication: Constipation
     Dosage: 17 GRAM, 1 EVERY 1 DAYS
     Route: 048
  602. POLYETHYLENE GLYCOLS [Suspect]
     Active Substance: POLYETHYLENE GLYCOLS
     Dosage: 17 GRAM, 1 EVERY 1 DAYS
     Route: 048
  603. POLYETHYLENE GLYCOLS [Suspect]
     Active Substance: POLYETHYLENE GLYCOLS
     Dosage: 17 MILLIGRAM
     Route: 048
  604. POLYETHYLENE GLYCOLS [Suspect]
     Active Substance: POLYETHYLENE GLYCOLS
     Dosage: UNK, 1 EVERY 1 DAY
     Route: 048
  605. POLYETHYLENE GLYCOLS [Suspect]
     Active Substance: POLYETHYLENE GLYCOLS
     Dosage: UNK
     Route: 048
  606. POLYETHYLENE GLYCOLS [Suspect]
     Active Substance: POLYETHYLENE GLYCOLS
     Dosage: 17 MILLIGRAM, 1 EVERY 1 DAYS
     Route: 048
  607. POLYETHYLENE GLYCOLS [Suspect]
     Active Substance: POLYETHYLENE GLYCOLS
     Dosage: 17 GRAM, 1 EVERY 1 DAYS
     Route: 048
  608. POLYETHYLENE GLYCOLS [Suspect]
     Active Substance: POLYETHYLENE GLYCOLS
     Dosage: UNK
     Route: 065
  609. POLYETHYLENE GLYCOLS [Suspect]
     Active Substance: POLYETHYLENE GLYCOLS
     Dosage: 17 MILLIGRAM, 1 EVERY 1 DAYS
     Route: 048
  610. POLYETHYLENE GLYCOLS [Suspect]
     Active Substance: POLYETHYLENE GLYCOLS
     Dosage: 3 MILLIGRAM, 1 EVERY 1 DAYS
     Route: 048
  611. POLYETHYLENE GLYCOLS [Suspect]
     Active Substance: POLYETHYLENE GLYCOLS
     Dosage: UNK
     Route: 048
  612. POLYETHYLENE GLYCOLS [Suspect]
     Active Substance: POLYETHYLENE GLYCOLS
     Dosage: 2.5 MILLIGRAM
     Route: 042
  613. POLYETHYLENE GLYCOLS [Suspect]
     Active Substance: POLYETHYLENE GLYCOLS
     Dosage: 17 MILLIGRAM, 1 EVERY 1 DAYS
     Route: 048
  614. POLYETHYLENE GLYCOLS [Suspect]
     Active Substance: POLYETHYLENE GLYCOLS
     Dosage: 17 MILLIGRAM, 1 EVERY 1 DAYS
     Route: 065
  615. SODIUM PHOSPHATE, MONOBASIC [Suspect]
     Active Substance: SODIUM PHOSPHATE, MONOBASIC
     Indication: Constipation
     Dosage: 133 MILLILITRE, PRN (AS REQUIRED)
     Route: 054
  616. SODIUM PHOSPHATE, MONOBASIC [Suspect]
     Active Substance: SODIUM PHOSPHATE, MONOBASIC
     Dosage: 133 MILLILITER
     Route: 054
  617. SODIUM PHOSPHATE, MONOBASIC [Suspect]
     Active Substance: SODIUM PHOSPHATE, MONOBASIC
     Dosage: 133 MILLILITER
     Route: 065
  618. SODIUM PHOSPHATE, MONOBASIC [Suspect]
     Active Substance: SODIUM PHOSPHATE, MONOBASIC
     Dosage: UNK
     Route: 065
  619. SODIUM PHOSPHATE, MONOBASIC [Suspect]
     Active Substance: SODIUM PHOSPHATE, MONOBASIC
     Dosage: 133 MILLILITER
     Route: 054
  620. SODIUM PHOSPHATE, MONOBASIC [Suspect]
     Active Substance: SODIUM PHOSPHATE, MONOBASIC
     Dosage: 133 MILLILITER
     Route: 054
  621. SODIUM PHOSPHATE, MONOBASIC [Suspect]
     Active Substance: SODIUM PHOSPHATE, MONOBASIC
     Dosage: 133 MILLILITER
     Route: 054
  622. SODIUM PHOSPHATE, MONOBASIC [Suspect]
     Active Substance: SODIUM PHOSPHATE, MONOBASIC
     Dosage: 133 MILLILITER
     Route: 054
  623. SODIUM PHOSPHATE, MONOBASIC [Suspect]
     Active Substance: SODIUM PHOSPHATE, MONOBASIC
     Dosage: 133 MILLILITER
     Route: 054
  624. SODIUM PICOSULFATE [Suspect]
     Active Substance: SODIUM PICOSULFATE
     Indication: Constipation
     Dosage: 10 MILLIGRAM, PRN
     Route: 054
  625. SODIUM PICOSULFATE [Suspect]
     Active Substance: SODIUM PICOSULFATE
     Indication: Analgesic therapy
     Dosage: 10 MILLIGRAM
     Route: 054
  626. SODIUM PICOSULFATE [Suspect]
     Active Substance: SODIUM PICOSULFATE
     Dosage: 10 MILLIGRAM
     Route: 054
  627. SODIUM PICOSULFATE [Suspect]
     Active Substance: SODIUM PICOSULFATE
     Dosage: 10 MILLIGRAM
     Route: 065
  628. SODIUM PICOSULFATE [Suspect]
     Active Substance: SODIUM PICOSULFATE
     Dosage: 10 MILLIGRAM
     Route: 065
  629. SODIUM PICOSULFATE [Suspect]
     Active Substance: SODIUM PICOSULFATE
     Dosage: UNK
     Route: 065
  630. SODIUM PICOSULFATE [Suspect]
     Active Substance: SODIUM PICOSULFATE
     Dosage: 12.5 GRAM 1 EVERY 1 MONTH)
     Route: 065
  631. SODIUM PICOSULFATE [Suspect]
     Active Substance: SODIUM PICOSULFATE
     Dosage: UNK
     Route: 065
  632. SODIUM PICOSULFATE [Suspect]
     Active Substance: SODIUM PICOSULFATE
     Dosage: UNK
     Route: 065
  633. SODIUM PICOSULFATE [Suspect]
     Active Substance: SODIUM PICOSULFATE
     Dosage: UNK
     Route: 065
  634. SODIUM PICOSULFATE [Suspect]
     Active Substance: SODIUM PICOSULFATE
     Dosage: UNK
     Route: 054
  635. SODIUM PICOSULFATE [Suspect]
     Active Substance: SODIUM PICOSULFATE
     Dosage: UNK
     Route: 054
  636. SODIUM PICOSULFATE [Suspect]
     Active Substance: SODIUM PICOSULFATE
     Dosage: 12.5 MILLIGRAM
     Route: 065
  637. SODIUM PICOSULFATE [Suspect]
     Active Substance: SODIUM PICOSULFATE
     Dosage: 10 MILLIGRAM
     Route: 065
  638. UMECLIDINIUM BROMIDE [Suspect]
     Active Substance: UMECLIDINIUM BROMIDE
     Indication: Dyspnoea
     Dosage: 1 INTERNATIONAL UNIT, 1 EVERY 1 DAYS
     Route: 048
  639. UMECLIDINIUM BROMIDE [Suspect]
     Active Substance: UMECLIDINIUM BROMIDE
     Dosage: UNK
     Route: 065
  640. UMECLIDINIUM BROMIDE [Suspect]
     Active Substance: UMECLIDINIUM BROMIDE
     Dosage: 1 DOSAGE FORM
     Route: 048
  641. UMECLIDINIUM BROMIDE [Suspect]
     Active Substance: UMECLIDINIUM BROMIDE
     Dosage: 1 INTERNATIONAL UNIT, 1 EVERY 1 DAYS
     Route: 048
  642. UMECLIDINIUM BROMIDE [Suspect]
     Active Substance: UMECLIDINIUM BROMIDE
     Dosage: 1 INTERNATIONAL UNIT, 1 EVERY 1 DAYS
     Route: 048
  643. VILANTEROL TRIFENATATE [Suspect]
     Active Substance: VILANTEROL TRIFENATATE
     Indication: Dyspnoea
     Dosage: UNK
     Route: 065
  644. VILANTEROL TRIFENATATE [Suspect]
     Active Substance: VILANTEROL TRIFENATATE
     Dosage: UNK
     Route: 065
  645. VILANTEROL TRIFENATATE [Suspect]
     Active Substance: VILANTEROL TRIFENATATE
     Dosage: UNK
     Route: 065
  646. VILANTEROL TRIFENATATE [Suspect]
     Active Substance: VILANTEROL TRIFENATATE
     Dosage: 1 INTERNATIONAL UNIT, 1 EVERY 1 DAYS
     Route: 048
  647. VILANTEROL TRIFENATATE [Suspect]
     Active Substance: VILANTEROL TRIFENATATE
     Dosage: UNK
     Route: 065
  648. VILANTEROL TRIFENATATE [Suspect]
     Active Substance: VILANTEROL TRIFENATATE
     Dosage: UNK
     Route: 065
  649. VILANTEROL TRIFENATATE [Suspect]
     Active Substance: VILANTEROL TRIFENATATE
     Dosage: 1 INTERNATIONAL UNIT
     Route: 048
  650. VILANTEROL TRIFENATATE [Suspect]
     Active Substance: VILANTEROL TRIFENATATE
     Dosage: 1 INTERNATIONAL UNIT
     Route: 048
  651. CEFTRIAXONE SODIUM [Suspect]
     Active Substance: CEFTRIAXONE SODIUM
     Indication: Bacterial infection
     Dosage: 2 GRAM, OD
     Route: 042
  652. CEFTRIAXONE SODIUM [Suspect]
     Active Substance: CEFTRIAXONE SODIUM
     Indication: Off label use
     Dosage: 2 GRAM, 1 EVERY 1 DAYS
     Route: 042
  653. CEFTRIAXONE SODIUM [Suspect]
     Active Substance: CEFTRIAXONE SODIUM
     Dosage: 2 GRAM, OD
     Route: 042
  654. CEFTRIAXONE SODIUM [Suspect]
     Active Substance: CEFTRIAXONE SODIUM
     Dosage: UNK
     Route: 065
  655. FLUTICASONE FUROATE [Suspect]
     Active Substance: FLUTICASONE FUROATE
     Indication: Nutritional supplementation
     Dosage: UNK
     Route: 065
  656. FLUTICASONE FUROATE [Suspect]
     Active Substance: FLUTICASONE FUROATE
     Indication: Intentional product misuse
     Dosage: UNK
     Route: 065
  657. FLUTICASONE FUROATE [Suspect]
     Active Substance: FLUTICASONE FUROATE
     Indication: Dyspnoea
     Dosage: UNK
     Route: 065
  658. FLUTICASONE FUROATE [Suspect]
     Active Substance: FLUTICASONE FUROATE
     Indication: Blood phosphorus increased
     Dosage: UNK
     Route: 065
  659. DEXTROSE [Suspect]
     Active Substance: DEXTROSE\DEXTROSE MONOHYDRATE
     Indication: Nutritional supplementation
     Dosage: 12.5 GRAM, PRN
     Route: 042
  660. DEXTROSE [Suspect]
     Active Substance: DEXTROSE\DEXTROSE MONOHYDRATE
     Indication: Off label use
     Dosage: 12.5 GRAM, PRN
     Route: 042
  661. DEXTROSE [Suspect]
     Active Substance: DEXTROSE\DEXTROSE MONOHYDRATE
     Indication: Product use in unapproved indication
     Dosage: 12.5 GRAM
     Route: 065
  662. DEXTROSE [Suspect]
     Active Substance: DEXTROSE\DEXTROSE MONOHYDRATE
     Indication: Intentional product misuse
     Dosage: 12.5 GRAM
     Route: 042
  663. DEXTROSE [Suspect]
     Active Substance: DEXTROSE\DEXTROSE MONOHYDRATE
     Dosage: UNK
     Route: 065
  664. DEXTROSE [Suspect]
     Active Substance: DEXTROSE\DEXTROSE MONOHYDRATE
     Dosage: UNK
     Route: 065
  665. DEXTROSE [Suspect]
     Active Substance: DEXTROSE\DEXTROSE MONOHYDRATE
     Dosage: 12.5 GRAM
     Route: 042
  666. DEXTROSE [Suspect]
     Active Substance: DEXTROSE\DEXTROSE MONOHYDRATE
     Dosage: 12.5 MILLIGRAM, QD
     Route: 042
  667. DEXTROSE [Suspect]
     Active Substance: DEXTROSE\DEXTROSE MONOHYDRATE
     Dosage: 12.5 MILLIGRAM, QD
     Route: 065
  668. DEXTROSE [Suspect]
     Active Substance: DEXTROSE\DEXTROSE MONOHYDRATE
     Dosage: 12.5 MILLIGRAM (FORMULATION: SOLUTION FOR INJECTION)
     Route: 042
  669. DEXTROSE [Suspect]
     Active Substance: DEXTROSE\DEXTROSE MONOHYDRATE
     Dosage: 12.5 GRAM (FORMULATION: SOLUTION FOR INJECTION)
     Route: 065
  670. DEXTROSE [Suspect]
     Active Substance: DEXTROSE\DEXTROSE MONOHYDRATE
     Dosage: 12.5 GRAM, PRN
     Route: 042
  671. DEXTROSE [Suspect]
     Active Substance: DEXTROSE\DEXTROSE MONOHYDRATE
     Dosage: 1 DOSAGE FORM, 1 EVERY 1 DAYS
     Route: 058
  672. DEXTROSE [Suspect]
     Active Substance: DEXTROSE\DEXTROSE MONOHYDRATE
     Dosage: 250 MILLILITER, PRN
     Route: 042
  673. DEXTROSE [Suspect]
     Active Substance: DEXTROSE\DEXTROSE MONOHYDRATE
     Dosage: 12.5 GRAM, 1 EVERY 1 DAYS
     Route: 065
  674. DEXTROSE [Suspect]
     Active Substance: DEXTROSE\DEXTROSE MONOHYDRATE
     Dosage: 12.5 GRAM, PRN
     Route: 065
  675. DEXTROSE [Suspect]
     Active Substance: DEXTROSE\DEXTROSE MONOHYDRATE
     Dosage: 12.5 GRAM, PRN
     Route: 065
  676. DEXTROSE [Suspect]
     Active Substance: DEXTROSE\DEXTROSE MONOHYDRATE
     Dosage: UNK, 1 EVERY 1 DAYS
     Route: 042
  677. DEXTROSE [Suspect]
     Active Substance: DEXTROSE\DEXTROSE MONOHYDRATE
     Dosage: 12.5 GRAM, PRN
     Route: 065
  678. DEXTROSE [Suspect]
     Active Substance: DEXTROSE\DEXTROSE MONOHYDRATE
     Dosage: 50 MILLILITER
     Route: 042
  679. DEXTROSE [Suspect]
     Active Substance: DEXTROSE\DEXTROSE MONOHYDRATE
     Dosage: 1.25 GRAM
     Route: 042
  680. DEXTROSE [Suspect]
     Active Substance: DEXTROSE\DEXTROSE MONOHYDRATE
     Dosage: 12.5 GRAM, 1 EVERY 1 DAYS
     Route: 065
  681. DEXTROSE [Suspect]
     Active Substance: DEXTROSE\DEXTROSE MONOHYDRATE
     Dosage: 12 MILLIGRAM, 1 EVERY 1 DAYS
     Route: 065
  682. DEXTROSE [Suspect]
     Active Substance: DEXTROSE\DEXTROSE MONOHYDRATE
     Dosage: 50 MILLILITER
     Route: 042
  683. DEXTROSE [Suspect]
     Active Substance: DEXTROSE\DEXTROSE MONOHYDRATE
     Dosage: 50 MILLILITER, 1 EVERY 1 DAY
     Route: 065
  684. DEXTROSE [Suspect]
     Active Substance: DEXTROSE\DEXTROSE MONOHYDRATE
     Dosage: 250 MILLILITER, 1 EVERY 1 DAY
     Route: 042
  685. HEPARIN SODIUM [Suspect]
     Active Substance: HEPARIN SODIUM
     Indication: Anticoagulant therapy
     Dosage: 50 MILLILITRE
     Route: 042
  686. HEPARIN SODIUM [Suspect]
     Active Substance: HEPARIN SODIUM
     Indication: Intentional product misuse
     Dosage: 250 MILLILITRE
     Route: 042
  687. HEPARIN SODIUM [Suspect]
     Active Substance: HEPARIN SODIUM
     Indication: Off label use
     Dosage: 50 MILLILITRE
     Route: 042
  688. HEPARIN SODIUM [Suspect]
     Active Substance: HEPARIN SODIUM
     Dosage: 50 MILLILITRE, 1 EVERY 1 DAYS
     Route: 042
  689. HEPARIN SODIUM [Suspect]
     Active Substance: HEPARIN SODIUM
     Dosage: 50 MILLILITRE, 1 EVERY 1 DAYS
     Route: 042
  690. HEPARIN SODIUM [Suspect]
     Active Substance: HEPARIN SODIUM
     Dosage: 250 MILLILITRE
     Route: 042
  691. HEPARIN SODIUM [Suspect]
     Active Substance: HEPARIN SODIUM
     Dosage: 250 MILLILITRE
     Route: 042
  692. HEPARIN SODIUM [Suspect]
     Active Substance: HEPARIN SODIUM
     Dosage: UNK
     Route: 065
  693. HEPARIN SODIUM [Suspect]
     Active Substance: HEPARIN SODIUM
     Dosage: 50 MILLILITRE
     Route: 042
  694. HEPARIN SODIUM [Suspect]
     Active Substance: HEPARIN SODIUM
     Dosage: 50 MILLILITRE
     Route: 042
  695. HEPARIN SODIUM [Suspect]
     Active Substance: HEPARIN SODIUM
     Dosage: 50 MILLILITRE
     Route: 042
  696. HEPARIN SODIUM [Suspect]
     Active Substance: HEPARIN SODIUM
     Dosage: 50 MILLILITRE
     Route: 042
  697. HEPARIN SODIUM [Suspect]
     Active Substance: HEPARIN SODIUM
     Dosage: 50 MILLILITRE, 1 EVERY 1 DAYS
     Route: 042
  698. HEPARIN SODIUM [Suspect]
     Active Substance: HEPARIN SODIUM
     Dosage: 250 MILLILITRE
     Route: 042
  699. HEPARIN SODIUM [Suspect]
     Active Substance: HEPARIN SODIUM
     Dosage: 250 MILLILITRE
     Route: 042
  700. HEPARIN SODIUM [Suspect]
     Active Substance: HEPARIN SODIUM
     Dosage: 250 MILLILITRE
     Route: 042
  701. HEPARIN SODIUM [Suspect]
     Active Substance: HEPARIN SODIUM
     Dosage: 250 MILLILITRE, PRN
     Route: 042
  702. HYDROMORPHONE HYDROCHLORIDE [Suspect]
     Active Substance: HYDROMORPHONE HYDROCHLORIDE
     Indication: Analgesic therapy
     Dosage: 1 MILLIGRAM, 6 EVERY 1 DAY
     Route: 058
  703. HYDROMORPHONE HYDROCHLORIDE [Suspect]
     Active Substance: HYDROMORPHONE HYDROCHLORIDE
     Indication: Off label use
     Dosage: 1 MILLIGRAM 1 EVERY 4 HOURS
     Route: 058
  704. HYDROMORPHONE HYDROCHLORIDE [Suspect]
     Active Substance: HYDROMORPHONE HYDROCHLORIDE
     Dosage: 96 MILLIGRAM 1 EVERY 1 DAYS
     Route: 058
  705. HYDROMORPHONE HYDROCHLORIDE [Suspect]
     Active Substance: HYDROMORPHONE HYDROCHLORIDE
     Dosage: 1 MILLIGRAM
     Route: 058
  706. HYDROMORPHONE HYDROCHLORIDE [Suspect]
     Active Substance: HYDROMORPHONE HYDROCHLORIDE
     Dosage: 17 MILLIGRAM 1 EVERY 1 DAYS
     Route: 065
  707. HYDROMORPHONE HYDROCHLORIDE [Suspect]
     Active Substance: HYDROMORPHONE HYDROCHLORIDE
     Dosage: 1 MILLIGRAM 1 EVERY 1 DAYS
     Route: 058
  708. HYDROMORPHONE HYDROCHLORIDE [Suspect]
     Active Substance: HYDROMORPHONE HYDROCHLORIDE
     Dosage: 6 MILLIGRAM 1 EVERY 4 HOURS
     Route: 058
  709. HYDROMORPHONE HYDROCHLORIDE [Suspect]
     Active Substance: HYDROMORPHONE HYDROCHLORIDE
     Dosage: 6 MILLIGRAM 1 EVERY 6 HOURS
     Route: 058
  710. HYDROMORPHONE HYDROCHLORIDE [Suspect]
     Active Substance: HYDROMORPHONE HYDROCHLORIDE
     Dosage: 1 MILLIGRAM
     Route: 058
  711. HYDROMORPHONE HYDROCHLORIDE [Suspect]
     Active Substance: HYDROMORPHONE HYDROCHLORIDE
     Dosage: 1 MILLIGRAM, 1 EVERY 6 DAYS
     Route: 058
  712. HYDROMORPHONE HYDROCHLORIDE [Suspect]
     Active Substance: HYDROMORPHONE HYDROCHLORIDE
     Dosage: 4 MILLIGRAM, 6 EVERY 1 DAY
     Route: 058
  713. HYDROMORPHONE HYDROCHLORIDE [Suspect]
     Active Substance: HYDROMORPHONE HYDROCHLORIDE
     Dosage: 24 MILLIGRAM, 4 EVERY 1 DAYS
     Route: 058
  714. HYDROMORPHONE HYDROCHLORIDE [Suspect]
     Active Substance: HYDROMORPHONE HYDROCHLORIDE
     Dosage: 24 MILLIGRAM, 1 EVERY 1 DAYS
     Route: 058
  715. HYDROMORPHONE HYDROCHLORIDE [Suspect]
     Active Substance: HYDROMORPHONE HYDROCHLORIDE
     Dosage: 6 MILLIGRAM, 4 EVERY 1 DAYS
     Route: 058
  716. HYDROMORPHONE HYDROCHLORIDE [Suspect]
     Active Substance: HYDROMORPHONE HYDROCHLORIDE
     Dosage: 6 MILLIGRAM, 6 EVERY 1 DAYS
     Route: 058
  717. HYDROMORPHONE HYDROCHLORIDE [Suspect]
     Active Substance: HYDROMORPHONE HYDROCHLORIDE
     Dosage: 24 MILLIGRAM, 6 EVERY 1 DAYS
     Route: 058
  718. HYDROMORPHONE HYDROCHLORIDE [Suspect]
     Active Substance: HYDROMORPHONE HYDROCHLORIDE
     Dosage: 6 MILLIGRAM
     Route: 058
  719. HYDROMORPHONE HYDROCHLORIDE [Suspect]
     Active Substance: HYDROMORPHONE HYDROCHLORIDE
     Dosage: 6 MILLIGRAM
     Route: 058
  720. HYDROMORPHONE HYDROCHLORIDE [Suspect]
     Active Substance: HYDROMORPHONE HYDROCHLORIDE
     Dosage: 6 MILLIGRAM, 4 EVERY 1 DAYS
     Route: 058
  721. HYDROMORPHONE HYDROCHLORIDE [Suspect]
     Active Substance: HYDROMORPHONE HYDROCHLORIDE
     Dosage: 17 MILLIGRAM, 1 EVERY 1 DAYS
     Route: 058
  722. HYDROMORPHONE HYDROCHLORIDE [Suspect]
     Active Substance: HYDROMORPHONE HYDROCHLORIDE
     Dosage: 96 MILLIGRAM, 1 EVERY 1 DAYS
     Route: 058
  723. HYDROMORPHONE HYDROCHLORIDE [Suspect]
     Active Substance: HYDROMORPHONE HYDROCHLORIDE
     Dosage: 4 MILLIGRAM 1 EVERY 4 DAYS
     Route: 058
  724. HYDROMORPHONE HYDROCHLORIDE [Suspect]
     Active Substance: HYDROMORPHONE HYDROCHLORIDE
     Dosage: 6 MILLIGRAM 1 EVERY 6 HOURS
     Route: 058
  725. HYDROMORPHONE HYDROCHLORIDE [Suspect]
     Active Substance: HYDROMORPHONE HYDROCHLORIDE
     Dosage: UNK
     Route: 065
  726. HYDROMORPHONE HYDROCHLORIDE [Suspect]
     Active Substance: HYDROMORPHONE HYDROCHLORIDE
     Dosage: 1 MILLIGRAM, 1 EVERY 1 DAYS
     Route: 058
  727. HYDROMORPHONE HYDROCHLORIDE [Suspect]
     Active Substance: HYDROMORPHONE HYDROCHLORIDE
     Dosage: 6 MILLIGRAM 1 EVERY 6 HOURS
     Route: 058
  728. HYDROMORPHONE HYDROCHLORIDE [Suspect]
     Active Substance: HYDROMORPHONE HYDROCHLORIDE
     Dosage: 1 MILLIGRAM 1 EVERY 4 DAYS
     Route: 058
  729. HYDROMORPHONE HYDROCHLORIDE [Suspect]
     Active Substance: HYDROMORPHONE HYDROCHLORIDE
     Dosage: 1 MILLIGRAM 1 EVERY 1 DAYS
     Route: 058
  730. HYDROMORPHONE HYDROCHLORIDE [Suspect]
     Active Substance: HYDROMORPHONE HYDROCHLORIDE
     Dosage: 24 MILLIGRAM, 1 EVERY 6 HOURS
     Route: 058
  731. HYDROMORPHONE HYDROCHLORIDE [Suspect]
     Active Substance: HYDROMORPHONE HYDROCHLORIDE
     Dosage: 4 MILLIGRAM, 1 EVERY 6 HOURS
     Route: 058
  732. HYDROMORPHONE HYDROCHLORIDE [Suspect]
     Active Substance: HYDROMORPHONE HYDROCHLORIDE
     Dosage: 4 MILLIGRAM 1 EVERY 4 HOURS
     Route: 058
  733. HYDROMORPHONE HYDROCHLORIDE [Suspect]
     Active Substance: HYDROMORPHONE HYDROCHLORIDE
     Dosage: 6 MILLIGRAM 1 EVERY 6 HOURS
     Route: 058
  734. HYDROMORPHONE HYDROCHLORIDE [Suspect]
     Active Substance: HYDROMORPHONE HYDROCHLORIDE
     Dosage: UNK
     Route: 065
  735. HYDROMORPHONE HYDROCHLORIDE [Suspect]
     Active Substance: HYDROMORPHONE HYDROCHLORIDE
     Dosage: 6 MILLIGRAM 1 EVERY 4 HOURS
     Route: 058
  736. HYDROMORPHONE HYDROCHLORIDE [Suspect]
     Active Substance: HYDROMORPHONE HYDROCHLORIDE
     Dosage: 24 MILLIGRAM, 1 EVERY 4 HOURS
     Route: 058
  737. NOREPINEPHRINE BITARTRATE [Suspect]
     Active Substance: NOREPINEPHRINE BITARTRATE
     Indication: Stress
     Dosage: UNK
     Route: 048
  738. NOREPINEPHRINE BITARTRATE [Suspect]
     Active Substance: NOREPINEPHRINE BITARTRATE
     Indication: Off label use
     Dosage: 3 MILLIGRAM, 1 EVERY 1 DAYS
     Route: 048
  739. NOREPINEPHRINE BITARTRATE [Suspect]
     Active Substance: NOREPINEPHRINE BITARTRATE
     Indication: Intentional product misuse
     Dosage: 3 MILLIGRAM, OD
     Route: 048
  740. NOREPINEPHRINE BITARTRATE [Suspect]
     Active Substance: NOREPINEPHRINE BITARTRATE
     Dosage: UNK, 1 EVERY 1 DAYS
     Route: 048
  741. NOREPINEPHRINE BITARTRATE [Suspect]
     Active Substance: NOREPINEPHRINE BITARTRATE
     Dosage: 3 MILLIGRAM, OD
     Route: 048
  742. NOREPINEPHRINE BITARTRATE [Suspect]
     Active Substance: NOREPINEPHRINE BITARTRATE
     Dosage: UNK
     Route: 048
  743. NOREPINEPHRINE BITARTRATE [Suspect]
     Active Substance: NOREPINEPHRINE BITARTRATE
     Dosage: 1 MILLIGRAM
     Route: 065
  744. NOREPINEPHRINE BITARTRATE [Suspect]
     Active Substance: NOREPINEPHRINE BITARTRATE
     Dosage: UNK, 1 EVERY 1 DAYS
     Route: 042
  745. NOREPINEPHRINE BITARTRATE [Suspect]
     Active Substance: NOREPINEPHRINE BITARTRATE
     Dosage: 3 MILLIGRAM, 1 EVERY 1 DAYS
     Route: 048
  746. POTASSIUM CHLORIDE [Suspect]
     Active Substance: POTASSIUM CHLORIDE
     Indication: Constipation
     Dosage: 17 MILLIGRAM, 1 EVERY 1 DAYS
     Route: 048
  747. POTASSIUM CHLORIDE [Suspect]
     Active Substance: POTASSIUM CHLORIDE
     Dosage: 17 GRAM, 1 EVERY 1 DAYS
     Route: 048
  748. POTASSIUM CHLORIDE [Suspect]
     Active Substance: POTASSIUM CHLORIDE
     Dosage: UNK
     Route: 065
  749. POTASSIUM CHLORIDE [Suspect]
     Active Substance: POTASSIUM CHLORIDE
     Dosage: UNK
     Route: 065
  750. PREVACID [Suspect]
     Active Substance: LANSOPRAZOLE
     Indication: Antacid therapy
     Dosage: 30 MILLIGRAM, 1 EVERY 1 DAYS
     Route: 065
  751. PREVACID [Suspect]
     Active Substance: LANSOPRAZOLE
     Indication: Vitamin supplementation
     Dosage: UNK
     Route: 065
  752. PREVACID [Suspect]
     Active Substance: LANSOPRAZOLE
     Indication: Constipation
     Dosage: 30 MILLIGRAM, 1 EVERY 1 DAYS
     Route: 065
  753. PREVACID [Suspect]
     Active Substance: LANSOPRAZOLE
     Indication: Analgesic therapy
     Dosage: 30 MILLIGRAM, 1 EVERY 1 DAYS
     Route: 048
  754. PREVACID [Suspect]
     Active Substance: LANSOPRAZOLE
     Dosage: 30 MILLIGRAM
     Route: 065
  755. PREVACID [Suspect]
     Active Substance: LANSOPRAZOLE
     Dosage: 30 MILLIGRAM
     Route: 065
  756. PREVACID [Suspect]
     Active Substance: LANSOPRAZOLE
     Dosage: 30 MILLIGRAM
     Route: 065
  757. PREVACID [Suspect]
     Active Substance: LANSOPRAZOLE
     Dosage: 30 MILLIGRAM
     Route: 065
  758. PREVACID [Suspect]
     Active Substance: LANSOPRAZOLE
     Dosage: UNK
     Route: 048
  759. PREVACID [Suspect]
     Active Substance: LANSOPRAZOLE
     Dosage: UNK
     Route: 048
  760. PREVACID [Suspect]
     Active Substance: LANSOPRAZOLE
     Dosage: UNK
     Route: 048
  761. PREVACID [Suspect]
     Active Substance: LANSOPRAZOLE
     Dosage: UNK
     Route: 048
  762. SODIUM CITRATE [Suspect]
     Active Substance: SODIUM CITRATE
     Indication: Thrombosis
     Dosage: 2.5 MILLILITRE, PRN
     Route: 065
  763. SODIUM CITRATE [Suspect]
     Active Substance: SODIUM CITRATE
     Indication: Anticoagulant therapy
     Dosage: 2.5 MILLILITRE
     Route: 065
  764. SODIUM CITRATE [Suspect]
     Active Substance: SODIUM CITRATE
     Dosage: 2.5 MILLIGRAM, 1 EVERY 1 DAYS
     Route: 065
  765. SODIUM CITRATE [Suspect]
     Active Substance: SODIUM CITRATE
     Dosage: 2.5 MILLILITRE
     Route: 065
  766. SODIUM CITRATE [Suspect]
     Active Substance: SODIUM CITRATE
     Dosage: UNK
     Route: 065
  767. SODIUM CITRATE [Suspect]
     Active Substance: SODIUM CITRATE
     Dosage: 2 GRAM
     Route: 065
  768. SODIUM CITRATE [Suspect]
     Active Substance: SODIUM CITRATE
     Dosage: 2.5 MILLIGRAM, 1 EVERY 1 DAYS
     Route: 065
  769. SODIUM CITRATE [Suspect]
     Active Substance: SODIUM CITRATE
     Dosage: 2 GRAM, 1 EVERY 1 DAYS
     Route: 065
  770. SODIUM CITRATE [Suspect]
     Active Substance: SODIUM CITRATE
     Dosage: 2.5 MILLILITRE
     Route: 065
  771. TRISODIUM CITRATE DIHYDRATE [Suspect]
     Active Substance: TRISODIUM CITRATE DIHYDRATE
     Indication: Thrombosis
     Dosage: 2.5 MILLILITRE, PRN
     Route: 065
  772. LANTHANUM CARBONATE [Suspect]
     Active Substance: LANTHANUM CARBONATE
     Indication: Blood phosphorus increased
     Dosage: 500 MILLIGRAM, PRN
     Route: 048
  773. LANTHANUM CARBONATE [Suspect]
     Active Substance: LANTHANUM CARBONATE
     Indication: Off label use
     Dosage: 500 MILLIGRAM
     Route: 065
  774. LANTHANUM CARBONATE [Suspect]
     Active Substance: LANTHANUM CARBONATE
     Indication: Hyperphosphataemia
     Dosage: 500 MILLIGRAM
     Route: 048
  775. LANTHANUM CARBONATE [Suspect]
     Active Substance: LANTHANUM CARBONATE
     Dosage: 500 MILLIGRAM
     Route: 048
  776. LANTHANUM CARBONATE [Suspect]
     Active Substance: LANTHANUM CARBONATE
     Dosage: 500 MILLIGRAM, 1 EVERY 1 DAYS
     Route: 048
  777. LANTHANUM CARBONATE [Suspect]
     Active Substance: LANTHANUM CARBONATE
     Dosage: UNK
     Route: 065
  778. LANTHANUM CARBONATE [Suspect]
     Active Substance: LANTHANUM CARBONATE
     Dosage: 500 MILLIGRAM, 1 EVERY 1 DAYS
     Route: 048
  779. LANTHANUM CARBONATE [Suspect]
     Active Substance: LANTHANUM CARBONATE
     Dosage: 550 MILLIGRAM, 1 EVERY 1 DAYS
     Route: 048
  780. LANTHANUM CARBONATE [Suspect]
     Active Substance: LANTHANUM CARBONATE
     Dosage: 550 MILLIGRAM, 1 EVERY 1 DAYS
     Route: 048
  781. LANTHANUM CARBONATE [Suspect]
     Active Substance: LANTHANUM CARBONATE
     Dosage: 500 MILLIGRAM, 1 EVERY 1 DAYS
     Route: 048
  782. LANTHANUM CARBONATE [Suspect]
     Active Substance: LANTHANUM CARBONATE
     Dosage: 500 MILLIGRAM
     Route: 048
  783. LANTHANUM CARBONATE [Suspect]
     Active Substance: LANTHANUM CARBONATE
     Dosage: 500 MILLIGRAM, 1 EVERY 1 DAYS
     Route: 048
  784. LANTHANUM CARBONATE [Suspect]
     Active Substance: LANTHANUM CARBONATE
     Dosage: 500 MICROGRAM
     Route: 048
  785. LANTHANUM CARBONATE [Suspect]
     Active Substance: LANTHANUM CARBONATE
     Dosage: 500 MILLIGRAM
     Route: 048
  786. LANTHANUM CARBONATE [Suspect]
     Active Substance: LANTHANUM CARBONATE
     Dosage: 500 MICROGRAM, 1 EVERY 1 DAYS
     Route: 048
  787. LANTHANUM CARBONATE [Suspect]
     Active Substance: LANTHANUM CARBONATE
     Dosage: 500 MICROGRAM
     Route: 048
  788. LANTHANUM CARBONATE [Suspect]
     Active Substance: LANTHANUM CARBONATE
     Dosage: 500 MILLIGRAM, 1 EVERY 1 DAYS
     Route: 048
  789. LANTHANUM CARBONATE [Suspect]
     Active Substance: LANTHANUM CARBONATE
     Dosage: 500 MILLIGRAM
     Route: 048
  790. LANTHANUM CARBONATE [Suspect]
     Active Substance: LANTHANUM CARBONATE
     Dosage: UNK
     Route: 065
  791. LANTHANUM CARBONATE [Suspect]
     Active Substance: LANTHANUM CARBONATE
     Dosage: UNK
     Route: 065
  792. LANTHANUM CARBONATE [Suspect]
     Active Substance: LANTHANUM CARBONATE
     Dosage: UNK
     Route: 065
  793. LANTHANUM CARBONATE [Suspect]
     Active Substance: LANTHANUM CARBONATE
     Dosage: UNK
     Route: 065
  794. LANTHANUM CARBONATE [Suspect]
     Active Substance: LANTHANUM CARBONATE
     Dosage: 500 MILLIGRAM
     Route: 065
  795. LANTHANUM CARBONATE [Suspect]
     Active Substance: LANTHANUM CARBONATE
     Dosage: 500 MILLIGRAM
     Route: 065
  796. IPRATROPIUM BROMIDE [Suspect]
     Active Substance: IPRATROPIUM BROMIDE\IPRATROPIUM BROMIDE ANHYDROUS
     Indication: Dyspnoea
     Dosage: UNK, 1 EVERY 1 DAY
  797. IPRATROPIUM BROMIDE [Suspect]
     Active Substance: IPRATROPIUM BROMIDE\IPRATROPIUM BROMIDE ANHYDROUS
     Indication: Sleep disorder therapy
     Dosage: UNK, QID
  798. IPRATROPIUM BROMIDE [Suspect]
     Active Substance: IPRATROPIUM BROMIDE\IPRATROPIUM BROMIDE ANHYDROUS
     Indication: Intentional product misuse
     Dosage: UNK, 1 EVERY 1 DAY
  799. IPRATROPIUM BROMIDE [Suspect]
     Active Substance: IPRATROPIUM BROMIDE\IPRATROPIUM BROMIDE ANHYDROUS
     Dosage: UNK
     Route: 050
  800. IPRATROPIUM BROMIDE [Suspect]
     Active Substance: IPRATROPIUM BROMIDE\IPRATROPIUM BROMIDE ANHYDROUS
     Dosage: 1 DOSAGE FORM, 1 EVERY 6 HOURS
     Route: 050
  801. IPRATROPIUM BROMIDE [Suspect]
     Active Substance: IPRATROPIUM BROMIDE\IPRATROPIUM BROMIDE ANHYDROUS
     Dosage: UNK, 4 EVERY 1 DAYS
     Route: 050
  802. IPRATROPIUM BROMIDE [Suspect]
     Active Substance: IPRATROPIUM BROMIDE\IPRATROPIUM BROMIDE ANHYDROUS
     Dosage: UNK, 1 EVERY 6 HOURS
  803. IPRATROPIUM BROMIDE [Suspect]
     Active Substance: IPRATROPIUM BROMIDE\IPRATROPIUM BROMIDE ANHYDROUS
     Dosage: UNK, 1 EVERY 1 DAY
  804. IPRATROPIUM BROMIDE [Suspect]
     Active Substance: IPRATROPIUM BROMIDE\IPRATROPIUM BROMIDE ANHYDROUS
     Dosage: UNK, 1 EVERY 1 DAY
     Route: 050
  805. IPRATROPIUM BROMIDE [Suspect]
     Active Substance: IPRATROPIUM BROMIDE\IPRATROPIUM BROMIDE ANHYDROUS
     Dosage: UNK, 1 EVERY 1 DAY
     Route: 050
  806. IPRATROPIUM BROMIDE [Suspect]
     Active Substance: IPRATROPIUM BROMIDE\IPRATROPIUM BROMIDE ANHYDROUS
     Dosage: UNK, 1 EVERY 1 DAY
     Route: 050
  807. IPRATROPIUM BROMIDE [Suspect]
     Active Substance: IPRATROPIUM BROMIDE\IPRATROPIUM BROMIDE ANHYDROUS
     Dosage: 4 DOSAGE FORM, OD
  808. IPRATROPIUM BROMIDE [Suspect]
     Active Substance: IPRATROPIUM BROMIDE\IPRATROPIUM BROMIDE ANHYDROUS
     Dosage: UNK, 1 EVERY 1 DAY
  809. IPRATROPIUM BROMIDE [Suspect]
     Active Substance: IPRATROPIUM BROMIDE\IPRATROPIUM BROMIDE ANHYDROUS
     Dosage: UNK, 1 EVERY 1 DAY
  810. IPRATROPIUM BROMIDE [Suspect]
     Active Substance: IPRATROPIUM BROMIDE\IPRATROPIUM BROMIDE ANHYDROUS
     Dosage: 1 DOSAGE FORM, 1 EVERY 6 HOURS
     Route: 065
  811. IPRATROPIUM BROMIDE [Suspect]
     Active Substance: IPRATROPIUM BROMIDE\IPRATROPIUM BROMIDE ANHYDROUS
     Dosage: 1 DOSAGE FORM, 1 EVERY 8 HOURS
  812. IPRATROPIUM BROMIDE [Suspect]
     Active Substance: IPRATROPIUM BROMIDE\IPRATROPIUM BROMIDE ANHYDROUS
     Dosage: 1 DOSAGE FORM, 1 EVERY 1 DAY
  813. IPRATROPIUM BROMIDE [Suspect]
     Active Substance: IPRATROPIUM BROMIDE\IPRATROPIUM BROMIDE ANHYDROUS
     Dosage: UNK, 1 EVERY 1 DAY
     Route: 065
  814. IPRATROPIUM BROMIDE [Suspect]
     Active Substance: IPRATROPIUM BROMIDE\IPRATROPIUM BROMIDE ANHYDROUS
     Dosage: UNK, 4 EVERY 1 DAY
     Route: 065
  815. IPRATROPIUM BROMIDE [Suspect]
     Active Substance: IPRATROPIUM BROMIDE\IPRATROPIUM BROMIDE ANHYDROUS
     Dosage: UNK, 1 EVERY 1 DAY
     Route: 065
  816. IPRATROPIUM BROMIDE [Suspect]
     Active Substance: IPRATROPIUM BROMIDE\IPRATROPIUM BROMIDE ANHYDROUS
     Dosage: UNK, 1 EVERY 1 DAY
     Route: 065
  817. IPRATROPIUM BROMIDE [Suspect]
     Active Substance: IPRATROPIUM BROMIDE\IPRATROPIUM BROMIDE ANHYDROUS
     Dosage: UNK, 1 EVERY 1 DAY
     Route: 065
  818. IPRATROPIUM BROMIDE [Suspect]
     Active Substance: IPRATROPIUM BROMIDE\IPRATROPIUM BROMIDE ANHYDROUS
     Dosage: UNK, 1 EVERY 1 DAY
     Route: 065
  819. IPRATROPIUM BROMIDE [Suspect]
     Active Substance: IPRATROPIUM BROMIDE\IPRATROPIUM BROMIDE ANHYDROUS
     Dosage: UNK, 4 EVERY 1 DAY
     Route: 065
  820. IPRATROPIUM BROMIDE [Suspect]
     Active Substance: IPRATROPIUM BROMIDE\IPRATROPIUM BROMIDE ANHYDROUS
     Dosage: UNK, 4 EVERY 1 DAY
     Route: 065
  821. IPRATROPIUM BROMIDE [Suspect]
     Active Substance: IPRATROPIUM BROMIDE\IPRATROPIUM BROMIDE ANHYDROUS
     Dosage: UNK, 1 EVERY 1 DAY
     Route: 065
  822. IPRATROPIUM BROMIDE [Suspect]
     Active Substance: IPRATROPIUM BROMIDE\IPRATROPIUM BROMIDE ANHYDROUS
     Dosage: UNK, 4 EVERY 1 DAY
     Route: 065
  823. BETAMETHASONE DIPROPIONATE\BETAMETHASONE SODIUM PHOSPHATE [Suspect]
     Active Substance: BETAMETHASONE DIPROPIONATE\BETAMETHASONE SODIUM PHOSPHATE
     Indication: Swelling
     Dosage: UNK, 1 EVERY 1 DAYS
     Route: 061
  824. BETAMETHASONE DIPROPIONATE\BETAMETHASONE SODIUM PHOSPHATE [Suspect]
     Active Substance: BETAMETHASONE DIPROPIONATE\BETAMETHASONE SODIUM PHOSPHATE
     Dosage: UNK, 1 EVERY 1 DAYS
     Route: 061
  825. BETAMETHASONE DIPROPIONATE\BETAMETHASONE SODIUM PHOSPHATE [Suspect]
     Active Substance: BETAMETHASONE DIPROPIONATE\BETAMETHASONE SODIUM PHOSPHATE
     Dosage: UNK, 1 EVERY 1 DAYS
     Route: 061
  826. BETAMETHASONE DIPROPIONATE\BETAMETHASONE SODIUM PHOSPHATE [Suspect]
     Active Substance: BETAMETHASONE DIPROPIONATE\BETAMETHASONE SODIUM PHOSPHATE
     Dosage: UNK, 1 EVERY 1 DAYS
     Route: 061
  827. BETAMETHASONE DIPROPIONATE\BETAMETHASONE SODIUM PHOSPHATE [Suspect]
     Active Substance: BETAMETHASONE DIPROPIONATE\BETAMETHASONE SODIUM PHOSPHATE
     Dosage: UNK, 1 EVERY 1 DAYS
     Route: 061
  828. BETAMETHASONE DIPROPIONATE\BETAMETHASONE SODIUM PHOSPHATE [Suspect]
     Active Substance: BETAMETHASONE DIPROPIONATE\BETAMETHASONE SODIUM PHOSPHATE
     Dosage: UNK, 1 EVERY 1 DAYS
     Route: 061
  829. BETAMETHASONE DIPROPIONATE\BETAMETHASONE SODIUM PHOSPHATE [Suspect]
     Active Substance: BETAMETHASONE DIPROPIONATE\BETAMETHASONE SODIUM PHOSPHATE
     Dosage: UNK, 1 EVERY 1 DAYS
     Route: 065
  830. BETAMETHASONE DIPROPIONATE\BETAMETHASONE SODIUM PHOSPHATE [Suspect]
     Active Substance: BETAMETHASONE DIPROPIONATE\BETAMETHASONE SODIUM PHOSPHATE
     Dosage: UNK, 1 EVERY 1 DAYS
     Route: 065
  831. BETAMETHASONE SODIUM PHOSPHATE [Suspect]
     Active Substance: BETAMETHASONE SODIUM PHOSPHATE
     Indication: Swelling
     Dosage: 10 MILLIGRAM
     Route: 061
  832. BETAMETHASONE SODIUM PHOSPHATE [Suspect]
     Active Substance: BETAMETHASONE SODIUM PHOSPHATE
     Indication: Off label use
     Dosage: UNK
     Route: 065
  833. BETAMETHASONE SODIUM PHOSPHATE [Suspect]
     Active Substance: BETAMETHASONE SODIUM PHOSPHATE
     Dosage: 1 DOSAGE FORM
     Route: 061
  834. BETAMETHASONE SODIUM PHOSPHATE [Suspect]
     Active Substance: BETAMETHASONE SODIUM PHOSPHATE
     Dosage: UNK
     Route: 061
  835. BETAMETHASONE SODIUM PHOSPHATE [Suspect]
     Active Substance: BETAMETHASONE SODIUM PHOSPHATE
     Dosage: UNK, 1 EVERY 1 DAYS
     Route: 061
  836. BISMUTH SUBNITRATE [Suspect]
     Active Substance: BISMUTH SUBNITRATE
     Indication: Constipation
     Dosage: 133 MILLILITER
     Route: 065
  837. BISMUTH SUBNITRATE [Suspect]
     Active Substance: BISMUTH SUBNITRATE
     Dosage: UNK
     Route: 065
  838. BISMUTH SUBNITRATE [Suspect]
     Active Substance: BISMUTH SUBNITRATE
     Dosage: 133 MILLILITER
     Route: 065
  839. BISMUTH SUBNITRATE [Suspect]
     Active Substance: BISMUTH SUBNITRATE
     Dosage: 133 MILLIGRAM, PRN
     Route: 054
  840. BISMUTH SUBNITRATE [Suspect]
     Active Substance: BISMUTH SUBNITRATE
     Dosage: 133 MILLIGRAM, PRN
     Route: 065
  841. BISMUTH SUBNITRATE\MAGNESIUM OXIDE\MAGNESIUM TRISILICATE\SODIUM PHOSPH [Suspect]
     Active Substance: BISMUTH SUBNITRATE\MAGNESIUM OXIDE\MAGNESIUM TRISILICATE\SODIUM PHOSPHATE, MONOBASIC, ANHYDROUS
     Indication: Constipation
     Dosage: 133 MILLILITER
     Route: 054
  842. HERBALS [Suspect]
     Active Substance: HERBALS
     Indication: Nutritional supplementation
     Dosage: 12.5 GRAM
     Route: 042
  843. HERBALS [Suspect]
     Active Substance: HERBALS
     Dosage: 12.5 GRAM, PRN (AS REQUIRED)
     Route: 042
  844. HERBALS [Suspect]
     Active Substance: HERBALS
     Dosage: UNK
     Route: 065
  845. DIPYRONE [Suspect]
     Active Substance: DIPYRONE
     Indication: Vitamin supplementation
     Dosage: 5 MILLIGRAM
     Route: 042
  846. DIPYRONE [Suspect]
     Active Substance: DIPYRONE
     Indication: Intentional product misuse
     Dosage: 5 MILLIGRAM, 1 EVERY 1 DAYS
     Route: 042
  847. DIPYRONE [Suspect]
     Active Substance: DIPYRONE
     Dosage: UNK
     Route: 042
  848. DIPYRONE [Suspect]
     Active Substance: DIPYRONE
     Dosage: UNK
     Route: 042
  849. DIPYRONE [Suspect]
     Active Substance: DIPYRONE
     Dosage: UNK
     Route: 065
  850. DIPYRONE [Suspect]
     Active Substance: DIPYRONE
     Dosage: 5 MILLIGRAM
     Route: 042
  851. DIPYRONE [Suspect]
     Active Substance: DIPYRONE
     Dosage: 5 MILLIGRAM, 1 EVERY 1 DAYS
     Route: 042
  852. DIPYRONE [Suspect]
     Active Substance: DIPYRONE
     Dosage: 5 MILLIGRAM, 1 EVERY 1 DAYS
     Route: 042
  853. FENOTEROL\IPRATROPIUM [Suspect]
     Active Substance: FENOTEROL\IPRATROPIUM
     Indication: Dyspnoea
     Dosage: UNK
     Route: 065
  854. FENOTEROL\IPRATROPIUM [Suspect]
     Active Substance: FENOTEROL\IPRATROPIUM
     Dosage: 4 INTERNATIONAL UNIT, OD
     Route: 065
  855. FENOTEROL\IPRATROPIUM [Suspect]
     Active Substance: FENOTEROL\IPRATROPIUM
     Dosage: 1 DOSAGE FORM, TID
     Route: 050
  856. FENOTEROL\IPRATROPIUM [Suspect]
     Active Substance: FENOTEROL\IPRATROPIUM
     Dosage: 4 INTERNATIONAL UNIT, OD
     Route: 065
  857. FENOTEROL\IPRATROPIUM [Suspect]
     Active Substance: FENOTEROL\IPRATROPIUM
     Dosage: UNK
     Route: 065
  858. FENOTEROL\IPRATROPIUM [Suspect]
     Active Substance: FENOTEROL\IPRATROPIUM
     Dosage: 1 DOSAGE FORM, OD
     Route: 065
  859. FENOTEROL\IPRATROPIUM [Suspect]
     Active Substance: FENOTEROL\IPRATROPIUM
     Dosage: 1 DOSAGE FORM, OD
     Route: 065
  860. FENOTEROL\IPRATROPIUM [Suspect]
     Active Substance: FENOTEROL\IPRATROPIUM
     Dosage: UNK UNK, OD
     Route: 065
  861. FENOTEROL\IPRATROPIUM [Suspect]
     Active Substance: FENOTEROL\IPRATROPIUM
     Dosage: 1 DOSAGE FORM 1 EVERY 8 HOURS
     Route: 050
  862. FENOTEROL\IPRATROPIUM [Suspect]
     Active Substance: FENOTEROL\IPRATROPIUM
     Dosage: UNK UNK, OD
     Route: 065
  863. FENOTEROL\IPRATROPIUM [Suspect]
     Active Substance: FENOTEROL\IPRATROPIUM
     Dosage: UNK UNK, OD
     Route: 065
  864. FRAGMIN [Suspect]
     Active Substance: DALTEPARIN SODIUM
     Indication: Pulmonary embolism
     Dosage: 2.5 MILLILITER
     Route: 065
  865. FRAGMIN [Suspect]
     Active Substance: DALTEPARIN SODIUM
     Indication: Thrombosis
     Dosage: UNK
     Route: 048
  866. FRAGMIN [Suspect]
     Active Substance: DALTEPARIN SODIUM
     Dosage: 2.5 MILLILITER, SOLUTION INTRAVENOUS
     Route: 065
  867. FRAGMIN [Suspect]
     Active Substance: DALTEPARIN SODIUM
     Dosage: 2.5 MILLILITER
     Route: 048
  868. FRAGMIN [Suspect]
     Active Substance: DALTEPARIN SODIUM
     Dosage: UNK
     Route: 048
  869. DEXTROSE\HEPARIN SODIUM [Suspect]
     Active Substance: DEXTROSE\HEPARIN SODIUM
     Indication: Anticoagulant therapy
     Dosage: 50 MILLILITER
     Route: 065
  870. DEXTROSE\HEPARIN SODIUM [Suspect]
     Active Substance: DEXTROSE\HEPARIN SODIUM
     Indication: Off label use
     Dosage: 250 MILLILITER
     Route: 042
  871. DEXTROSE\HEPARIN SODIUM [Suspect]
     Active Substance: DEXTROSE\HEPARIN SODIUM
     Indication: Intentional product misuse
     Dosage: 50 MILLILITER
     Route: 042
  872. DEXTROSE\HEPARIN SODIUM [Suspect]
     Active Substance: DEXTROSE\HEPARIN SODIUM
     Dosage: 50 MILLILITER, 1 EVERY 1 DAYS
     Route: 042
  873. DEXTROSE\HEPARIN SODIUM [Suspect]
     Active Substance: DEXTROSE\HEPARIN SODIUM
     Dosage: 50 MILLILITER
     Route: 042
  874. DEXTROSE\HEPARIN SODIUM [Suspect]
     Active Substance: DEXTROSE\HEPARIN SODIUM
     Dosage: 250 MILLILITER, 1 EVERY 1 DAYS
     Route: 042
  875. DEXTROSE\HEPARIN SODIUM [Suspect]
     Active Substance: DEXTROSE\HEPARIN SODIUM
     Dosage: 250 MILLILITER
     Route: 042
  876. DEXTROSE\HEPARIN SODIUM [Suspect]
     Active Substance: DEXTROSE\HEPARIN SODIUM
     Dosage: 50 MILLILITER
     Route: 042
  877. DEXTROSE\HEPARIN SODIUM [Suspect]
     Active Substance: DEXTROSE\HEPARIN SODIUM
     Dosage: 50 MILLILITER 1 EVERY 1 DAYS
     Route: 042
  878. DEXTROSE\HEPARIN SODIUM [Suspect]
     Active Substance: DEXTROSE\HEPARIN SODIUM
     Dosage: 250 MILLILITER
     Route: 042
  879. DEXTROSE\HEPARIN SODIUM [Suspect]
     Active Substance: DEXTROSE\HEPARIN SODIUM
     Dosage: UNK
     Route: 065
  880. DEXTROSE\HEPARIN SODIUM [Suspect]
     Active Substance: DEXTROSE\HEPARIN SODIUM
     Dosage: 50 MILLILITER 1 EVERY 1 DAYS
     Route: 042
  881. DEXTROSE\SODIUM CHLORIDE [Suspect]
     Active Substance: DEXTROSE\SODIUM CHLORIDE
     Indication: Nutritional supplementation
     Dosage: 12.5 MILLIGRAM
     Route: 042
  882. DEXTROSE\SODIUM CHLORIDE [Suspect]
     Active Substance: DEXTROSE\SODIUM CHLORIDE
     Indication: Off label use
     Dosage: 12.5 MILLIGRAM, 1 EVERY 1 DAYS
     Route: 042
  883. DEXTROSE\SODIUM CHLORIDE [Suspect]
     Active Substance: DEXTROSE\SODIUM CHLORIDE
     Indication: Intentional product misuse
     Dosage: 12.5 GRAM
     Route: 042
  884. DEXTROSE\SODIUM CHLORIDE [Suspect]
     Active Substance: DEXTROSE\SODIUM CHLORIDE
     Dosage: UNK
     Route: 065
  885. DEXTROSE\SODIUM CHLORIDE [Suspect]
     Active Substance: DEXTROSE\SODIUM CHLORIDE
     Dosage: 12.5 GRAM, 1 EVERY 1 DAYS
     Route: 042
  886. DEXTROSE\SODIUM CHLORIDE [Suspect]
     Active Substance: DEXTROSE\SODIUM CHLORIDE
     Dosage: 12.5 GRAM
     Route: 042
  887. DEXTROSE\SODIUM CHLORIDE [Suspect]
     Active Substance: DEXTROSE\SODIUM CHLORIDE
     Dosage: 12.5 GRAM, EVERY 1 DAYS
     Route: 042
  888. DEXTROSE\SODIUM CHLORIDE [Suspect]
     Active Substance: DEXTROSE\SODIUM CHLORIDE
     Dosage: UNK
     Route: 042
  889. DEXTROSE\SODIUM CHLORIDE [Suspect]
     Active Substance: DEXTROSE\SODIUM CHLORIDE
     Dosage: 12.5 GRAM, EVERY 1 DAYS
     Route: 042
  890. DEXTROSE\SODIUM CHLORIDE [Suspect]
     Active Substance: DEXTROSE\SODIUM CHLORIDE
     Dosage: UNK
     Route: 042
  891. DEXTROSE\SODIUM CHLORIDE [Suspect]
     Active Substance: DEXTROSE\SODIUM CHLORIDE
     Dosage: 12.5 MILLIGRAM
     Route: 042
  892. HEPARIN CALCIUM [Suspect]
     Active Substance: HEPARIN CALCIUM
     Indication: Anticoagulant therapy
     Dosage: 50 MILLILITER
     Route: 042
  893. HEPARIN CALCIUM [Suspect]
     Active Substance: HEPARIN CALCIUM
     Dosage: UNK
     Route: 065
  894. HEPARIN CALCIUM [Suspect]
     Active Substance: HEPARIN CALCIUM
     Dosage: 250 MILLILITRE
     Route: 042
  895. HEPARIN CALCIUM [Suspect]
     Active Substance: HEPARIN CALCIUM
     Dosage: 50 MILLILITER, QD
     Route: 042
  896. HEPARIN CALCIUM [Suspect]
     Active Substance: HEPARIN CALCIUM
     Dosage: 250 MILLILITRE, PRN
     Route: 042
  897. HEPARIN CALCIUM [Suspect]
     Active Substance: HEPARIN CALCIUM
     Dosage: 50 MILLILITER, QD
     Route: 042
  898. HEPARIN CALCIUM [Suspect]
     Active Substance: HEPARIN CALCIUM
     Dosage: 50 MILLILITER, QD
     Route: 042
  899. HEPARIN CALCIUM [Suspect]
     Active Substance: HEPARIN CALCIUM
     Dosage: 50 MILLILITER
     Route: 042
  900. HEPARIN CALCIUM [Suspect]
     Active Substance: HEPARIN CALCIUM
     Dosage: 50 MILLILITER, PRN
     Route: 042
  901. HEPARIN CALCIUM [Suspect]
     Active Substance: HEPARIN CALCIUM
     Dosage: 50 MILLILITER, AS REQUIRED
     Route: 065
  902. INSULIN PORK [Suspect]
     Active Substance: INSULIN PORK\INSULIN PURIFIED PORK
     Indication: Diabetes mellitus
     Dosage: UNK
     Route: 065
  903. LYPRESSIN [Suspect]
     Active Substance: LYPRESSIN
     Indication: Drug therapy
     Dosage: UNK
     Route: 017
  904. LYPRESSIN [Suspect]
     Active Substance: LYPRESSIN
     Dosage: 250 MILLILITER, OD
     Route: 042
  905. LYPRESSIN [Suspect]
     Active Substance: LYPRESSIN
     Dosage: UNK
     Route: 042
  906. LYPRESSIN [Suspect]
     Active Substance: LYPRESSIN
     Dosage: 50 MILLILITER, QD
     Route: 042
  907. LYPRESSIN [Suspect]
     Active Substance: LYPRESSIN
     Dosage: UNK
     Route: 042
  908. LYPRESSIN [Suspect]
     Active Substance: LYPRESSIN
     Dosage: UNK
     Route: 042
  909. MAGNESIUM CARBONATE\MAGNESIUM TRISILICATE\SODIUM BICARBONATE [Suspect]
     Active Substance: MAGNESIUM CARBONATE\MAGNESIUM TRISILICATE\SODIUM BICARBONATE
     Indication: Constipation
     Dosage: 133 MILLILITER
     Route: 065
  910. MAGNESIUM OXIDE [Suspect]
     Active Substance: MAGNESIUM OXIDE
     Indication: Constipation
     Dosage: 133 MILLILITER
     Route: 065
  911. MAGNESIUM OXIDE [Suspect]
     Active Substance: MAGNESIUM OXIDE
     Dosage: UNK
     Route: 065
  912. MALTOSE [Suspect]
     Active Substance: MALTOSE
     Indication: Nutritional supplementation
     Dosage: 12.5 MILLIGRAM
     Route: 042
  913. MALTOSE [Suspect]
     Active Substance: MALTOSE
     Dosage: 12.5 GRAM
     Route: 042
  914. MALTOSE [Suspect]
     Active Substance: MALTOSE
     Dosage: 12 MILLIGRAM
     Route: 042
  915. MALTOSE [Suspect]
     Active Substance: MALTOSE
     Dosage: UNK
     Route: 065
  916. SODIUM PHOSPHATE, MONOBASIC [Suspect]
     Active Substance: SODIUM PHOSPHATE, MONOBASIC
     Indication: Constipation
     Dosage: 133 MILLILITRE
     Route: 065
  917. SODIUM PHOSPHATE, MONOBASIC [Suspect]
     Active Substance: SODIUM PHOSPHATE, MONOBASIC
     Dosage: 133 MILLILITRE
     Route: 054
  918. PENTOSAN POLYSULFATE SODIUM [Suspect]
     Active Substance: PENTOSAN POLYSULFATE SODIUM
     Indication: Anticoagulant therapy
     Dosage: 250 MILLILITER, OD
     Route: 042
  919. PENTOSAN POLYSULFATE SODIUM [Suspect]
     Active Substance: PENTOSAN POLYSULFATE SODIUM
     Dosage: 50 MILLILITER, OD
     Route: 042
  920. OSELTAMIVIR PHOSPHATE [Suspect]
     Active Substance: OSELTAMIVIR PHOSPHATE
     Indication: Product used for unknown indication
     Dosage: 133 MILLILITRE
     Route: 054
  921. OSELTAMIVIR PHOSPHATE [Suspect]
     Active Substance: OSELTAMIVIR PHOSPHATE
     Dosage: UNK
     Route: 065
  922. OTRIVIN [Suspect]
     Active Substance: XYLOMETAZOLINE
     Indication: Dyspnoea
     Dosage: UNK
  923. OTRIVIN [Suspect]
     Active Substance: XYLOMETAZOLINE
     Dosage: UNK, 1 EVERY 1 DAY
     Route: 065
  924. HERBALS\PAULLINIA CUPANA SEED [Suspect]
     Active Substance: HERBALS\PAULLINIA CUPANA SEED
     Indication: Nutritional supplementation
     Dosage: 12.5 MILLIGRAM
     Route: 042
  925. HERBALS\PAULLINIA CUPANA SEED [Suspect]
     Active Substance: HERBALS\PAULLINIA CUPANA SEED
     Dosage: 12.5 MILLIGRAM
     Route: 042
  926. HERBALS\PAULLINIA CUPANA SEED [Suspect]
     Active Substance: HERBALS\PAULLINIA CUPANA SEED
     Dosage: UNK
     Route: 065
  927. POLYETHYLENE GLYCOL 4000 [Suspect]
     Active Substance: POLYETHYLENE GLYCOL 4000
     Indication: Constipation
     Dosage: 17 MILLIGRAM, OD
     Route: 048
  928. POLYETHYLENE GLYCOL 4000 [Suspect]
     Active Substance: POLYETHYLENE GLYCOL 4000
     Dosage: UNK
     Route: 048
  929. POLYETHYLENE GLYCOL 4000 [Suspect]
     Active Substance: POLYETHYLENE GLYCOL 4000
     Dosage: 17 MILLIGRAM
     Route: 048
  930. POLYETHYLENE GLYCOL 4000 [Suspect]
     Active Substance: POLYETHYLENE GLYCOL 4000
     Dosage: 17 GRAM, OD
     Route: 048
  931. POLYETHYLENE GLYCOL 4000 [Suspect]
     Active Substance: POLYETHYLENE GLYCOL 4000
     Dosage: 17 GRAM, OD
     Route: 048
  932. POLYETHYLENE GLYCOL 4000 [Suspect]
     Active Substance: POLYETHYLENE GLYCOL 4000
     Dosage: UNK
     Route: 065
  933. POLYETHYLENE GLYCOL 4000 [Suspect]
     Active Substance: POLYETHYLENE GLYCOL 4000
     Dosage: 2.5 MILLILITRE
     Route: 042
  934. POLYETHYLENE GLYCOL 4000 [Suspect]
     Active Substance: POLYETHYLENE GLYCOL 4000
     Dosage: UNK, QD
     Route: 048
  935. POLYETHYLENE GLYCOL 4000 [Suspect]
     Active Substance: POLYETHYLENE GLYCOL 4000
     Dosage: 1 DOSAGE FORM, 1 EVERY 6 HOURS
  936. POLYETHYLENE GLYCOL 4000 [Suspect]
     Active Substance: POLYETHYLENE GLYCOL 4000
     Dosage: 3 MILLIGRAM, QW
     Route: 048
  937. POTASSIUM CHLORATE [Suspect]
     Active Substance: POTASSIUM CHLORATE
     Indication: Product used for unknown indication
     Dosage: UNK
     Route: 065
  938. ALBUTEROL SULFATE [Suspect]
     Active Substance: ALBUTEROL SULFATE
     Indication: Chronic obstructive pulmonary disease
     Dosage: UNK, QD
     Route: 050
  939. ALBUTEROL SULFATE [Suspect]
     Active Substance: ALBUTEROL SULFATE
     Dosage: UNK, 4 EVERY 1 DAYS
  940. ALBUTEROL SULFATE [Suspect]
     Active Substance: ALBUTEROL SULFATE
     Dosage: UNK
     Route: 065
  941. TRELEGY ELLIPTA [Suspect]
     Active Substance: FLUTICASONE FUROATE\UMECLIDINIUM BROMIDE\VILANTEROL TRIFENATATE
     Indication: Off label use
     Dosage: UNK
  942. TRELEGY ELLIPTA [Suspect]
     Active Substance: FLUTICASONE FUROATE\UMECLIDINIUM BROMIDE\VILANTEROL TRIFENATATE
     Indication: Intentional product misuse
     Dosage: UNK
     Route: 065
  943. .ALPHA.-TOCOPHEROL [Suspect]
     Active Substance: .ALPHA.-TOCOPHEROL
     Indication: Nutritional supplementation
     Dosage: 12.5 GRAM
     Route: 042
  944. .ALPHA.-TOCOPHEROL [Suspect]
     Active Substance: .ALPHA.-TOCOPHEROL
     Dosage: 12.5 GRAM
     Route: 042
  945. VITAMIN K1 [Suspect]
     Active Substance: PHYTONADIONE
     Indication: Vitamin supplementation
     Dosage: 5 MILLIGRAM
     Route: 042
  946. VITAMIN K1 [Suspect]
     Active Substance: PHYTONADIONE
     Indication: Off label use
     Dosage: 5 MILLIGRAM
     Route: 042
  947. VITAMIN K1 [Suspect]
     Active Substance: PHYTONADIONE
     Dosage: 5 MILLIGRAM, 1 EVERY 1 DAYS
     Route: 042
  948. VITAMIN K1 [Suspect]
     Active Substance: PHYTONADIONE
     Dosage: 5 MILLIGRAM,  1 EVERY 1 DAYS
     Route: 017
  949. VITAMIN K1 [Suspect]
     Active Substance: PHYTONADIONE
     Dosage: 5 MILLIGRAM,  1 EVERY 1 DAYS
     Route: 065
  950. VITAMIN K1 [Suspect]
     Active Substance: PHYTONADIONE
     Dosage: 5 MILLIGRAM,  1 EVERY 1 DAYS
     Route: 065
  951. VITAMIN K1 [Suspect]
     Active Substance: PHYTONADIONE
     Dosage: 5 MILLIGRAM
     Route: 065
  952. XANTOFYL PALMITATE [Suspect]
     Active Substance: XANTOFYL PALMITATE
     Indication: Nutritional supplementation
     Dosage: 12.5 GRAM
     Route: 042
  953. XANTOFYL PALMITATE [Suspect]
     Active Substance: XANTOFYL PALMITATE
     Indication: Off label use
     Dosage: 12.5 GRAM
     Route: 042
  954. XANTOFYL PALMITATE [Suspect]
     Active Substance: XANTOFYL PALMITATE
     Indication: Intentional product misuse
     Dosage: 5 MILLIGRAM, QD
     Route: 042
  955. XANTOFYL PALMITATE [Suspect]
     Active Substance: XANTOFYL PALMITATE
     Dosage: 12.5 GRAM
     Route: 065
  956. XANTOFYL PALMITATE [Suspect]
     Active Substance: XANTOFYL PALMITATE
     Dosage: 12.5 GRAM
     Route: 065
  957. ZOCOR [Suspect]
     Active Substance: SIMVASTATIN
     Indication: Blood cholesterol increased
     Dosage: 40 MILLIGRAM, 1 EVERY 1 DAYS
     Route: 048
  958. SUCROSE [Suspect]
     Active Substance: SUCROSE
     Indication: Iron deficiency
     Dosage: 125 MILLIGRAM 1 EVERY 4 WEEKS
     Route: 042
  959. SUCROSE [Suspect]
     Active Substance: SUCROSE
     Dosage: 12 MILLIGRAM (1 EVERY 1 MONTHS)
     Route: 042
  960. WARFARIN SODIUM [Suspect]
     Active Substance: WARFARIN SODIUM
     Indication: Thrombosis
     Dosage: 2 GRAM, OD
     Route: 048
  961. WARFARIN SODIUM [Suspect]
     Active Substance: WARFARIN SODIUM
     Indication: Intentional product misuse
     Dosage: UNK
     Route: 065
  962. WARFARIN SODIUM [Suspect]
     Active Substance: WARFARIN SODIUM
     Indication: Off label use
     Dosage: 2 MILLIGRAM
     Route: 048
  963. WARFARIN SODIUM [Suspect]
     Active Substance: WARFARIN SODIUM
     Dosage: 2 MILLIGRAM, QD
     Route: 048
  964. WARFARIN SODIUM [Suspect]
     Active Substance: WARFARIN SODIUM
     Dosage: 2 GRAM, OD
     Route: 048
  965. WARFARIN SODIUM [Suspect]
     Active Substance: WARFARIN SODIUM
     Dosage: 2 GRAM, OD
     Route: 048
  966. WARFARIN SODIUM [Suspect]
     Active Substance: WARFARIN SODIUM
     Dosage: 2.0 MILLILITER, OD
     Route: 048
  967. WARFARIN SODIUM [Suspect]
     Active Substance: WARFARIN SODIUM
     Dosage: 2 MILLILITER, OD
     Route: 048
  968. WARFARIN SODIUM [Suspect]
     Active Substance: WARFARIN SODIUM
     Dosage: 2 MILLIGRAM, OD
     Route: 048
  969. IPRATROPIUM BROMIDE\XYLOMETAZOLINE HYDROCHLORIDE [Suspect]
     Active Substance: IPRATROPIUM BROMIDE\XYLOMETAZOLINE HYDROCHLORIDE
     Indication: Dyspnoea
     Dosage: UNK
     Route: 050
  970. IPRATROPIUM BROMIDE\XYLOMETAZOLINE HYDROCHLORIDE [Suspect]
     Active Substance: IPRATROPIUM BROMIDE\XYLOMETAZOLINE HYDROCHLORIDE
     Dosage: UNK
     Route: 050
  971. IPRATROPIUM BROMIDE\XYLOMETAZOLINE HYDROCHLORIDE [Suspect]
     Active Substance: IPRATROPIUM BROMIDE\XYLOMETAZOLINE HYDROCHLORIDE
     Dosage: 1 DOSAGE FORM, OD
     Route: 065
  972. ALUMINUM HYDROXIDE\MAGNESIUM HYDROXIDE [Suspect]
     Active Substance: ALUMINUM HYDROXIDE\MAGNESIUM HYDROXIDE
     Indication: Constipation
     Dosage: 133 MILLILITRE
     Route: 054
  973. ALUMINUM HYDROXIDE\MAGNESIUM HYDROXIDE [Suspect]
     Active Substance: ALUMINUM HYDROXIDE\MAGNESIUM HYDROXIDE
     Dosage: 133 MILLILITRE, PRN (AS REQUIRED)
     Route: 054
  974. ALUMINUM HYDROXIDE\MAGNESIUM HYDROXIDE [Suspect]
     Active Substance: ALUMINUM HYDROXIDE\MAGNESIUM HYDROXIDE
     Dosage: 133 MILLILITRE
     Route: 054
  975. ALUMINUM HYDROXIDE\MAGNESIUM HYDROXIDE [Suspect]
     Active Substance: ALUMINUM HYDROXIDE\MAGNESIUM HYDROXIDE
     Dosage: 133 MILLILITRE
     Route: 065
  976. ALUMINUM HYDROXIDE\MAGNESIUM HYDROXIDE [Suspect]
     Active Substance: ALUMINUM HYDROXIDE\MAGNESIUM HYDROXIDE
     Dosage: 133 MILLILITRE
     Route: 065
  977. ALUMINUM HYDROXIDE\MAGNESIUM HYDROXIDE [Suspect]
     Active Substance: ALUMINUM HYDROXIDE\MAGNESIUM HYDROXIDE
     Dosage: 133 MILLILITRE
     Route: 054
  978. AMMONIUM CHLORIDE\CHLORPHENIRAMINE\SODIUM CITRATE [Suspect]
     Active Substance: AMMONIUM CHLORIDE\CHLORPHENIRAMINE\SODIUM CITRATE
     Indication: Thrombosis
     Dosage: 2.5 MILLILITRE
     Route: 048
  979. AMMONIUM CHLORIDE\CHLORPHENIRAMINE\SODIUM CITRATE [Suspect]
     Active Substance: AMMONIUM CHLORIDE\CHLORPHENIRAMINE\SODIUM CITRATE
     Dosage: 2.5 MILLILITRE 1 EVERY 1 DAYS
     Route: 048
  980. AMMONIUM CHLORIDE\CHLORPHENIRAMINE\SODIUM CITRATE [Suspect]
     Active Substance: AMMONIUM CHLORIDE\CHLORPHENIRAMINE\SODIUM CITRATE
     Dosage: 2.5 MILLILITRE, PRN
     Route: 065
  981. AMMONIUM CHLORIDE\CHLORPHENIRAMINE\SODIUM CITRATE [Suspect]
     Active Substance: AMMONIUM CHLORIDE\CHLORPHENIRAMINE\SODIUM CITRATE
     Dosage: 2.5 MILLIGRAM
     Route: 048
  982. AMMONIUM CHLORIDE\CHLORPHENIRAMINE\SODIUM CITRATE [Suspect]
     Active Substance: AMMONIUM CHLORIDE\CHLORPHENIRAMINE\SODIUM CITRATE
     Dosage: 2.5 MILLIGRAM
     Route: 048
  983. AMMONIUM CHLORIDE\CHLORPHENIRAMINE\SODIUM CITRATE [Suspect]
     Active Substance: AMMONIUM CHLORIDE\CHLORPHENIRAMINE\SODIUM CITRATE
     Dosage: 2.5 MILLIGRAM
     Route: 048
  984. CALCIUM CHLORIDE\DEXTROSE\POTASSIUM CHLORIDE\SODIUM CHLORIDE [Suspect]
     Active Substance: CALCIUM CHLORIDE\DEXTROSE\POTASSIUM CHLORIDE\SODIUM CHLORIDE
     Indication: Nutritional supplementation
     Dosage: UNK
     Route: 065
  985. CALCIUM CHLORIDE\DEXTROSE\POTASSIUM CHLORIDE\SODIUM CHLORIDE [Suspect]
     Active Substance: CALCIUM CHLORIDE\DEXTROSE\POTASSIUM CHLORIDE\SODIUM CHLORIDE
     Dosage: 12.5 MILLIGRAM
     Route: 042
  986. CALCIUM CHLORIDE\DEXTROSE\POTASSIUM CHLORIDE\SODIUM CHLORIDE [Suspect]
     Active Substance: CALCIUM CHLORIDE\DEXTROSE\POTASSIUM CHLORIDE\SODIUM CHLORIDE
     Dosage: 12.5 MILLIGRAM, 1 EVERY 1 DAYS
     Route: 065
  987. CALCIUM CHLORIDE\DEXTROSE\POTASSIUM CHLORIDE\SODIUM CHLORIDE [Suspect]
     Active Substance: CALCIUM CHLORIDE\DEXTROSE\POTASSIUM CHLORIDE\SODIUM CHLORIDE
     Dosage: 12.5 MILLIGRAM
     Route: 065
  988. CALCIUM CHLORIDE\DEXTROSE\POTASSIUM CHLORIDE\SODIUM CHLORIDE [Suspect]
     Active Substance: CALCIUM CHLORIDE\DEXTROSE\POTASSIUM CHLORIDE\SODIUM CHLORIDE
     Dosage: 12.5 GRAM
     Route: 065
  989. MELATONIN [Suspect]
     Active Substance: MELATONIN
     Indication: Sleep disorder therapy
     Dosage: UNK
     Route: 048
  990. MELATONIN [Suspect]
     Active Substance: MELATONIN
     Indication: Intentional product misuse
     Dosage: 3 MILLIGRAM, 1 EVERY 1 DAY
     Route: 048
  991. MELATONIN [Suspect]
     Active Substance: MELATONIN
     Indication: Off label use
     Dosage: UNK
     Route: 065
  992. MELATONIN [Suspect]
     Active Substance: MELATONIN
     Dosage: UNK
     Route: 065
  993. MELATONIN [Suspect]
     Active Substance: MELATONIN
     Dosage: UNK
     Route: 065
  994. MELATONIN [Suspect]
     Active Substance: MELATONIN
     Dosage: 3 MILLIGRAM, 1 EVERY 1 DAY
     Route: 048
  995. MELATONIN [Suspect]
     Active Substance: MELATONIN
     Dosage: UNK
     Route: 048
  996. MELATONIN [Suspect]
     Active Substance: MELATONIN
     Dosage: 3 MILLIGRAM, 1 EVERY 1 DAY
     Route: 048
  997. VITAMIN E [Suspect]
     Active Substance: .ALPHA.-TOCOPHEROL
     Indication: Nutritional supplementation
     Dosage: 12.5 GRAM
     Route: 042
  998. VITAMIN E [Suspect]
     Active Substance: .ALPHA.-TOCOPHEROL
     Dosage: 5 GRAM
     Route: 065
  999. VITAMIN E [Suspect]
     Active Substance: .ALPHA.-TOCOPHEROL
     Dosage: 12.5 GRAM
     Route: 065
  1000. BISACODYL [Suspect]
     Active Substance: BISACODYL
     Indication: Constipation
     Dosage: 10 MILLIGRAM, PRN
     Route: 054
  1001. BISACODYL [Suspect]
     Active Substance: BISACODYL
     Indication: Ventricular fibrillation
     Dosage: UNK
     Route: 065
  1002. BISACODYL [Suspect]
     Active Substance: BISACODYL
     Indication: Dyspnoea
     Dosage: 10 MILLIGRAM
     Route: 065
  1003. BISACODYL [Suspect]
     Active Substance: BISACODYL
     Indication: Drug therapy
     Dosage: 10 MILLIGRAM
     Route: 042
  1004. BISACODYL [Suspect]
     Active Substance: BISACODYL
     Dosage: 10 MILLIGRAM, QD
     Route: 054
  1005. BISACODYL [Suspect]
     Active Substance: BISACODYL
     Dosage: 10 MILLIGRAM
     Route: 054
  1006. BISACODYL [Suspect]
     Active Substance: BISACODYL
     Dosage: 10 MILLIGRAM
     Route: 054
  1007. BISACODYL [Suspect]
     Active Substance: BISACODYL
     Dosage: 10 MILLIGRAM
     Route: 054
  1008. BISACODYL [Suspect]
     Active Substance: BISACODYL
     Dosage: 10 MILLIGRAM, 1 EVERY 1 DAYS
     Route: 065
  1009. BISACODYL [Suspect]
     Active Substance: BISACODYL
     Dosage: 10 MILLIGRAM
     Route: 042
  1010. BISACODYL [Suspect]
     Active Substance: BISACODYL
     Dosage: UNK
     Route: 065
  1011. BISACODYL [Suspect]
     Active Substance: BISACODYL
     Dosage: 10 MILLIGRAM
     Route: 054
  1012. BISACODYL [Suspect]
     Active Substance: BISACODYL
     Dosage: 10 MILLIGRAM, PRN
     Route: 065
  1013. BISACODYL [Suspect]
     Active Substance: BISACODYL
     Dosage: 10 MILLIGRAM, PRN
     Route: 065
  1014. BISACODYL [Suspect]
     Active Substance: BISACODYL
     Dosage: 10 MILLIGRAM, 1 EVERY 1 DAYS
     Route: 054
  1015. BISACODYL [Suspect]
     Active Substance: BISACODYL
     Dosage: 10 MILLIGRAM, PRN
     Route: 065
  1016. BISACODYL [Suspect]
     Active Substance: BISACODYL
     Dosage: 10 MILLIGRAM, 1 EVERY 1 DAYS
     Route: 065
  1017. BISACODYL [Suspect]
     Active Substance: BISACODYL
     Dosage: 10 MILLIGRAM, EVERY DAYS
     Route: 065
  1018. LANTHANUM CARBONATE [Suspect]
     Active Substance: LANTHANUM CARBONATE
     Indication: Blood phosphorus increased
     Dosage: 500 MILLIGRAM
     Route: 048
  1019. LANTHANUM CARBONATE [Suspect]
     Active Substance: LANTHANUM CARBONATE
     Dosage: 500 MILLIGRAM
     Route: 048
  1020. LANTHANUM CARBONATE [Suspect]
     Active Substance: LANTHANUM CARBONATE
     Dosage: UNK
     Route: 065
  1021. LANTHANUM CARBONATE [Suspect]
     Active Substance: LANTHANUM CARBONATE
     Dosage: UNK
     Route: 048
  1022. LANTHANUM CARBONATE [Suspect]
     Active Substance: LANTHANUM CARBONATE
     Dosage: 500 MILLIGRAM, PRN (AS REQUIRED)
     Route: 048
  1023. BETAMETHASONE DIPROPIONATE\CLIOQUINOL [Suspect]
     Active Substance: BETAMETHASONE DIPROPIONATE\CLIOQUINOL
     Indication: Swelling
     Dosage: UNK, QD (1 EVERY 1 DAYS)
     Route: 061
  1024. CALCIUM CARBONATE\ERGOCALCIFEROL\RETINOL [Suspect]
     Active Substance: CALCIUM CARBONATE\ERGOCALCIFEROL\RETINOL
     Indication: Vitamin D
     Dosage: 0.25 MILLIGRAM, QD
     Route: 048
  1025. CALCIUM CARBONATE\ERGOCALCIFEROL\RETINOL [Suspect]
     Active Substance: CALCIUM CARBONATE\ERGOCALCIFEROL\RETINOL
     Dosage: 0.25 MILLIGRAM
     Route: 048
  1026. CALCIUM CARBONATE\ERGOCALCIFEROL\RETINOL [Suspect]
     Active Substance: CALCIUM CARBONATE\ERGOCALCIFEROL\RETINOL
     Dosage: UNK
     Route: 065
  1027. CHLORAMPHENICOL\HYDROCORTISONE [Suspect]
     Active Substance: CHLORAMPHENICOL\HYDROCORTISONE
     Indication: Bacterial infection
     Dosage: UNK
     Route: 065
  1028. DIPROSONE [Suspect]
     Active Substance: BETAMETHASONE DIPROPIONATE
     Indication: Swelling
     Dosage: 10 MILLIGRAM
     Route: 061
  1029. DIPROSONE [Suspect]
     Active Substance: BETAMETHASONE DIPROPIONATE
     Dosage: UNK
     Route: 061
  1030. DIPROSONE [Suspect]
     Active Substance: BETAMETHASONE DIPROPIONATE
     Dosage: 1 DOSAGE FORM
     Route: 061
  1031. DIPROSONE [Suspect]
     Active Substance: BETAMETHASONE DIPROPIONATE
     Dosage: UNK UNK, QD
     Route: 061
  1032. FENOTEROL\IPRATROPIUM BROMIDE [Suspect]
     Active Substance: FENOTEROL\IPRATROPIUM BROMIDE
     Indication: Dyspnoea
     Dosage: 1 DOSAGE FORM
     Route: 050
  1033. FENOTEROL\IPRATROPIUM BROMIDE [Suspect]
     Active Substance: FENOTEROL\IPRATROPIUM BROMIDE
     Dosage: 3 DOSAGE FORM, QD
     Route: 065
  1034. FENOTEROL\IPRATROPIUM BROMIDE [Suspect]
     Active Substance: FENOTEROL\IPRATROPIUM BROMIDE
     Dosage: UNK, 1 EVERY 1 DAYS
     Route: 065
  1035. FENOTEROL\IPRATROPIUM BROMIDE [Suspect]
     Active Substance: FENOTEROL\IPRATROPIUM BROMIDE
     Dosage: UNK, 1 EVERY 1 DAYS
     Route: 065
  1036. FENOTEROL\IPRATROPIUM BROMIDE [Suspect]
     Active Substance: FENOTEROL\IPRATROPIUM BROMIDE
     Dosage: UNK, 1 EVERY 1 DAYS
     Route: 065
  1037. FENOTEROL\IPRATROPIUM BROMIDE [Suspect]
     Active Substance: FENOTEROL\IPRATROPIUM BROMIDE
     Dosage: UNK, 1 EVERY 1 DAYS
     Route: 050
  1038. FENOTEROL\IPRATROPIUM BROMIDE [Suspect]
     Active Substance: FENOTEROL\IPRATROPIUM BROMIDE
     Dosage: UNK, 3 EVERY 1 DAYS
     Route: 050
  1039. FLUTICASONE PROPIONATE\SALMETEROL XINAFOATE [Suspect]
     Active Substance: FLUTICASONE PROPIONATE\SALMETEROL XINAFOATE
     Indication: Nutritional supplementation
     Dosage: UNK
     Route: 065
  1040. FLUTICASONE PROPIONATE\SALMETEROL XINAFOATE [Suspect]
     Active Substance: FLUTICASONE PROPIONATE\SALMETEROL XINAFOATE
     Indication: Off label use
     Dosage: 1 INTERNATIONAL UNIT
     Route: 048
  1041. FLUTICASONE PROPIONATE\SALMETEROL XINAFOATE [Suspect]
     Active Substance: FLUTICASONE PROPIONATE\SALMETEROL XINAFOATE
     Indication: Intentional product misuse
     Dosage: UNK
     Route: 065
  1042. FLUTICASONE PROPIONATE\SALMETEROL XINAFOATE [Suspect]
     Active Substance: FLUTICASONE PROPIONATE\SALMETEROL XINAFOATE
     Indication: Dyspnoea
     Dosage: UNK
     Route: 065
  1043. FURAZOLIDONE [Suspect]
     Active Substance: FURAZOLIDONE
     Indication: Product used for unknown indication
     Dosage: 1.25 MILLIGRAM
     Route: 042
  1044. FURAZOLIDONE [Suspect]
     Active Substance: FURAZOLIDONE
     Dosage: 12.5 MILLIGRAM, 1 EVERY 1 DAYS
     Route: 042
  1045. FURAZOLIDONE [Suspect]
     Active Substance: FURAZOLIDONE
     Dosage: UNK
     Route: 065
  1046. FURAZOLIDONE [Suspect]
     Active Substance: FURAZOLIDONE
     Dosage: 12.5 MILLIGRAM
     Route: 065
  1047. MANNITOL [Suspect]
     Active Substance: MANNITOL
     Indication: Nutritional supplementation
     Dosage: 12.5 GRAM
     Route: 042
  1048. MANNITOL [Suspect]
     Active Substance: MANNITOL
     Dosage: UNK
     Route: 065
  1049. MANNITOL [Suspect]
     Active Substance: MANNITOL
     Dosage: 12.5 GRAM
     Route: 065
  1050. METAMIZOLE MAGNESIUM [Suspect]
     Active Substance: METAMIZOLE MAGNESIUM
     Indication: Vitamin supplementation
     Dosage: 5 MILLIGRAM, QD
     Route: 042
  1051. ONDANSETRON HYDROCHLORIDE [Suspect]
     Active Substance: ONDANSETRON HYDROCHLORIDE
     Indication: Vomiting
     Dosage: 12 MILLIGRAM, TID
     Route: 042
  1052. ONDANSETRON HYDROCHLORIDE [Suspect]
     Active Substance: ONDANSETRON HYDROCHLORIDE
     Indication: Nausea
     Dosage: 40 MILLIGRAM
     Route: 042
  1053. ONDANSETRON HYDROCHLORIDE [Suspect]
     Active Substance: ONDANSETRON HYDROCHLORIDE
     Dosage: 24 MILLIGRAM
     Route: 042
  1054. ONDANSETRON HYDROCHLORIDE [Suspect]
     Active Substance: ONDANSETRON HYDROCHLORIDE
     Dosage: 36 MILLIGRAM, TID
     Route: 042
  1055. ONDANSETRON HYDROCHLORIDE [Suspect]
     Active Substance: ONDANSETRON HYDROCHLORIDE
     Dosage: 4 MILLIGRAM, TID (FORMULATION: UNKNOWN)
     Route: 042
  1056. ONDANSETRON HYDROCHLORIDE [Suspect]
     Active Substance: ONDANSETRON HYDROCHLORIDE
     Dosage: 4 MILLIGRAM, QD (FORMULATION: UNKNOWN)
     Route: 042
  1057. ONDANSETRON HYDROCHLORIDE [Suspect]
     Active Substance: ONDANSETRON HYDROCHLORIDE
     Dosage: 41 MILLIGRAM
     Route: 042
  1058. ONDANSETRON HYDROCHLORIDE [Suspect]
     Active Substance: ONDANSETRON HYDROCHLORIDE
     Dosage: 8 MILLIGRAM, TID
     Route: 042
  1059. ONDANSETRON HYDROCHLORIDE [Suspect]
     Active Substance: ONDANSETRON HYDROCHLORIDE
     Dosage: 1 DOSAGE FORM
     Route: 042
  1060. ONDANSETRON HYDROCHLORIDE [Suspect]
     Active Substance: ONDANSETRON HYDROCHLORIDE
     Dosage: 41 MILLIGRAM
     Route: 042
  1061. ONDANSETRON HYDROCHLORIDE [Suspect]
     Active Substance: ONDANSETRON HYDROCHLORIDE
     Dosage: 36 MILLIGRAM, TID
     Route: 042
  1062. ONDANSETRON HYDROCHLORIDE [Suspect]
     Active Substance: ONDANSETRON HYDROCHLORIDE
     Indication: Vomiting
     Dosage: 12 MILLIGRAM, TID
     Route: 042
  1063. ONDANSETRON HYDROCHLORIDE [Suspect]
     Active Substance: ONDANSETRON HYDROCHLORIDE
     Indication: Nausea
     Dosage: 406 MILLIGRAM, TID
     Route: 042
  1064. ONDANSETRON HYDROCHLORIDE [Suspect]
     Active Substance: ONDANSETRON HYDROCHLORIDE
     Dosage: UNK
     Route: 065
  1065. HERBALS [Suspect]
     Active Substance: HERBALS
     Indication: Nutritional supplementation
     Dosage: 12.5 MILLIGRAM
     Route: 042
  1066. HERBALS [Suspect]
     Active Substance: HERBALS
     Dosage: UNK
     Route: 065
  1067. PYRIDOXINE HYDROCHLORIDE [Suspect]
     Active Substance: PYRIDOXINE HYDROCHLORIDE
     Indication: Vitamin supplementation
     Dosage: 4 DOSAGE FORM, QD
     Route: 048
  1068. PYRIDOXINE HYDROCHLORIDE [Suspect]
     Active Substance: PYRIDOXINE HYDROCHLORIDE
     Indication: Constipation
     Dosage: UNK
     Route: 065
  1069. PYRIDOXINE HYDROCHLORIDE [Suspect]
     Active Substance: PYRIDOXINE HYDROCHLORIDE
     Indication: Analgesic therapy
     Dosage: UNK, QID
     Route: 065
  1070. LANSOPRAZOLE [Suspect]
     Active Substance: LANSOPRAZOLE
     Indication: Off label use
     Dosage: 30 MILLIGRAM, 1 EVERY 1 DAYS
     Route: 048
  1071. LANSOPRAZOLE [Suspect]
     Active Substance: LANSOPRAZOLE
     Indication: Intentional product misuse
     Dosage: 30 MILLIGRAM, 1 EVERY 1 DAYS
     Route: 048
  1072. LANSOPRAZOLE [Suspect]
     Active Substance: LANSOPRAZOLE
     Indication: Antacid therapy
     Dosage: 30 MILLIGRAM, 1 EVERY 1 DAYS
     Route: 048
  1073. LANSOPRAZOLE [Suspect]
     Active Substance: LANSOPRAZOLE
     Indication: Hyperphosphataemia
     Dosage: 30 MILLIGRAM, 1 EVERY 1 DAYS
     Route: 048
  1074. LANSOPRAZOLE [Suspect]
     Active Substance: LANSOPRAZOLE
     Indication: Blood phosphorus increased
     Dosage: 30 MILLIGRAM, QD
     Route: 048
  1075. HYDROMORPHONE [Suspect]
     Active Substance: HYDROMORPHONE
     Indication: Analgesic therapy
     Dosage: 1 MILLIGRAM, QD
     Route: 058
  1076. HYDROMORPHONE [Suspect]
     Active Substance: HYDROMORPHONE
     Dosage: 96 MILLIGRAM, QD
     Route: 058
  1077. HYDROMORPHONE [Suspect]
     Active Substance: HYDROMORPHONE
     Dosage: 1 MILLIGRAM
     Route: 058
  1078. HYDROMORPHONE [Suspect]
     Active Substance: HYDROMORPHONE
     Dosage: 6 MILLIGRAM
     Route: 058
  1079. HYDROMORPHONE [Suspect]
     Active Substance: HYDROMORPHONE
     Dosage: 17 MILLIGRAM, QD
     Route: 065
  1080. HYDROMORPHONE [Suspect]
     Active Substance: HYDROMORPHONE
     Dosage: 6 MILLIGRAM, QID
     Route: 058
  1081. TRESIBA [Suspect]
     Active Substance: INSULIN DEGLUDEC
     Indication: Diabetes mellitus
     Dosage: UNK
     Route: 058
  1082. TRESIBA [Suspect]
     Active Substance: INSULIN DEGLUDEC
     Dosage: UNK
     Route: 065
  1083. TRESIBA [Suspect]
     Active Substance: INSULIN DEGLUDEC
     Dosage: 1 DOSAGE FORM, QD
     Route: 058
  1084. BISMUTH SUBGALLATE\BUFEXAMAC\LIDOCAINE HYDROCHLORIDE\TITANIUM DIOXIDE [Suspect]
     Active Substance: BISMUTH SUBGALLATE\BUFEXAMAC\LIDOCAINE HYDROCHLORIDE\TITANIUM DIOXIDE
     Indication: Constipation
     Dosage: 133 MILLILITER
     Route: 054
  1085. BISMUTH SUBGALLATE\BUFEXAMAC\LIDOCAINE HYDROCHLORIDE\TITANIUM DIOXIDE [Suspect]
     Active Substance: BISMUTH SUBGALLATE\BUFEXAMAC\LIDOCAINE HYDROCHLORIDE\TITANIUM DIOXIDE
     Dosage: 133 MILLILITER
     Route: 054
  1086. DEXTROSE [Suspect]
     Active Substance: DEXTROSE\DEXTROSE MONOHYDRATE
     Indication: Off label use
     Dosage: UNK
     Route: 065
  1087. DEXTROSE [Suspect]
     Active Substance: DEXTROSE\DEXTROSE MONOHYDRATE
     Indication: Nutritional supplementation
     Dosage: 12.5 GRAM 1 EVERY 1 DAYS
     Route: 042
  1088. DEXTROSE [Suspect]
     Active Substance: DEXTROSE\DEXTROSE MONOHYDRATE
     Indication: Intentional product misuse
     Dosage: 12.5 GRAM, PRN
     Route: 042
  1089. DIPYRONE [Suspect]
     Active Substance: DIPYRONE
     Indication: Vitamin supplementation
     Dosage: UNK
     Route: 065
  1090. DIPYRONE [Suspect]
     Active Substance: DIPYRONE
     Dosage: UNK (SOLUTION INTRAMUSCULAR)
     Route: 042
  1091. DIPYRONE [Suspect]
     Active Substance: DIPYRONE
     Dosage: 5 MILLIGRAM, 1 EVERY 1 DAYS
     Route: 042
  1092. DISTIGMINE BROMIDE [Suspect]
     Active Substance: DISTIGMINE BROMIDE
     Indication: Dyspnoea
     Dosage: UNK
     Route: 065
  1093. DISTIGMINE BROMIDE [Suspect]
     Active Substance: DISTIGMINE BROMIDE
     Dosage: 1 INTERNATIONAL UNIT (1 EVERY 1 DAY)
     Route: 048
  1094. DISTIGMINE BROMIDE [Suspect]
     Active Substance: DISTIGMINE BROMIDE
     Dosage: UNK
     Route: 065
  1095. DISTIGMINE BROMIDE [Suspect]
     Active Substance: DISTIGMINE BROMIDE
     Dosage: 1 INTERNATIONAL UNIT (1 EVERY 1 DAY)
     Route: 048
  1096. DISTIGMINE BROMIDE [Suspect]
     Active Substance: DISTIGMINE BROMIDE
     Dosage: 1 INTERNATIONAL UNIT (1 EVERY 1 DAY)
     Route: 048
  1097. DISTIGMINE BROMIDE [Suspect]
     Active Substance: DISTIGMINE BROMIDE
     Dosage: 1 INTERNATIONAL UNIT (1 EVERY 1 DAY)
     Route: 048
  1098. HEPARIN SODIUM [Suspect]
     Active Substance: HEPARIN SODIUM
     Indication: Off label use
     Dosage: 50 MILLILITER, 1 EVERY 1 DAYS
     Route: 042
  1099. HEPARIN SODIUM [Suspect]
     Active Substance: HEPARIN SODIUM
     Indication: Intentional product misuse
     Dosage: 50 MILLILITER
     Route: 050
  1100. HEPARIN SODIUM [Suspect]
     Active Substance: HEPARIN SODIUM
     Indication: Anticoagulant therapy
     Dosage: 50 MILLILITER
     Route: 042
  1101. HEPARIN SODIUM [Suspect]
     Active Substance: HEPARIN SODIUM
     Dosage: 250 MILLILITER
     Route: 042
  1102. IPRATROPIUM BROMIDE\XYLOMETAZOLINE HYDROCHLORIDE [Suspect]
     Active Substance: IPRATROPIUM BROMIDE\XYLOMETAZOLINE HYDROCHLORIDE
     Indication: Dyspnoea
     Dosage: UNK
     Route: 065
  1103. IPRATROPIUM BROMIDE\XYLOMETAZOLINE HYDROCHLORIDE [Suspect]
     Active Substance: IPRATROPIUM BROMIDE\XYLOMETAZOLINE HYDROCHLORIDE
     Dosage: UNK
  1104. AMIODARONE HYDROCHLORIDE [Suspect]
     Active Substance: AMIODARONE HYDROCHLORIDE
     Indication: Ventricular fibrillation
     Dosage: UNK
     Route: 065
  1105. AMIODARONE HYDROCHLORIDE [Suspect]
     Active Substance: AMIODARONE HYDROCHLORIDE
     Indication: Off label use
     Dosage: UNK
     Route: 065
  1106. AMIODARONE HYDROCHLORIDE [Suspect]
     Active Substance: AMIODARONE HYDROCHLORIDE
     Indication: Drug therapy
     Dosage: UNK
     Route: 065
  1107. ARANESP [Suspect]
     Active Substance: DARBEPOETIN ALFA
     Indication: Anaemia
     Dosage: UNK
     Route: 065
  1108. ARANESP [Suspect]
     Active Substance: DARBEPOETIN ALFA
     Dosage: UNK
     Route: 065
  1109. ARANESP [Suspect]
     Active Substance: DARBEPOETIN ALFA
     Dosage: 0.71 MICROGRAM, 1 EVERY 2 WEEKS
     Route: 042
  1110. ARANESP [Suspect]
     Active Substance: DARBEPOETIN ALFA
     Dosage: 0.2 MICROGRAM, QW
     Route: 065
  1111. ARANESP [Suspect]
     Active Substance: DARBEPOETIN ALFA
     Dosage: 0.71 MICROGRAM, 1 EVERY 2 DAYS
     Route: 065
  1112. ARANESP [Suspect]
     Active Substance: DARBEPOETIN ALFA
     Dosage: 1.42 MICROGRAM, 1 EVERY 1 WEEKS
     Route: 065
  1113. ARANESP [Suspect]
     Active Substance: DARBEPOETIN ALFA
     Dosage: 20 MICROGRAM, QW (1 EVERY 1 WEEKS)
     Route: 065
  1114. ARANESP [Suspect]
     Active Substance: DARBEPOETIN ALFA
     Dosage: 10 MICROGRAM, 1 EVERY 2 WEEKS
     Route: 065
  1115. ARANESP [Suspect]
     Active Substance: DARBEPOETIN ALFA
     Dosage: 1 DOSAGE FORM, QW (1 EVERY 1 WEEKS)
     Route: 042
  1116. ARANESP [Suspect]
     Active Substance: DARBEPOETIN ALFA
     Dosage: 10 MICROGRAM, CYCLICAL
     Route: 065
  1117. ARANESP [Suspect]
     Active Substance: DARBEPOETIN ALFA
     Dosage: 0.71 MICROGRAM, 1 EVERY 1 WEEK
     Route: 065
  1118. ARANESP [Suspect]
     Active Substance: DARBEPOETIN ALFA
     Dosage: 10 MILLIGRAM
     Route: 042
  1119. ARANESP [Suspect]
     Active Substance: DARBEPOETIN ALFA
     Dosage: 10 MILLIGRAM, 1 EVERY 2 WEEKS
     Route: 065
  1120. ARANESP [Suspect]
     Active Substance: DARBEPOETIN ALFA
     Dosage: 10 MILLIGRAM, 1 EVERY 2 WEEKS
     Route: 065
  1121. ARANESP [Suspect]
     Active Substance: DARBEPOETIN ALFA
     Dosage: 0.71 MICROGRAM, 2 EVERY 1 WEEK
     Route: 065
  1122. ARANESP [Suspect]
     Active Substance: DARBEPOETIN ALFA
     Dosage: 10 MICROGRAM, 1 EVERY 2 WEEKS
     Route: 065
  1123. ARANESP [Suspect]
     Active Substance: DARBEPOETIN ALFA
     Dosage: UNK
     Route: 065
  1124. ARANESP [Suspect]
     Active Substance: DARBEPOETIN ALFA
     Dosage: 0.714 MICROGRAM (1 EVERY 2 WEEKS)
     Route: 065
  1125. ARANESP [Suspect]
     Active Substance: DARBEPOETIN ALFA
     Dosage: 10 MILLIGRAM, CYCLICAL
     Route: 042
  1126. ARANESP [Suspect]
     Active Substance: DARBEPOETIN ALFA
     Dosage: 0.75 MILLIGRAM
     Route: 042
  1127. ARANESP [Suspect]
     Active Substance: DARBEPOETIN ALFA
     Dosage: 0.71 MICROGRAM, 1 EVERY 2 WEEKS
     Route: 065
  1128. ARANESP [Suspect]
     Active Substance: DARBEPOETIN ALFA
     Dosage: 0.71 MICROGRAM, 1 EVERY 1 DAY
     Route: 065
  1129. ARANESP [Suspect]
     Active Substance: DARBEPOETIN ALFA
     Dosage: UNK
     Route: 065
  1130. ARANESP [Suspect]
     Active Substance: DARBEPOETIN ALFA
     Dosage: 10 MILLIGRAM, 1 EVERY 2 DAYS
     Route: 065
  1131. ARANESP [Suspect]
     Active Substance: DARBEPOETIN ALFA
     Dosage: 0.71 MICROGRAM, 1 EVERY 1 WEEKS
     Route: 065
  1132. ARANESP [Suspect]
     Active Substance: DARBEPOETIN ALFA
     Dosage: 10 MICROGRAM, 1 EVERY 2 WEEKS
     Route: 065
  1133. ARANESP [Suspect]
     Active Substance: DARBEPOETIN ALFA
     Dosage: 10 MILLIGRAM, CYCLICAL
     Route: 042
  1134. ARANESP [Suspect]
     Active Substance: DARBEPOETIN ALFA
     Dosage: 0.71 MICROGRAM, 1 EVERY 2 WEEKS
     Route: 065
  1135. ARANESP [Suspect]
     Active Substance: DARBEPOETIN ALFA
     Dosage: 10 MICROGRAM, 1 EVERY 2 WEEKS
     Route: 065
  1136. NOREPINEPHRINE [Suspect]
     Active Substance: NOREPINEPHRINE\NOREPINEPHRINE BITARTRATE
     Indication: Stress
     Dosage: UNK
     Route: 065
  1137. NOREPINEPHRINE [Suspect]
     Active Substance: NOREPINEPHRINE\NOREPINEPHRINE BITARTRATE
     Indication: Off label use
     Dosage: UNK
     Route: 065
  1138. NOREPINEPHRINE [Suspect]
     Active Substance: NOREPINEPHRINE\NOREPINEPHRINE BITARTRATE
     Indication: Intentional product misuse
     Dosage: UNK
     Route: 065
  1139. NOREPINEPHRINE [Suspect]
     Active Substance: NOREPINEPHRINE\NOREPINEPHRINE BITARTRATE
     Dosage: UNK
     Route: 042
  1140. NOREPINEPHRINE [Suspect]
     Active Substance: NOREPINEPHRINE\NOREPINEPHRINE BITARTRATE
     Dosage: UNK
     Route: 042
  1141. ONDANSETRON [Suspect]
     Active Substance: ONDANSETRON
     Indication: Vomiting
     Dosage: 1 MILLIGRAM
     Route: 065
  1142. ONDANSETRON [Suspect]
     Active Substance: ONDANSETRON
     Indication: Nausea
     Dosage: UNK
     Route: 065
  1143. OTRIVIN [Suspect]
     Active Substance: XYLOMETAZOLINE
     Indication: Product used for unknown indication
     Dosage: 1 MILLIGRAM
     Route: 065
  1144. SODIUM FERRIC GLUCONATE COMPLEX [Suspect]
     Active Substance: SODIUM FERRIC GLUCONATE COMPLEX
     Indication: Iron deficiency
     Dosage: UNK
     Route: 065
  1145. SODIUM FERRIC GLUCONATE COMPLEX [Suspect]
     Active Substance: SODIUM FERRIC GLUCONATE COMPLEX
     Dosage: UNK
     Route: 065
  1146. SODIUM FERRIC GLUCONATE COMPLEX [Suspect]
     Active Substance: SODIUM FERRIC GLUCONATE COMPLEX
     Dosage: 150 MILLIGRAM (1 EVERY 4 WEEK)
     Route: 042
  1147. SODIUM FERRIC GLUCONATE COMPLEX [Suspect]
     Active Substance: SODIUM FERRIC GLUCONATE COMPLEX
     Dosage: 17.85 MILLIGRAM, 1 EVERY 1 WEEKS
     Route: 042
  1148. SODIUM FERRIC GLUCONATE COMPLEX [Suspect]
     Active Substance: SODIUM FERRIC GLUCONATE COMPLEX
     Dosage: 125 MILLIGRAM (1 EVERY 1 MONTH)
     Route: 042
  1149. SODIUM FERRIC GLUCONATE COMPLEX [Suspect]
     Active Substance: SODIUM FERRIC GLUCONATE COMPLEX
     Dosage: 133 MILLILITRE
     Route: 042
  1150. SODIUM FERRIC GLUCONATE COMPLEX [Suspect]
     Active Substance: SODIUM FERRIC GLUCONATE COMPLEX
     Dosage: 1.25 MILLIGRAM, QW
     Route: 042
  1151. SODIUM FERRIC GLUCONATE COMPLEX [Suspect]
     Active Substance: SODIUM FERRIC GLUCONATE COMPLEX
     Dosage: 4.64 MILLIGRAM (1 EVERY 1 MONTHS)
     Route: 042
  1152. SODIUM FERRIC GLUCONATE COMPLEX [Suspect]
     Active Substance: SODIUM FERRIC GLUCONATE COMPLEX
     Dosage: 125 MILLIGRAM (1 EVERY 4 WEEK
     Route: 042
  1153. SODIUM FERRIC GLUCONATE COMPLEX [Suspect]
     Active Substance: SODIUM FERRIC GLUCONATE COMPLEX
     Dosage: 125 MILLIGRAM (1 EVERY 1 WEEK
     Route: 042
  1154. SODIUM FERRIC GLUCONATE COMPLEX [Suspect]
     Active Substance: SODIUM FERRIC GLUCONATE COMPLEX
     Dosage: 125 MILLIGRAM (1 EVERY 4 WEEKS
     Route: 042
  1155. SODIUM FERRIC GLUCONATE COMPLEX [Suspect]
     Active Substance: SODIUM FERRIC GLUCONATE COMPLEX
     Dosage: 4.64 MILLIGRAM (1 EVERY 4 WEEKS)
     Route: 042
  1156. SODIUM FERRIC GLUCONATE COMPLEX [Suspect]
     Active Substance: SODIUM FERRIC GLUCONATE COMPLEX
     Dosage: 4.64 MILLIGRAM
     Route: 042
  1157. SODIUM PHOSPHATE, MONOBASIC [Suspect]
     Active Substance: SODIUM PHOSPHATE, MONOBASIC
     Indication: Constipation
     Dosage: 133 MILLIGRAM
     Route: 054
  1158. SODIUM PHOSPHATE, MONOBASIC [Suspect]
     Active Substance: SODIUM PHOSPHATE, MONOBASIC
     Dosage: UNK
     Route: 065
  1159. SODIUM PHOSPHATE, MONOBASIC [Suspect]
     Active Substance: SODIUM PHOSPHATE, MONOBASIC
     Dosage: 133 MILLILITER
     Route: 054
  1160. WARFARIN [Suspect]
     Active Substance: WARFARIN
     Indication: Thrombosis
     Dosage: UNK
     Route: 065
  1161. WARFARIN [Suspect]
     Active Substance: WARFARIN
     Dosage: UNK
     Route: 048
  1162. WARFARIN [Suspect]
     Active Substance: WARFARIN
     Dosage: UNK
     Route: 048
  1163. WARFARIN [Suspect]
     Active Substance: WARFARIN
     Dosage: 2 GRAM, 1 EVERY 1 DAY
     Route: 048
  1164. WARFARIN [Suspect]
     Active Substance: WARFARIN
     Dosage: UNK
     Route: 065
  1165. WARFARIN [Suspect]
     Active Substance: WARFARIN
     Dosage: 2 MILLIGRAM
     Route: 048
  1166. WARFARIN SODIUM [Suspect]
     Active Substance: WARFARIN SODIUM
     Indication: Thrombosis
     Dosage: 2 MILLIGRAM
     Route: 048
  1167. WARFARIN SODIUM [Suspect]
     Active Substance: WARFARIN SODIUM
     Indication: Off label use
     Dosage: UNK
     Route: 065
  1168. WARFARIN SODIUM [Suspect]
     Active Substance: WARFARIN SODIUM
     Indication: Intentional product misuse
     Dosage: 2 GRAM, 1 EVERY 1 DAY
     Route: 048
  1169. WARFARIN SODIUM [Suspect]
     Active Substance: WARFARIN SODIUM
     Dosage: 2 GRAM
     Route: 048
  1170. WARFARIN SODIUM [Suspect]
     Active Substance: WARFARIN SODIUM
     Dosage: 2 GRAM, 1 EVERY 1 DAY
     Route: 048
  1171. WARFARIN SODIUM [Suspect]
     Active Substance: WARFARIN SODIUM
     Dosage: 2 GRAM, 1 EVERY 1 DAY
     Route: 048
  1172. WARFARIN SODIUM [Suspect]
     Active Substance: WARFARIN SODIUM
     Dosage: 2 GRAM, 1 EVERY 1 DAY
     Route: 048
  1173. WARFARIN SODIUM [Suspect]
     Active Substance: WARFARIN SODIUM
     Dosage: 2 GRAM, 1 EVERY 1 DAY
     Route: 048
  1174. DULCOLAX (BISACODYL) [Suspect]
     Active Substance: BISACODYL
     Indication: Constipation
     Dosage: 10 MILLIGRAM
     Route: 054
  1175. DULCOLAX (BISACODYL) [Suspect]
     Active Substance: BISACODYL
     Indication: Ventricular fibrillation
     Dosage: 10 MILLIGRAM
     Route: 054
  1176. DULCOLAX (BISACODYL) [Suspect]
     Active Substance: BISACODYL
     Indication: Drug therapy
     Dosage: 10 MILLIGRAM, 1 EVERY 1 DAYS
     Route: 065
  1177. DULCOLAX (BISACODYL) [Suspect]
     Active Substance: BISACODYL
     Dosage: UNK
     Route: 054
  1178. DULCOLAX (BISACODYL) [Suspect]
     Active Substance: BISACODYL
     Dosage: 10 MILLIGRAM, 1 EVERY 1 DAYS
     Route: 054
  1179. INSULIN ASPART [Suspect]
     Active Substance: INSULIN ASPART
     Indication: Diabetes mellitus
     Dosage: UNK
     Route: 065
  1180. INSULIN ASPART [Suspect]
     Active Substance: INSULIN ASPART
     Dosage: UNK
     Route: 065
  1181. INSULIN ASPART [Suspect]
     Active Substance: INSULIN ASPART
     Dosage: UNK
     Route: 048
  1182. INSULIN ASPART [Suspect]
     Active Substance: INSULIN ASPART
     Dosage: UNK
     Route: 058
  1183. INSULIN ASPART [Suspect]
     Active Substance: INSULIN ASPART
     Dosage: UNK
     Route: 058
  1184. INSULIN ASPART [Suspect]
     Active Substance: INSULIN ASPART
     Dosage: UNK
     Route: 058
  1185. INSULIN ASPART [Suspect]
     Active Substance: INSULIN ASPART
     Dosage: UNK
     Route: 058
  1186. INSULIN ASPART [Suspect]
     Active Substance: INSULIN ASPART
     Dosage: UNK
     Route: 048
  1187. INSULIN ASPART [Suspect]
     Active Substance: INSULIN ASPART
     Dosage: UNK
     Route: 048
  1188. INSULIN ASPART [Suspect]
     Active Substance: INSULIN ASPART
     Dosage: UNK
     Route: 048
  1189. INSULIN ASPART [Suspect]
     Active Substance: INSULIN ASPART
     Dosage: UNK
     Route: 048
  1190. INSULIN ASPART [Suspect]
     Active Substance: INSULIN ASPART
     Dosage: UNK
     Route: 048
  1191. DEXTROSE [Suspect]
     Active Substance: DEXTROSE\DEXTROSE MONOHYDRATE
     Indication: Nutritional supplementation
     Dosage: 12.5 GRAM
     Route: 042
  1192. PHYTONADIONE [Suspect]
     Active Substance: PHYTONADIONE
     Indication: Product used for unknown indication
     Dosage: UNK
     Route: 065
  1193. PHYTONADIONE [Suspect]
     Active Substance: PHYTONADIONE
     Dosage: UNK
     Route: 065
  1194. PHYTONADIONE [Suspect]
     Active Substance: PHYTONADIONE
     Dosage: 5 MILLIGRAM, PRN
     Route: 042
  1195. PHYTONADIONE [Suspect]
     Active Substance: PHYTONADIONE
     Dosage: 5 MILLIGRAM, PRN
     Route: 042
  1196. PHYTONADIONE [Suspect]
     Active Substance: PHYTONADIONE
     Dosage: UNK
     Route: 065
  1197. PHYTONADIONE [Suspect]
     Active Substance: PHYTONADIONE
     Dosage: 5 MILLIGRAM, QD
     Route: 042
  1198. PHYTONADIONE [Suspect]
     Active Substance: PHYTONADIONE
     Dosage: 5 MILLIGRAM, QD
     Route: 042
  1199. HERBALS\PAULLINIA CUPANA SEED [Suspect]
     Active Substance: HERBALS\PAULLINIA CUPANA SEED
     Indication: Product used for unknown indication
     Dosage: UNK
     Route: 065
  1200. OSMITROL [Suspect]
     Active Substance: MANNITOL
     Indication: Nutritional supplementation
     Dosage: 12.5 GRAM (SOLUTION INTRAVENOUS)
     Route: 042
  1201. ALLANTOIN [Suspect]
     Active Substance: ALLANTOIN
     Indication: Off label use
     Dosage: 17.0 GRAM, 1 EVERY 1 DAYS
     Route: 048
  1202. ALLANTOIN [Suspect]
     Active Substance: ALLANTOIN
     Indication: Intentional product misuse
     Dosage: UNK
     Route: 065
  1203. ALLANTOIN [Suspect]
     Active Substance: ALLANTOIN
     Indication: Constipation
     Dosage: UNK
     Route: 065
  1204. ALLANTOIN [Suspect]
     Active Substance: ALLANTOIN
     Dosage: UNK
     Route: 048
  1205. ALLANTOIN [Suspect]
     Active Substance: ALLANTOIN
     Dosage: UNK, QD
     Route: 048
  1206. ALLANTOIN [Suspect]
     Active Substance: ALLANTOIN
     Dosage: UNK
     Route: 048
  1207. ALLANTOIN [Suspect]
     Active Substance: ALLANTOIN
     Dosage: 17.0 GRAM, 1 EVERY 1 DAYS
     Route: 048
  1208. ARANESP [Suspect]
     Active Substance: DARBEPOETIN ALFA
     Indication: Anaemia
     Dosage: 0.71 MICROGRAM, 1 EVERY 2 WEEKS (SOLUTION, INTRAVENOUS)
     Route: 042
  1209. ARANESP [Suspect]
     Active Substance: DARBEPOETIN ALFA
     Dosage: 10 MICROGRAM, 1 EVERY 2 WEEKS (SOLUTION, INTRAVENOUS)
     Route: 042
  1210. ARANESP [Suspect]
     Active Substance: DARBEPOETIN ALFA
     Dosage: 10 MILLIGRAM, 2 EVERY 1 WEEKS (SOLUTION, INTRAVENOUS)
     Route: 042
  1211. ARANESP [Suspect]
     Active Substance: DARBEPOETIN ALFA
     Dosage: 1.42 MICROGRAM, 1 EVERY 1 WEEKS (SOLUTION, INTRAVENOUS)
     Route: 042
  1212. ARANESP [Suspect]
     Active Substance: DARBEPOETIN ALFA
     Dosage: UNK
     Route: 065
  1213. UNSPECIFIED INGREDIENT [Suspect]
     Active Substance: UNSPECIFIED INGREDIENT
     Indication: Anticoagulant therapy
     Dosage: 250.0 MILLILITER, 1 EVERY 1 DAYS
     Route: 042
  1214. UNSPECIFIED INGREDIENT [Suspect]
     Active Substance: UNSPECIFIED INGREDIENT
     Dosage: UNK
     Route: 065
  1215. UNSPECIFIED INGREDIENT [Suspect]
     Active Substance: UNSPECIFIED INGREDIENT
     Dosage: UNK
     Route: 042
  1216. UNSPECIFIED INGREDIENT [Suspect]
     Active Substance: UNSPECIFIED INGREDIENT
     Dosage: 50.0 MILLILITER, 1 EVERY 1 DAYS
     Route: 042
  1217. UNSPECIFIED INGREDIENT [Suspect]
     Active Substance: UNSPECIFIED INGREDIENT
     Dosage: 250.0 MILLILITER, 1 EVERY 1 DAYS
     Route: 065
  1218. FENOTEROL [Suspect]
     Active Substance: FENOTEROL
     Indication: Dyspnoea
     Dosage: 1.0 DOSAGE FORM, 1 EVERY 8 HOURS
     Route: 050
  1219. SODIUM FERRIC GLUCONATE COMPLEX [Suspect]
     Active Substance: SODIUM FERRIC GLUCONATE COMPLEX
     Indication: Iron deficiency
     Dosage: 1.25 MILLIGRAM, 1 EVERY 4 WEEKS
     Route: 042
  1220. SODIUM FERRIC GLUCONATE COMPLEX [Suspect]
     Active Substance: SODIUM FERRIC GLUCONATE COMPLEX
     Dosage: 4.64 MILLIGRAM, 4 EVERY 1 WEEKS
     Route: 042
  1221. SODIUM FERRIC GLUCONATE COMPLEX [Suspect]
     Active Substance: SODIUM FERRIC GLUCONATE COMPLEX
     Dosage: 4.64 MILLIGRAM, 4 EVERY 1 WEEKS
     Route: 042
  1222. SODIUM FERRIC GLUCONATE COMPLEX [Suspect]
     Active Substance: SODIUM FERRIC GLUCONATE COMPLEX
     Dosage: 125 MILLIGRAM, 4 EVERY 1 WEEKS
     Route: 042
  1223. SODIUM FERRIC GLUCONATE COMPLEX [Suspect]
     Active Substance: SODIUM FERRIC GLUCONATE COMPLEX
     Dosage: UNK
     Route: 065
  1224. SODIUM FERRIC GLUCONATE COMPLEX [Suspect]
     Active Substance: SODIUM FERRIC GLUCONATE COMPLEX
     Dosage: 4.64 MILLIGRAM, 1 EVERY 4 WEEKS
     Route: 042
  1225. SODIUM FERRIC GLUCONATE COMPLEX [Suspect]
     Active Substance: SODIUM FERRIC GLUCONATE COMPLEX
     Dosage: 125 MILLIGRAM, 1 EVERY 4 WEEKS
     Route: 042
  1226. SODIUM FERRIC GLUCONATE COMPLEX [Suspect]
     Active Substance: SODIUM FERRIC GLUCONATE COMPLEX
     Dosage: 17.85 MILLIGRAM, 1 EVERY 1 WEEKS
     Route: 042
  1227. SODIUM FERRIC GLUCONATE COMPLEX [Suspect]
     Active Substance: SODIUM FERRIC GLUCONATE COMPLEX
     Dosage: 125 MILLIGRAM, 1 EVERY 1 WEEKS
     Route: 042
  1228. AMINOBENZOIC ACID [Suspect]
     Active Substance: AMINOBENZOIC ACID
     Indication: Product used for unknown indication
     Dosage: UNK
     Route: 065
  1229. AMINOBENZOIC ACID [Suspect]
     Active Substance: AMINOBENZOIC ACID
     Dosage: 12.5 MILLIGRAM
     Route: 065
  1230. AMMONIUM BROMIDE [Suspect]
     Active Substance: AMMONIUM BROMIDE
     Indication: Dyspnoea
     Dosage: UNK
     Route: 065
  1231. POTASSIUM BROMIDE [Suspect]
     Active Substance: POTASSIUM BROMIDE
     Dosage: 1 INTERNATIONAL UNIT
     Route: 048
  1232. SODIUM BROMIDE [Suspect]
     Active Substance: SODIUM BROMIDE
     Dosage: 1 INTERNATIONAL UNIT
     Route: 048
  1233. BISMUTH [Suspect]
     Active Substance: BISMUTH
     Indication: Constipation
     Dosage: UNK
     Route: 065
  1234. BUFEXAMAC\LIDOCAINE HYDROCHLORIDE [Suspect]
     Active Substance: BUFEXAMAC\LIDOCAINE HYDROCHLORIDE
     Indication: Constipation
     Dosage: UNK
     Route: 065
  1235. BUFEXAMAC\LIDOCAINE HYDROCHLORIDE [Suspect]
     Active Substance: BUFEXAMAC\LIDOCAINE HYDROCHLORIDE
     Dosage: 133 MILLILITRE
     Route: 054
  1236. BUFEXAMAC\LIDOCAINE HYDROCHLORIDE [Suspect]
     Active Substance: BUFEXAMAC\LIDOCAINE HYDROCHLORIDE
     Dosage: 133 MILLILITRE, PRN
     Route: 054
  1237. CARBOHYDRATES [Suspect]
     Active Substance: CARBOHYDRATES
     Indication: Vitamin supplementation
     Dosage: UNK
     Route: 065
  1238. DEXILANT [Suspect]
     Active Substance: DEXLANSOPRAZOLE
     Indication: Product used for unknown indication
     Dosage: UNK
     Route: 065
  1239. DEXILANT [Suspect]
     Active Substance: DEXLANSOPRAZOLE
     Dosage: 60 MILLIGRAM, QD
     Route: 065
  1240. DEXILANT [Suspect]
     Active Substance: DEXLANSOPRAZOLE
     Dosage: UNK
     Route: 065
  1241. DEXILANT [Suspect]
     Active Substance: DEXLANSOPRAZOLE
     Dosage: 60 MILLIGRAM, QD
     Route: 065
  1242. DEXILANT [Suspect]
     Active Substance: DEXLANSOPRAZOLE
     Dosage: UNK
     Route: 065
  1243. DEXILANT [Suspect]
     Active Substance: DEXLANSOPRAZOLE
     Dosage: 60 MILLIGRAM, QD
     Route: 048
  1244. DEXILANT [Suspect]
     Active Substance: DEXLANSOPRAZOLE
     Dosage: 60 MILLIGRAM, 1 EVERY 1 DAY
     Route: 048
  1245. FLUTICASONE PROPIONATE [Suspect]
     Active Substance: FLUTICASONE PROPIONATE
     Indication: Nutritional supplementation
     Dosage: UNK
     Route: 065
  1246. FRAGMIN [Suspect]
     Active Substance: DALTEPARIN SODIUM
     Indication: Pulmonary embolism
     Dosage: UNK (SOLUTION INTRAVENOUS)
     Route: 065
  1247. FRAGMIN [Suspect]
     Active Substance: DALTEPARIN SODIUM
     Indication: Thrombosis
     Dosage: 0.5 MILLILITER
     Route: 048
  1248. FRAGMIN [Suspect]
     Active Substance: DALTEPARIN SODIUM
     Dosage: 0.5 MILLILITER
     Route: 048
  1249. IPRATROPIUM BROMIDE\XYLOMETAZOLINE HYDROCHLORIDE [Suspect]
     Active Substance: IPRATROPIUM BROMIDE\XYLOMETAZOLINE HYDROCHLORIDE
     Indication: Dyspnoea
     Dosage: UNK
     Route: 065
  1250. ASIAN GINSENG [Suspect]
     Active Substance: ASIAN GINSENG
     Indication: Product used for unknown indication
     Route: 065
  1251. SODIUM FERRIC GLUCONATE COMPLEX [Suspect]
     Active Substance: SODIUM FERRIC GLUCONATE COMPLEX
     Indication: Iron deficiency
     Dosage: UNK
     Route: 065
  1252. SODIUM FERRIC GLUCONATE COMPLEX [Suspect]
     Active Substance: SODIUM FERRIC GLUCONATE COMPLEX
     Dosage: 125.0 MILLIGRAM, 1 EVERY 1 MONTHS
     Route: 042
  1253. SODIUM FERRIC GLUCONATE COMPLEX [Suspect]
     Active Substance: SODIUM FERRIC GLUCONATE COMPLEX
     Dosage: 125.0 MILLIGRAM
     Route: 042
  1254. SODIUM PHOSPHATE [Suspect]
     Active Substance: SODIUM PHOSPHATE
     Indication: Constipation
     Dosage: UNK
     Route: 065
  1255. .ALPHA.-TOCOPHEROL [Suspect]
     Active Substance: .ALPHA.-TOCOPHEROL
     Indication: Nutritional supplementation
     Dosage: UNK (DLALPHA TOCOPHEROL)
     Route: 065
  1256. ALUMINUM HYDROXIDE\MAGNESIUM TRISILICATE [Suspect]
     Active Substance: ALUMINUM HYDROXIDE\MAGNESIUM TRISILICATE
     Indication: Constipation
     Dosage: 133.0 MILLILITER
     Route: 054
  1257. CEFTRIAXONE [Suspect]
     Active Substance: CEFTRIAXONE\CEFTRIAXONE SODIUM
     Indication: Bacterial infection
     Dosage: UNK
     Route: 065
  1258. CEFTRIAXONE [Suspect]
     Active Substance: CEFTRIAXONE\CEFTRIAXONE SODIUM
     Indication: Sepsis
     Dosage: 2.0 GRAM
     Route: 042
  1259. CITRIC ACID [Suspect]
     Active Substance: CITRIC ACID MONOHYDRATE
     Indication: Nutritional supplementation
     Dosage: 12.5 MILLIGRAM
     Route: 065
  1260. DARBEPOETIN ALFA [Suspect]
     Active Substance: DARBEPOETIN ALFA
     Indication: Anaemia
     Dosage: 10.0 MICROGRAM
     Route: 042
  1261. .ALPHA.-TOCOPHEROL ACETATE, DL- [Suspect]
     Active Substance: .ALPHA.-TOCOPHEROL ACETATE, DL-
     Indication: Nutritional supplementation
     Dosage: UNK
     Route: 065
  1262. MAGNESIUM TRISILICATE [Suspect]
     Active Substance: MAGNESIUM TRISILICATE
     Indication: Constipation
     Dosage: 133.0 MILLILITER
     Route: 065
  1263. MAGNESIUM TRISILICATE [Suspect]
     Active Substance: MAGNESIUM TRISILICATE
     Dosage: UNK
     Route: 065
  1264. PYRIDOXINE [Suspect]
     Active Substance: PYRIDOXINE
     Indication: Vitamin supplementation
     Dosage: UNK
     Route: 048
  1265. PYRIDOXINE [Suspect]
     Active Substance: PYRIDOXINE
     Indication: Constipation
     Dosage: UNK
     Route: 065
  1266. PYRIDOXINE [Suspect]
     Active Substance: PYRIDOXINE
     Indication: Analgesic therapy
     Dosage: UNK
     Route: 065
  1267. PYRIDOXINE [Suspect]
     Active Substance: PYRIDOXINE
     Dosage: 10 MILLIGRAM
     Route: 065
  1268. SODIUM CITRATE [Suspect]
     Active Substance: SODIUM CITRATE
     Indication: Thrombosis
     Dosage: UNK
     Route: 065
  1269. SODIUM CITRATE [Suspect]
     Active Substance: SODIUM CITRATE
     Indication: Anticoagulant therapy
  1270. .ALPHA.-TOCOPHEROL, D- [Suspect]
     Active Substance: .ALPHA.-TOCOPHEROL, D-
     Indication: Nutritional supplementation
     Dosage: 12.5 GRAM
     Route: 042
  1271. HORSE CHESTNUT [Suspect]
     Active Substance: HORSE CHESTNUT
     Indication: Product used for unknown indication
     Dosage: UNK
     Route: 065
  1272. HORSE CHESTNUT [Suspect]
     Active Substance: HORSE CHESTNUT
     Dosage: UNK
     Route: 065
  1273. HORSE CHESTNUT [Suspect]
     Active Substance: HORSE CHESTNUT
     Dosage: UNK
     Route: 065
  1274. VITAMIN B6 [Suspect]
     Active Substance: PYRIDOXINE HYDROCHLORIDE
     Indication: Vitamin supplementation
     Dosage: UNK
     Route: 048
  1275. VITAMIN B6 [Suspect]
     Active Substance: PYRIDOXINE HYDROCHLORIDE
     Indication: Constipation
  1276. VITAMIN B6 [Suspect]
     Active Substance: PYRIDOXINE HYDROCHLORIDE
     Indication: Off label use
  1277. VITAMIN C [Suspect]
     Active Substance: ASCORBIC ACID
     Indication: Product used for unknown indication
     Dosage: UNK
     Route: 065
  1278. VITAMIN C [Suspect]
     Active Substance: ASCORBIC ACID
     Indication: Vitamin supplementation
     Dosage: 17 GRAM, 1 EVERY 1 DAYS
     Route: 048
  1279. VITAMIN C [Suspect]
     Active Substance: ASCORBIC ACID
     Indication: Constipation
     Dosage: 17 GRAM 1 EVERY 1 DAYS
     Route: 048
  1280. VITAMIN C [Suspect]
     Active Substance: ASCORBIC ACID
     Dosage: UNK, QD
     Route: 065
  1281. BIOTIN [Suspect]
     Active Substance: BIOTIN
     Indication: Product used for unknown indication
     Dosage: UNK
     Route: 065
  1282. BIOTIN [Suspect]
     Active Substance: BIOTIN
     Indication: Vitamin supplementation
     Dosage: 5 MILLIGRAM, 1 EVERY 1 DAYS
     Route: 042
  1283. BIOTIN [Suspect]
     Active Substance: BIOTIN
     Indication: Constipation
     Dosage: 17 MILLIGRAM, 1 EVERY 1 DAYS
     Route: 042
  1284. BIOTIN [Suspect]
     Active Substance: BIOTIN
     Dosage: UNK
     Route: 065
  1285. BETA CAROTENE [Suspect]
     Active Substance: BETA CAROTENE
     Indication: Product used for unknown indication
     Dosage: UNK
     Route: 065
  1286. DOCUSATE SODIUM [Suspect]
     Active Substance: DOCUSATE SODIUM
     Indication: Product used for unknown indication
     Dosage: UNK
     Route: 065
  1287. DOCUSATE SODIUM [Suspect]
     Active Substance: DOCUSATE SODIUM
     Dosage: UNK
     Route: 065
  1288. DOCUSATE SODIUM [Suspect]
     Active Substance: DOCUSATE SODIUM
     Dosage: UNK
     Route: 065
  1289. FLUTICASONE [Suspect]
     Active Substance: FLUTICASONE
     Indication: Product used for unknown indication
     Dosage: UNK
     Route: 065
  1290. FLUTICASONE [Suspect]
     Active Substance: FLUTICASONE
     Dosage: UNK
     Route: 065
  1291. FLUTICASONE [Suspect]
     Active Substance: FLUTICASONE
     Dosage: UNK
     Route: 065
  1292. FLUTICASONE [Suspect]
     Active Substance: FLUTICASONE
     Dosage: UNK
     Route: 065
  1293. FLUTICASONE [Suspect]
     Active Substance: FLUTICASONE
     Dosage: UNK
     Route: 065
  1294. FLUTICASONE [Suspect]
     Active Substance: FLUTICASONE
     Dosage: UNK
     Route: 065
  1295. FLUTICASONE [Suspect]
     Active Substance: FLUTICASONE
     Dosage: UNK
     Route: 065
  1296. FLUTICASONE [Suspect]
     Active Substance: FLUTICASONE
     Dosage: UNK
     Route: 065
  1297. FLUTICASONE [Suspect]
     Active Substance: FLUTICASONE
     Dosage: 1 IU INTERNATIONAL UNIT(S)
     Route: 048
  1298. FLUTICASONE [Suspect]
     Active Substance: FLUTICASONE
     Dosage: UNK
     Route: 048
  1299. HERBALS\PAULLINIA CUPANA SEED [Suspect]
     Active Substance: HERBALS\PAULLINIA CUPANA SEED
     Indication: Product used for unknown indication
     Dosage: UNK
     Route: 065
  1300. HERBALS\PAULLINIA CUPANA SEED [Suspect]
     Active Substance: HERBALS\PAULLINIA CUPANA SEED
     Indication: Nutritional supplementation
     Dosage: 17 MILLIGRAM
     Route: 042
  1301. HERBALS\PAULLINIA CUPANA SEED [Suspect]
     Active Substance: HERBALS\PAULLINIA CUPANA SEED
     Dosage: 12.5 MILLIGRAM
     Route: 042
  1302. HERBALS\PAULLINIA CUPANA SEED [Suspect]
     Active Substance: HERBALS\PAULLINIA CUPANA SEED
     Dosage: 17 MILLIGRAM
     Route: 048
  1303. HERBALS\PAULLINIA CUPANA SEED [Suspect]
     Active Substance: HERBALS\PAULLINIA CUPANA SEED
     Dosage: 17 MILLIGRAM
     Route: 048
  1304. HERBALS\PAULLINIA CUPANA SEED [Suspect]
     Active Substance: HERBALS\PAULLINIA CUPANA SEED
     Dosage: 12.5 MILLIGRAM
     Route: 065
  1305. HERBALS\PAULLINIA CUPANA SEED [Suspect]
     Active Substance: HERBALS\PAULLINIA CUPANA SEED
     Dosage: UNK
     Route: 065
  1306. HERBALS\PAULLINIA CUPANA SEED [Suspect]
     Active Substance: HERBALS\PAULLINIA CUPANA SEED
     Dosage: UNK
     Route: 065
  1307. RIBOFLAVIN [Suspect]
     Active Substance: RIBOFLAVIN
     Indication: Product used for unknown indication
     Dosage: UNK
     Route: 065
  1308. WARFARIN POTASSIUM [Suspect]
     Active Substance: WARFARIN POTASSIUM
     Indication: Thrombosis
     Dosage: 2.0 MILLIGRAM
     Route: 048
  1309. BETAMETHASONE DIPROPIONATE [Suspect]
     Active Substance: BETAMETHASONE DIPROPIONATE
     Indication: Swelling
     Dosage: UNK
     Route: 061
  1310. BETAMETHASONE DIPROPIONATE [Suspect]
     Active Substance: BETAMETHASONE DIPROPIONATE
     Dosage: 1.0 DOSAGE FORM, EVERY 1 DAYS
     Route: 061
  1311. BETAMETHASONE DIPROPIONATE [Suspect]
     Active Substance: BETAMETHASONE DIPROPIONATE
     Dosage: UNK, EVERY 1 DAYS
     Route: 061
  1312. BETAMETHASONE DIPROPIONATE [Suspect]
     Active Substance: BETAMETHASONE DIPROPIONATE
     Dosage: UNK
     Route: 065
  1313. BETAMETHASONE DIPROPIONATE [Suspect]
     Active Substance: BETAMETHASONE DIPROPIONATE
     Dosage: UNK, EVERY 1 DAYS
     Route: 061
  1314. BETAMETHASONE DIPROPIONATE [Suspect]
     Active Substance: BETAMETHASONE DIPROPIONATE
     Dosage: UNK
     Route: 061
  1315. BETAMETHASONE DIPROPIONATE [Suspect]
     Active Substance: BETAMETHASONE DIPROPIONATE
     Dosage: UNK
     Route: 065
  1316. BETAMETHASONE DIPROPIONATE [Suspect]
     Active Substance: BETAMETHASONE DIPROPIONATE
     Dosage: 1.0 DOSAGE FORM, EVERY 1 DAYS
     Route: 061
  1317. BETAMETHASONE DIPROPIONATE [Suspect]
     Active Substance: BETAMETHASONE DIPROPIONATE
     Dosage: UNK, EVERY 1 DAYS
     Route: 061
  1318. BETAMETHASONE DIPROPIONATE [Suspect]
     Active Substance: BETAMETHASONE DIPROPIONATE
     Dosage: 10 MILLIGRAM, EVERY 1 DAYS
     Route: 061
  1319. BETAMETHASONE DIPROPIONATE [Suspect]
     Active Substance: BETAMETHASONE DIPROPIONATE
     Dosage: UNK, EVERY 1 DAYS
     Route: 061
  1320. BETAMETHASONE DIPROPIONATE [Suspect]
     Active Substance: BETAMETHASONE DIPROPIONATE
     Dosage: UNK, EVERY 1 DAYS
     Route: 061
  1321. DEXTROSE [Suspect]
     Active Substance: DEXTROSE\DEXTROSE MONOHYDRATE
     Indication: Nutritional supplementation
     Dosage: 12.5 GRAM, EVERY 1 DAYS
     Route: 065
  1322. DEXTROSE [Suspect]
     Active Substance: DEXTROSE\DEXTROSE MONOHYDRATE
     Dosage: 12.5 MILLIGRAM, 1 EVERY 1 DAYS
     Route: 042
  1323. DEXTROSE [Suspect]
     Active Substance: DEXTROSE\DEXTROSE MONOHYDRATE
     Dosage: 12.5 GRAM, EVERY 1 DAYS
     Route: 065
  1324. DEXTROSE [Suspect]
     Active Substance: DEXTROSE\DEXTROSE MONOHYDRATE
     Dosage: 12.5 MILLIGRAM
     Route: 042
  1325. DEXTROSE [Suspect]
     Active Substance: DEXTROSE\DEXTROSE MONOHYDRATE
     Dosage: 12.5 GRAM, EVERY 1 DAYS
     Route: 065
  1326. DEXTROSE [Suspect]
     Active Substance: DEXTROSE\DEXTROSE MONOHYDRATE
     Dosage: 12.5 GRAM, EVERY 1 DAYS
     Route: 065
  1327. DEXTROSE [Suspect]
     Active Substance: DEXTROSE\DEXTROSE MONOHYDRATE
     Dosage: 12.5 GRAM
     Route: 065
  1328. DEXTROSE [Suspect]
     Active Substance: DEXTROSE\DEXTROSE MONOHYDRATE
     Dosage: 12.5 MILLIGRAM, EVERY 1 DAYS
     Route: 042
  1329. DEXTROSE [Suspect]
     Active Substance: DEXTROSE\DEXTROSE MONOHYDRATE
     Dosage: 12.5 MILLIGRAM, EVERY 1 DAYS
     Route: 042
  1330. DEXTROSE [Suspect]
     Active Substance: DEXTROSE\DEXTROSE MONOHYDRATE
     Dosage: 12.5 GRAM
     Route: 042
  1331. DEXTROSE [Suspect]
     Active Substance: DEXTROSE\DEXTROSE MONOHYDRATE
     Dosage: 12.5 GRAM
     Route: 042
  1332. FERRLECIT [Suspect]
     Active Substance: SODIUM FERRIC GLUCONATE COMPLEX
     Indication: Iron deficiency
     Dosage: 4.64 MILLIGRAM, 1 EVERY 4 WEEKS
     Route: 042
  1333. FIASP [Suspect]
     Active Substance: INSULIN ASPART
     Indication: Diabetes mellitus
     Dosage: UNK
     Route: 058
  1334. FIASP [Suspect]
     Active Substance: INSULIN ASPART
     Dosage: UNK (FORMULATION: SOLUTION SUBCUTANEOUS)
     Route: 048
  1335. FIASP [Suspect]
     Active Substance: INSULIN ASPART
     Dosage: UNK (FORMULATION: SOLUTION SUBCUTANEOUS)
     Route: 048
  1336. FIASP [Suspect]
     Active Substance: INSULIN ASPART
     Dosage: UNK (FORMULATION: SOLUTION SUBCUTANEOUS)
     Route: 048
  1337. FIASP [Suspect]
     Active Substance: INSULIN ASPART
     Dosage: UNK (FORMULATION: SOLUTION SUBCUTANEOUS)
     Route: 058
  1338. FIASP [Suspect]
     Active Substance: INSULIN ASPART
     Dosage: UNK (FORMULATION: SOLUTION SUBCUTANEOUS)
     Route: 058
  1339. FIASP [Suspect]
     Active Substance: INSULIN ASPART
     Dosage: UNK (FORMULATION: SOLUTION SUBCUTANEOUS)
     Route: 058
  1340. FIASP [Suspect]
     Active Substance: INSULIN ASPART
     Dosage: UNK (FORMULATION: SOLUTION SUBCUTANEOUS)
     Route: 058
  1341. FIASP [Suspect]
     Active Substance: INSULIN ASPART
     Dosage: UNK (FORMULATION: SOLUTION SUBCUTANEOUS)
     Route: 058
  1342. FIASP [Suspect]
     Active Substance: INSULIN ASPART
     Dosage: UNK (FORMULATION: SOLUTION SUBCUTANEOUS)
     Route: 058
  1343. FIASP [Suspect]
     Active Substance: INSULIN ASPART
     Dosage: UNK (FORMULATION: SOLUTION SUBCUTANEOUS)
     Route: 058
  1344. FIASP [Suspect]
     Active Substance: INSULIN ASPART
     Dosage: UNK (FORMULATION: SOLUTION SUBCUTANEOUS)
     Route: 058
  1345. FIASP [Suspect]
     Active Substance: INSULIN ASPART
     Dosage: UNK (FORMULATION: SOLUTION SUBCUTANEOUS)
     Route: 058
  1346. VASOPRESSIN [Suspect]
     Active Substance: VASOPRESSIN
     Indication: Drug therapy
     Dosage: UNK
     Route: 042
  1347. AMMONIUM CHLORIDE [Suspect]
     Active Substance: AMMONIUM CHLORIDE
     Indication: Thrombosis
     Dosage: 2.5 MILLILITER, PRN
     Route: 048
  1348. AMMONIUM CHLORIDE [Suspect]
     Active Substance: AMMONIUM CHLORIDE
     Dosage: 2.5 MILLILITER, PRN
     Route: 048
  1349. AMMONIUM CHLORIDE [Suspect]
     Active Substance: AMMONIUM CHLORIDE
     Dosage: 2.5 MILLILITER, PRN
     Route: 048
  1350. AMMONIUM CHLORIDE [Suspect]
     Active Substance: AMMONIUM CHLORIDE
     Dosage: 2.5 MILLILITER, PRN
     Route: 048
  1351. POLYETHYLENE GLYCOL 3350\POTASSIUM CHLORIDE\SODIUM BICARBONATE\SODIUM [Concomitant]
     Active Substance: POLYETHYLENE GLYCOL 3350\POTASSIUM CHLORIDE\SODIUM BICARBONATE\SODIUM CHLORIDE
     Indication: Constipation
     Dosage: UNK
     Route: 065
  1352. POLYETHYLENE GLYCOL 3350\POTASSIUM CHLORIDE\SODIUM BICARBONATE\SODIUM [Concomitant]
     Active Substance: POLYETHYLENE GLYCOL 3350\POTASSIUM CHLORIDE\SODIUM BICARBONATE\SODIUM CHLORIDE
     Dosage: 17.0 MILLIGRAM, 1 EVERY 1 DAYS
     Route: 065
  1353. DOBUTAMINE HYDROCHLORIDE [Concomitant]
     Active Substance: DOBUTAMINE HYDROCHLORIDE
     Indication: Product used for unknown indication
     Dosage: UNK
     Route: 065
  1354. DOBUTAMINE HYDROCHLORIDE [Concomitant]
     Active Substance: DOBUTAMINE HYDROCHLORIDE
     Dosage: UNK
     Route: 065
  1355. DOBUTAMINE HYDROCHLORIDE [Concomitant]
     Active Substance: DOBUTAMINE HYDROCHLORIDE
     Dosage: UNK
     Route: 065
  1356. DOBUTAMINE HYDROCHLORIDE [Concomitant]
     Active Substance: DOBUTAMINE HYDROCHLORIDE
     Dosage: UNK
     Route: 065
  1357. DOBUTAMINE HYDROCHLORIDE [Concomitant]
     Active Substance: DOBUTAMINE HYDROCHLORIDE
     Dosage: UNK
     Route: 065
  1358. DOBUTAMINE HYDROCHLORIDE [Concomitant]
     Active Substance: DOBUTAMINE HYDROCHLORIDE
     Dosage: UNK
     Route: 065
  1359. DOBUTAMINE HYDROCHLORIDE [Concomitant]
     Active Substance: DOBUTAMINE HYDROCHLORIDE
     Dosage: UNK
     Route: 042
  1360. DISODIUM HYDROGEN CITRATE [Concomitant]
     Active Substance: DISODIUM HYDROGEN CITRATE
     Indication: Thrombosis
     Dosage: UNK
     Route: 065
  1361. DISODIUM HYDROGEN CITRATE [Concomitant]
     Active Substance: DISODIUM HYDROGEN CITRATE
     Indication: Anticoagulant therapy
     Dosage: 2.5 MILLIGRAM, 1 EVERY 1 DAYS
     Route: 065
  1362. CALCITRIOL [Concomitant]
     Active Substance: CALCITRIOL
     Indication: Product used for unknown indication
     Dosage: UNK
     Route: 065
  1363. INSULIN ASPART [Concomitant]
     Active Substance: INSULIN ASPART
     Indication: Product used for unknown indication
     Dosage: UNK
     Route: 065
  1364. CHOLECALCIFEROL [Concomitant]
     Active Substance: CHOLECALCIFEROL
     Indication: Product used for unknown indication
     Dosage: UNK
     Route: 065
  1365. ALBUTEROL [Concomitant]
     Active Substance: ALBUTEROL
     Indication: Chronic obstructive pulmonary disease
     Dosage: UNK, 1 EVERY 6 HOURS
     Route: 050
  1366. ALBUTEROL [Concomitant]
     Active Substance: ALBUTEROL
     Dosage: UNK
     Route: 050
  1367. ALBUTEROL [Concomitant]
     Active Substance: ALBUTEROL
     Dosage: UNK
     Route: 050
  1368. BISACODYL [Concomitant]
     Active Substance: BISACODYL
     Indication: Constipation
     Dosage: 10 MILLIGRAM
     Route: 054
  1369. POTASSIUM CHLORATE [Concomitant]
     Active Substance: POTASSIUM CHLORATE
     Indication: Product used for unknown indication
     Dosage: UNK
     Route: 065
  1370. POTASSIUM CHLORATE [Concomitant]
     Active Substance: POTASSIUM CHLORATE
     Dosage: 17.0 MILLIGRAM, 1 EVERY 1 DAYS
     Route: 048
  1371. POTASSIUM CHLORATE [Concomitant]
     Active Substance: POTASSIUM CHLORATE
     Dosage: 17.0 GRAM, 1 EVERY 1 DAYS
     Route: 048
  1372. BETA CAROTENE [Concomitant]
     Active Substance: BETA CAROTENE
     Indication: Nutritional supplementation
     Dosage: UNK
     Route: 065
  1373. BETA CAROTENE [Concomitant]
     Active Substance: BETA CAROTENE
     Dosage: UNK
     Route: 065
  1374. BETA CAROTENE [Concomitant]
     Active Substance: BETA CAROTENE
     Dosage: UNK
     Route: 065
  1375. BETA CAROTENE [Concomitant]
     Active Substance: BETA CAROTENE
     Dosage: UNK
     Route: 065
  1376. BETA CAROTENE [Concomitant]
     Active Substance: BETA CAROTENE
     Dosage: 12.5 MILLIGRAM, EVERY 1 DAYS
     Route: 042
  1377. SIMVASTATIN [Concomitant]
     Active Substance: SIMVASTATIN
     Indication: Blood cholesterol increased
     Dosage: UNK
     Route: 065
  1378. SIMVASTATIN [Concomitant]
     Active Substance: SIMVASTATIN
     Dosage: 40 MILLIGRAM, OD
     Route: 048
  1379. POTASSIUM CHLORIDE [Concomitant]
     Active Substance: POTASSIUM CHLORIDE
     Indication: Constipation
     Dosage: 17 GRAM, OD
     Route: 048
  1380. POTASSIUM CHLORIDE [Concomitant]
     Active Substance: POTASSIUM CHLORIDE
     Dosage: UNK
     Route: 065
  1381. POTASSIUM CHLORIDE [Concomitant]
     Active Substance: POTASSIUM CHLORIDE
     Dosage: UNK
     Route: 065
  1382. POTASSIUM CHLORIDE [Concomitant]
     Active Substance: POTASSIUM CHLORIDE
     Dosage: UNK
     Route: 065
  1383. POTASSIUM CHLORIDE [Concomitant]
     Active Substance: POTASSIUM CHLORIDE
     Dosage: UNK
     Route: 065
  1384. HYDROMORPHONE [Concomitant]
     Active Substance: HYDROMORPHONE
     Indication: Analgesic therapy
     Dosage: 1 MILLIGRAM 1 EVERY 6 HOURS
     Route: 058
  1385. HYDROMORPHONE [Concomitant]
     Active Substance: HYDROMORPHONE
     Dosage: 6 MILLIGRAM 1 EVERY 6 HOURS
     Route: 058
  1386. HYDROMORPHONE [Concomitant]
     Active Substance: HYDROMORPHONE
     Dosage: 6 MILLIGRAM 1 EVERY 6 HOURS
     Route: 058
  1387. SODIUM PICOSULFATE [Concomitant]
     Active Substance: SODIUM PICOSULFATE
     Indication: Constipation
     Dosage: 12.5 MILLIGRAM, 1 EVERY 1 MONTHS
     Route: 065
  1388. SODIUM PICOSULFATE [Concomitant]
     Active Substance: SODIUM PICOSULFATE
     Indication: Analgesic therapy
     Dosage: 10.0 MILLIGRAM, EVERY 1 DAYS
     Route: 054
  1389. SODIUM PICOSULFATE [Concomitant]
     Active Substance: SODIUM PICOSULFATE
     Dosage: 10.0 MILLIGRAM, EVERY 1 DAYS
     Route: 054
  1390. SODIUM PICOSULFATE [Concomitant]
     Active Substance: SODIUM PICOSULFATE
     Dosage: 10.0 MILLIGRAM
     Route: 054
  1391. SODIUM PICOSULFATE [Concomitant]
     Active Substance: SODIUM PICOSULFATE
     Dosage: UNK
     Route: 065
  1392. SODIUM PICOSULFATE [Concomitant]
     Active Substance: SODIUM PICOSULFATE
     Dosage: 10.0 MILLIGRAM
     Route: 054
  1393. SODIUM PICOSULFATE [Concomitant]
     Active Substance: SODIUM PICOSULFATE
     Dosage: 10.0 MILLIGRAM, EVERY 1 DAYS
     Route: 054
  1394. SODIUM PICOSULFATE [Concomitant]
     Active Substance: SODIUM PICOSULFATE
     Dosage: 10.0 MILLIGRAM, EVERY 1 DAYS
     Route: 054
  1395. SODIUM PICOSULFATE [Concomitant]
     Active Substance: SODIUM PICOSULFATE
     Dosage: 10.0 MILLIGRAM, EVERY 1 DAYS
     Route: 054
  1396. SODIUM PICOSULFATE [Concomitant]
     Active Substance: SODIUM PICOSULFATE
     Dosage: 10.0 MILLIGRAM
     Route: 065
  1397. VITAMIN D NOS [Concomitant]
     Active Substance: VITAMIN D NOS
     Indication: Product used for unknown indication
     Dosage: UNK
     Route: 065
  1398. VITAMIN C [Concomitant]
     Active Substance: ASCORBIC ACID
     Indication: Product used for unknown indication
     Dosage: UNK
     Route: 065
  1399. VITAMIN C [Concomitant]
     Active Substance: ASCORBIC ACID
     Dosage: UNK
     Route: 065
  1400. VITAMIN C [Concomitant]
     Active Substance: ASCORBIC ACID
     Dosage: UNK
     Route: 065
  1401. VITAMIN C [Concomitant]
     Active Substance: ASCORBIC ACID
     Dosage: 17 GRAM, 1 EVERY 1 DAYS
     Route: 065
  1402. VITAMIN C [Concomitant]
     Active Substance: ASCORBIC ACID
     Dosage: 17 GRAM, 1 EVERY 1 DAYS
     Route: 048
  1403. VITAMIN C [Concomitant]
     Active Substance: ASCORBIC ACID
     Dosage: UNK
     Route: 065
  1404. VITAMIN C [Concomitant]
     Active Substance: ASCORBIC ACID
     Dosage: UNK
     Route: 065
  1405. VITAMIN C [Concomitant]
     Active Substance: ASCORBIC ACID
     Dosage: UNK
     Route: 065
  1406. VITAMIN C [Concomitant]
     Active Substance: ASCORBIC ACID
     Dosage: UNK
     Route: 065
  1407. BISACODYL [Concomitant]
     Active Substance: BISACODYL
     Indication: Constipation
     Dosage: 10 MILLIGRAM, 1 EVERY 1 DAYS
     Route: 054
  1408. BISACODYL [Concomitant]
     Active Substance: BISACODYL
     Dosage: 10 MILLIGRAM, 1 EVERY 1 DAYS
     Route: 054
  1409. BISACODYL [Concomitant]
     Active Substance: BISACODYL
     Dosage: 10 MILLIGRAM, 1 EVERY 1 DAYS
     Route: 054
  1410. BISACODYL [Concomitant]
     Active Substance: BISACODYL
     Dosage: 10 MILLIGRAM, 1 EVERY 1 DAYS
     Route: 054
  1411. RIBOFLAVIN 5^-PHOSPHATE SODIUM [Concomitant]
     Active Substance: RIBOFLAVIN 5^-PHOSPHATE SODIUM
     Indication: Product used for unknown indication
     Dosage: UNK
     Route: 065
  1412. BETA CAROTENE [Concomitant]
     Active Substance: BETA CAROTENE
     Indication: Product used for unknown indication
     Dosage: UNK
     Route: 065
  1413. MAGNESIUM [Suspect]
     Active Substance: MAGNESIUM
  1414. SODIUM [Suspect]
     Active Substance: SODIUM

REACTIONS (57)
  - Death [Fatal]
  - Vomiting [Fatal]
  - Sepsis [Fatal]
  - Abdominal distension [Fatal]
  - Abdominal pain [Fatal]
  - Appendicitis [Fatal]
  - Appendicolith [Fatal]
  - Ascites [Fatal]
  - Cardiogenic shock [Fatal]
  - Constipation [Fatal]
  - General physical health deterioration [Fatal]
  - Hyponatraemia [Fatal]
  - Multiple organ dysfunction syndrome [Fatal]
  - Nausea [Fatal]
  - Stress [Fatal]
  - Ventricular fibrillation [Fatal]
  - Condition aggravated [Fatal]
  - Off label use [Fatal]
  - Blood phosphorus increased [Fatal]
  - Dry mouth [Fatal]
  - Somnolence [Fatal]
  - Drug intolerance [Fatal]
  - Intentional product misuse [Fatal]
  - Blood uric acid increased [Fatal]
  - Myasthenia gravis [Fatal]
  - Blood cholesterol increased [Fatal]
  - Analgesic therapy [Fatal]
  - Thrombosis [Fatal]
  - Anaemia [Fatal]
  - Bacterial infection [Fatal]
  - Chronic obstructive pulmonary disease [Fatal]
  - Diabetes mellitus [Fatal]
  - Drug hypersensitivity [Fatal]
  - Drug therapy [Fatal]
  - Dyspnoea [Fatal]
  - Hyperphosphataemia [Fatal]
  - Hypophosphataemia [Fatal]
  - Incorrect route of product administration [Fatal]
  - Iron deficiency [Fatal]
  - Neuralgia [Fatal]
  - Pulmonary embolism [Fatal]
  - Sleep disorder [Fatal]
  - Sleep disorder therapy [Fatal]
  - Swelling [Fatal]
  - Product use in unapproved indication [Fatal]
  - Activated partial thromboplastin time prolonged [Fatal]
  - Antacid therapy [Fatal]
  - Anticoagulant therapy [Fatal]
  - Aortic stenosis [Fatal]
  - Aspartate aminotransferase increased [Fatal]
  - Bacteroides infection [Fatal]
  - End stage renal disease [Fatal]
  - Gout [Fatal]
  - Ulcer [Fatal]
  - Hyperlipidaemia [Fatal]
  - Hypertension [Fatal]
  - Drug ineffective [Fatal]
